FAERS Safety Report 23432740 (Version 6)
Quarter: 2024Q1

REPORT INFORMATION
  Report Type: Spontaneous
  Country: GB (occurrence: GB)
  Receive Date: 20240123
  Receipt Date: 20240319
  Transmission Date: 20240409
  Serious: Yes (Death, Hospitalization, Other)
  Sender: FDA-Public Use
  Company Number: GB-CELLTRION INC.-2022GB022451

PATIENT

DRUGS (1013)
  1. TRASTUZUMAB [Suspect]
     Active Substance: TRASTUZUMAB
     Indication: Breast cancer metastatic
     Dosage: 609 MG, 2/W, (CUMULATIVE DOSE OF FIRST REACTION: 5575.25 MG)
     Route: 042
     Dates: start: 20150930
  2. TRASTUZUMAB [Suspect]
     Active Substance: TRASTUZUMAB
     Dosage: 609 MG, Q3W (1799.20 MG), (CUMULATIVE DOSE TO FIRST REACTION: 929.2083 MG)
     Route: 042
     Dates: start: 20150930
  3. TRASTUZUMAB [Suspect]
     Active Substance: TRASTUZUMAB
     Dosage: 609 MG, BIW (1799.20 MG) [ CUMULATIVE DOSE TO FIRST REACTION: 1393.8125 MG]
     Route: 042
     Dates: start: 20150930
  4. TRASTUZUMAB [Suspect]
     Active Substance: TRASTUZUMAB
     Dosage: 609 MILLIGRAM, Q3W (1799.20 MG)/30-SEP-2015
     Route: 042
     Dates: start: 20150930
  5. TRASTUZUMAB [Suspect]
     Active Substance: TRASTUZUMAB
     Dosage: 1218 MILLIGRAM, QWK (609MG, 2/W)
     Route: 042
     Dates: start: 20150930
  6. TRASTUZUMAB [Suspect]
     Active Substance: TRASTUZUMAB
     Dosage: 609 MG, EVERY 3 WEEKS (CUMULATIVE DOSE FORM: 1799.20 MG)
     Route: 042
     Dates: start: 20150930
  7. TRASTUZUMAB [Suspect]
     Active Substance: TRASTUZUMAB
     Dosage: 1218 MG
     Route: 065
     Dates: start: 20151130
  8. TRASTUZUMAB [Suspect]
     Active Substance: TRASTUZUMAB
     Dosage: 609 MG, 609 MILLIGRAM, Q3WK (34482.207 MG)
  9. TRASTUZUMAB [Suspect]
     Active Substance: TRASTUZUMAB
     Dosage: 1218 MILLIGRAM, QWK (206893.25 MG)
     Route: 042
     Dates: start: 20150930
  10. TRASTUZUMAB [Suspect]
     Active Substance: TRASTUZUMAB
     Dosage: 609 MILLIGRAM, 1799.20 MG)
     Dates: start: 20150930
  11. TRASTUZUMAB [Suspect]
     Active Substance: TRASTUZUMAB
     Dosage: 1218 MG, QWK (CUMULATIVE DOSE:5575.25 MG), (ADDITIONAL INFORMATION ON DRUG (FREE TEXT): CLOZARIL ADD
     Route: 042
     Dates: start: 20150930
  12. TRASTUZUMAB [Suspect]
     Active Substance: TRASTUZUMAB
     Dosage: 420 MG, Q3W (CUMULATIVE DOSE: 820.83 MG)
     Route: 042
  13. TRASTUZUMAB [Suspect]
     Active Substance: TRASTUZUMAB
     Dosage: 840 MG, Q3W (CUMULATIVE DOSE: 2481.6667 MG
     Route: 065
  14. TRASTUZUMAB [Suspect]
     Active Substance: TRASTUZUMAB
     Dosage: 1218 MILLIGRAM, QW (609 MG, 2/W)
     Dates: start: 20150930
  15. TRASTUZUMAB [Suspect]
     Active Substance: TRASTUZUMAB
     Dosage: 609 MG, 2/W
     Route: 042
     Dates: start: 20150930
  16. TRASTUZUMAB [Suspect]
     Active Substance: TRASTUZUMAB
     Dosage: 420 MG, Q3W (CUMULATIVE DOSE: 820.83 MG)
     Route: 065
  17. TRASTUZUMAB [Suspect]
     Active Substance: TRASTUZUMAB
     Dosage: 1218 MG, CUMULATIVE DOSE (10795.25 MG)
     Route: 065
     Dates: start: 20150930
  18. TRASTUZUMAB [Suspect]
     Active Substance: TRASTUZUMAB
     Dosage: 609 MG, 2/W
     Route: 042
     Dates: start: 20150930
  19. TRASTUZUMAB [Suspect]
     Active Substance: TRASTUZUMAB
     Dosage: 1827 MILLIGRAM, QWK
     Route: 065
     Dates: start: 20150930
  20. TRASTUZUMAB [Suspect]
     Active Substance: TRASTUZUMAB
     Dosage: 609 MILLIGRAM, Q3WK (1799.20 MG)
     Route: 065
     Dates: start: 20150930
  21. TRASTUZUMAB [Suspect]
     Active Substance: TRASTUZUMAB
     Dosage: 420 MG, Q3W
     Route: 065
  22. TRASTUZUMAB [Suspect]
     Active Substance: TRASTUZUMAB
     Dosage: 840 MILLIGRAM, Q3WK, (ADDITIONAL INFORMATION ON DRUG (FREE TEXT): CLOZARIL ADDITIONAL INFO)
     Route: 065
  23. TRASTUZUMAB [Suspect]
     Active Substance: TRASTUZUMAB
     Dosage: 1827 MG, QWK (CUMULATIVE DOSE TO FIRST REACTION: 8362.875 MG), (ADDITIONAL INFORMATION ON DRUG (FREE
     Route: 065
     Dates: start: 20150930
  24. TRASTUZUMAB [Suspect]
     Active Substance: TRASTUZUMAB
     Dosage: 609 MILLIGRAM, Q3WK (CUMULATIVE DOSE TO FIRST REACTION: 929.2083 MG), (ADDITIONAL INFORMATION ON DRU
     Route: 065
     Dates: start: 20150930
  25. TRASTUZUMAB [Suspect]
     Active Substance: TRASTUZUMAB
     Dosage: 1218 MILLIGRAM, WEEKLY
     Dates: start: 20150930
  26. TRASTUZUMAB [Suspect]
     Active Substance: TRASTUZUMAB
     Dosage: 609 MILLIGRAM, Q2WK (CUMULATIVE DOSE TO FIRST REACTION: 1393.8125 MG), (ADDITIONAL INFORMATION ON DR
     Route: 042
     Dates: start: 20150930
  27. TRASTUZUMAB [Suspect]
     Active Substance: TRASTUZUMAB
     Dosage: 609 MILLIGRAM, Q2WK (ADDITIONAL INFORMATION ON DRUG (FREE TEXT): CLOZARIL ADDITIONAL INFO: OFF LABEL
     Route: 042
     Dates: start: 20150930
  28. TRASTUZUMAB [Suspect]
     Active Substance: TRASTUZUMAB
     Dosage: 609 MILLIGRAM, Q3WK; CUMULATIVE DOSE TO FIRST REACTION: 929.2083 MG, (ADDITIONAL INFORMATION ON DRUG
     Route: 065
     Dates: start: 20150930
  29. TRASTUZUMAB [Suspect]
     Active Substance: TRASTUZUMAB
     Dosage: 1218 MILLIGRAM, (ADDITIONAL INFORMATION ON DRUG (FREE TEXT): CLOZARIL ADDITIONAL INFO)
     Route: 065
     Dates: start: 20151130
  30. TRASTUZUMAB [Suspect]
     Active Substance: TRASTUZUMAB
     Dosage: 1218 MILLIGRAM, QWK (ADDITIONAL INFORMATION ON DRUG (FREE TEXT): CLOZARIL ADDITIONAL INFO: OFF LABEL
     Route: 065
     Dates: start: 20150930
  31. TRASTUZUMAB [Suspect]
     Active Substance: TRASTUZUMAB
     Dosage: 1827 MILLIGRAM, QWK (ADDITIONAL INFORMATION ON DRUG (FREE TEXT): CLOZARIL ADDITIONAL INFO: OFF LABEL
     Route: 065
     Dates: start: 20150930
  32. TRASTUZUMAB [Suspect]
     Active Substance: TRASTUZUMAB
     Dosage: 609 MG Q3WK
     Route: 065
     Dates: start: 20150930
  33. TRASTUZUMAB [Suspect]
     Active Substance: TRASTUZUMAB
     Dosage: 420 MILLIGRAM, Q3WK, (ADDITIONAL INFORMATION ON DRUG (FREE TEXT): CLOZARIL ADDITIONAL INFO)
     Route: 065
  34. TRASTUZUMAB [Suspect]
     Active Substance: TRASTUZUMAB
     Dosage: 1218 MILLIGRAM, QWK (ADDITIONAL INFORMATION ON DRUG (FREE TEXT): CLOZARIL ADDITIONAL INFO: OFF LABEL
     Route: 042
     Dates: start: 20150930
  35. TRASTUZUMAB [Suspect]
     Active Substance: TRASTUZUMAB
     Dosage: 609 MG, Q3W (1799.20 MG)
     Dates: start: 20150930
  36. TRASTUZUMAB [Suspect]
     Active Substance: TRASTUZUMAB
     Dosage: 420 MG, Q3W (CUMULATIVE DOSE: 820.83 MG)
     Dates: start: 20150930
  37. TRASTUZUMAB [Suspect]
     Active Substance: TRASTUZUMAB
     Dosage: 609 MG, 2/W
     Dates: start: 20150930
  38. TRASTUZUMAB [Suspect]
     Active Substance: TRASTUZUMAB
     Dosage: 609 MG, BIW (1799.20 MG) (CUMULATIVE DOSE TO FIRST REACTION: 2742.3125 MG)
     Route: 042
     Dates: start: 20150930
  39. TRASTUZUMAB [Suspect]
     Active Substance: TRASTUZUMAB
     Dosage: 1827 MILLIGRAM
     Route: 065
     Dates: start: 20150930
  40. TRASTUZUMAB [Suspect]
     Active Substance: TRASTUZUMAB
     Dosage: 1218 MILLIGRAM
     Route: 065
     Dates: start: 20150930
  41. TRASTUZUMAB [Suspect]
     Active Substance: TRASTUZUMAB
     Dosage: 1218 MG, QWK (CUMULATIVE DOSE:5575.25 MG), (ADDITIONAL INFORMATION ON DRUG (FREE TEXT): CLOZARIL ADD
     Route: 065
     Dates: start: 20150930
  42. TRASTUZUMAB [Suspect]
     Active Substance: TRASTUZUMAB
     Dosage: 1827 MILLIGRAM, QWK
     Dates: start: 20150930
  43. TRASTUZUMAB [Suspect]
     Active Substance: TRASTUZUMAB
     Dosage: 1827 MILLIGRAM
     Route: 065
     Dates: start: 20150930
  44. TRASTUZUMAB [Suspect]
     Active Substance: TRASTUZUMAB
     Dosage: 609 MG, 2/W
     Route: 042
     Dates: start: 20150930
  45. TRASTUZUMAB [Suspect]
     Active Substance: TRASTUZUMAB
     Dosage: 1218 MILLIGRAM
     Route: 065
     Dates: start: 20151130
  46. TRASTUZUMAB [Suspect]
     Active Substance: TRASTUZUMAB
     Dosage: 420 MG, Q3W (CUMULATIVE DOSE: 820.83 MG)
  47. TRASTUZUMAB [Suspect]
     Active Substance: TRASTUZUMAB
     Dosage: 609 MG, 2/W
     Dates: start: 20150930
  48. TRASTUZUMAB [Suspect]
     Active Substance: TRASTUZUMAB
     Dosage: 1218 MG (CUMULATIVE DOSE: 8362.875 MG)/1218 MILLIGRAM, QWK
     Route: 065
     Dates: start: 20150930
  49. TRASTUZUMAB [Suspect]
     Active Substance: TRASTUZUMAB
     Dosage: 420 MILLIGRAM, Q3WK, (CUMULATIVE DOSE: 8362.875 MG)
     Route: 065
  50. TRASTUZUMAB [Suspect]
     Active Substance: TRASTUZUMAB
     Dosage: 840 MILLIGRAM, Q3WK, (CUMULATIVE DOSE: 8362.875 MG)
     Route: 065
  51. TRASTUZUMAB [Suspect]
     Active Substance: TRASTUZUMAB
     Indication: Breast cancer metastatic
     Dosage: 609 MG Q3W (CUMULATIVE DOSE: 8362.875 MG)/609 MILLIGRAM, Q3WK
     Route: 065
     Dates: start: 20150930
  52. TRASTUZUMAB [Suspect]
     Active Substance: TRASTUZUMAB
     Dosage: 1827 MILLIGRAM, QWK (CUMULATIVE DOSE: 8362.875 MG)
     Route: 065
     Dates: start: 20150930
  53. TRASTUZUMAB [Suspect]
     Active Substance: TRASTUZUMAB
     Dosage: 609 MILLIGRAM, Q3WK
     Route: 042
     Dates: start: 20150930
  54. TRASTUZUMAB [Suspect]
     Active Substance: TRASTUZUMAB
     Dosage: 1218 MILLIGRAM, QWK
     Route: 042
     Dates: start: 20150930
  55. TRASTUZUMAB [Suspect]
     Active Substance: TRASTUZUMAB
     Dosage: 1218 MILLIGRAM
     Route: 065
     Dates: start: 20150930
  56. TRASTUZUMAB [Suspect]
     Active Substance: TRASTUZUMAB
     Dosage: 1827 MG, 1/WEEK (609 MG, 3/W, CUMULATIVE DOSE TO FIRST REACTION: 8362.875 MG, ADDITIONAL INFORMATION
     Route: 042
     Dates: start: 20150930
  57. TRASTUZUMAB [Suspect]
     Active Substance: TRASTUZUMAB
     Dosage: 609 MILLIGRAM, Q3WK (ADDITIONAL INFORMATION ON DRUG (FREE TEXT): CLOZARIL ADDITIONAL INFO: OFF LABEL
     Route: 065
  58. TRASTUZUMAB [Suspect]
     Active Substance: TRASTUZUMAB
     Dosage: 840 MILLIGRAM, Q3WK (CUMULATIVE DOSE TO FIRST REACTION: 8362.875 MG, ADDITIONAL INFORMATION ON DRUG
  59. TRASTUZUMAB [Suspect]
     Active Substance: TRASTUZUMAB
     Dosage: 1827 MILLIGRAM, QWK (CUMULATIVE DOSE TO FIRST REACTION: 8362.875 MG, ADDITIONAL INFORMATION ON DRUG
     Dates: start: 20150930
  60. TRASTUZUMAB [Suspect]
     Active Substance: TRASTUZUMAB
     Dosage: 420 MILLIGRAM, Q3WK (CUMULATIVE DOSE TO FIRST REACTION: 8362.875 MG, ADDITIONAL INFORMATION ON DRUG
  61. TRASTUZUMAB [Suspect]
     Active Substance: TRASTUZUMAB
     Dosage: 1218MG (CUMULATIVE DOSE TO FIRST REACTION: 8362.875 MG, ADDITIONAL INFORMATION ON DRUG (FREE TEXT):
     Dates: start: 20150930
  62. TRASTUZUMAB [Suspect]
     Active Substance: TRASTUZUMAB
     Dosage: 1827 MILLIGRAM, QWK (ADDITIONAL INFORMATION ON DRUG (FREE TEXT): CLOZARIL ADDITIONAL INFO: OFF LABEL
     Route: 065
     Dates: start: 20150930
  63. TRASTUZUMAB [Suspect]
     Active Substance: TRASTUZUMAB
     Dosage: 420 MILLIGRAM, Q3WK (ADDITIONAL INFORMATION ON DRUG (FREE TEXT): CLOZARIL ADDITIONAL INFO: OFF LABEL
     Route: 065
  64. TRASTUZUMAB [Suspect]
     Active Substance: TRASTUZUMAB
     Dosage: 609 MILLIGRAM, Q3WK (ADDITIONAL INFORMATION ON DRUG (FREE TEXT): CLOZARIL ADDITIONAL INFO: OFF LABEL
     Route: 042
     Dates: start: 20150930
  65. TRASTUZUMAB [Suspect]
     Active Substance: TRASTUZUMAB
     Dosage: 609 MILLIGRAM, Q2WK (ADDITIONAL INFORMATION ON DRUG (FREE TEXT): CLOZARIL ADDITIONAL INFO: OFF LABEL
     Route: 042
     Dates: start: 20150930
  66. TRASTUZUMAB [Suspect]
     Active Substance: TRASTUZUMAB
     Dosage: 1218 MILLIGRAM
     Dates: start: 20151130
  67. TRASTUZUMAB [Suspect]
     Active Substance: TRASTUZUMAB
     Dosage: 1827 MG, WE (609 MG, 3/W)
     Route: 042
     Dates: start: 20150930
  68. TRASTUZUMAB [Suspect]
     Active Substance: TRASTUZUMAB
     Dosage: 1218 MG, WE (609 MG, 2/W)
     Dates: start: 20150930
  69. TRASTUZUMAB [Suspect]
     Active Substance: TRASTUZUMAB
     Dosage: 420 MG, Q3W (CUMULATIVE DOSE: 820.83 MG)
  70. TRASTUZUMAB [Suspect]
     Active Substance: TRASTUZUMAB
     Dosage: 840 MG, Q3W (CUMULATIVE DOSE: 2481.6667 MG
  71. TRASTUZUMAB [Suspect]
     Active Substance: TRASTUZUMAB
     Dosage: 1218 MG, WE
     Route: 050
     Dates: start: 20150930
  72. TRASTUZUMAB [Suspect]
     Active Substance: TRASTUZUMAB
     Dosage: 1827 MG, QWK
     Dates: start: 20150930
  73. HALOPERIDOL [Suspect]
     Active Substance: HALOPERIDOL
     Indication: Schizophrenia
     Dosage: 40 MILLIGRAM, QD (20 MG, BID)
     Route: 048
  74. HALOPERIDOL [Suspect]
     Active Substance: HALOPERIDOL
     Dosage: 10 MG, QD/10 MILLIGRAM, QD
     Route: 048
  75. HALOPERIDOL [Suspect]
     Active Substance: HALOPERIDOL
     Dosage: 5 MILLIGRAM, BID
     Route: 048
  76. HALOPERIDOL [Suspect]
     Active Substance: HALOPERIDOL
     Dosage: 10 MILLIGRAM, BID
     Route: 048
  77. HALOPERIDOL [Suspect]
     Active Substance: HALOPERIDOL
     Dosage: 10 MG, DAILY
     Route: 048
  78. HALOPERIDOL [Suspect]
     Active Substance: HALOPERIDOL
     Dosage: 5 MG, DAILY
     Route: 048
  79. HALOPERIDOL [Suspect]
     Active Substance: HALOPERIDOL
     Dosage: 10 MG, BID
     Route: 048
  80. HALOPERIDOL [Suspect]
     Active Substance: HALOPERIDOL
     Dosage: 10 MG, BID
     Route: 048
  81. HALOPERIDOL [Suspect]
     Active Substance: HALOPERIDOL
     Dosage: 20 MILLIGRAM, QD
     Route: 048
  82. HALOPERIDOL [Suspect]
     Active Substance: HALOPERIDOL
     Dosage: 10 MILLIGRAM, QD (5 MG, BID)
     Route: 048
  83. HALOPERIDOL [Suspect]
     Active Substance: HALOPERIDOL
     Dosage: 40 MG, QD,20 MG BID
     Route: 048
  84. HALOPERIDOL [Suspect]
     Active Substance: HALOPERIDOL
     Dosage: 5 MG, BID
  85. HALOPERIDOL [Suspect]
     Active Substance: HALOPERIDOL
     Dosage: 5 MILLIGRAM, BID
     Route: 048
  86. HALOPERIDOL [Suspect]
     Active Substance: HALOPERIDOL
     Dosage: 10 MG, BID
     Route: 065
  87. HALOPERIDOL [Suspect]
     Active Substance: HALOPERIDOL
     Dosage: 10 MG, BID
     Route: 048
  88. HALOPERIDOL [Suspect]
     Active Substance: HALOPERIDOL
     Dosage: 20 MG, BID
     Route: 048
  89. HALOPERIDOL [Suspect]
     Active Substance: HALOPERIDOL
     Dosage: 20 MG, QD/20 MILLIGRAM, QD
     Route: 065
  90. HALOPERIDOL [Suspect]
     Active Substance: HALOPERIDOL
     Dosage: 10 MG, QD
     Route: 048
  91. HALOPERIDOL [Suspect]
     Active Substance: HALOPERIDOL
     Dosage: 5 MG, BID
     Route: 048
  92. HALOPERIDOL [Suspect]
     Active Substance: HALOPERIDOL
     Dosage: 5 MILLIGRAM, QD (5 MILLIGRAM, ONCE A DAY)
     Route: 048
  93. HALOPERIDOL [Suspect]
     Active Substance: HALOPERIDOL
     Dosage: 10 MILLIGRAM, QD
     Route: 048
  94. HALOPERIDOL [Suspect]
     Active Substance: HALOPERIDOL
     Dosage: 5 MG, BID
     Route: 048
  95. HALOPERIDOL [Suspect]
     Active Substance: HALOPERIDOL
     Dosage: 20 MILLIGRAM, BID (10 MILLIGRAM, BID )
     Route: 048
  96. HALOPERIDOL [Suspect]
     Active Substance: HALOPERIDOL
     Dosage: 20 MG, QD
     Route: 048
  97. HALOPERIDOL [Suspect]
     Active Substance: HALOPERIDOL
     Dosage: 10 MILLIGRAM, QD
     Route: 048
  98. HALOPERIDOL [Suspect]
     Active Substance: HALOPERIDOL
     Dosage: 10 MG, QD
     Route: 048
  99. HALOPERIDOL [Suspect]
     Active Substance: HALOPERIDOL
     Dosage: 20 MG, QD
     Route: 048
  100. HALOPERIDOL [Suspect]
     Active Substance: HALOPERIDOL
     Dosage: 10 MG, DAILY
  101. HALOPERIDOL [Suspect]
     Active Substance: HALOPERIDOL
     Dosage: 20 MILLIGRAM
     Route: 048
  102. HALOPERIDOL [Suspect]
     Active Substance: HALOPERIDOL
     Dosage: 5 MILLIGRAM, QD
     Route: 048
  103. HALOPERIDOL [Suspect]
     Active Substance: HALOPERIDOL
     Dosage: 10 MG, 5 MILLIGRAM, BID
     Route: 048
  104. HALOPERIDOL [Suspect]
     Active Substance: HALOPERIDOL
     Dosage: 40 MG, 20 MILLIGRAM, Q12H
     Route: 048
  105. HALOPERIDOL [Suspect]
     Active Substance: HALOPERIDOL
     Dosage: 5 MILLIGRAM, QD
     Route: 048
  106. HALOPERIDOL [Suspect]
     Active Substance: HALOPERIDOL
     Dosage: 10 MG, BID
  107. HALOPERIDOL [Suspect]
     Active Substance: HALOPERIDOL
     Dosage: 5 MG, BID
  108. HALOPERIDOL [Suspect]
     Active Substance: HALOPERIDOL
     Dosage: 5 MG, BID, UNIT DOSE :5 MG, FREQUENCY ; 1 , FREQUENCY TIME : 1 DAYS
     Route: 048
  109. HALOPERIDOL [Suspect]
     Active Substance: HALOPERIDOL
     Dosage: 20 MILLIGRAM
     Route: 048
  110. HALOPERIDOL [Suspect]
     Active Substance: HALOPERIDOL
     Dosage: 10 MG, BID, UNIT DOSE : 10 MG, FREQUENCY ; 1 , FREQUENCY TIME : 1 DAYS,
  111. HALOPERIDOL [Suspect]
     Active Substance: HALOPERIDOL
     Dosage: 20 MILLIGRAM DAILY; UNIT DOSE : 20 MG, FREQUENCY ; 1 , FREQUENCY TIME : 1 DAYS)
  112. HALOPERIDOL [Suspect]
     Active Substance: HALOPERIDOL
     Dosage: 5 MILLIGRAM, BID, UNIT DOSE : 10 MG, FREQUENCY ; 1 , FREQUENCY TIME : 1 DAYS,
     Route: 048
  113. HALOPERIDOL [Suspect]
     Active Substance: HALOPERIDOL
     Dosage: 20 MILLIGRAM, ONCE A DAY (10 MILLIGRAM, BID)
     Route: 048
  114. HALOPERIDOL [Suspect]
     Active Substance: HALOPERIDOL
     Dosage: 10 MILLIGRAM, ONCE A DAY
     Route: 048
  115. HALOPERIDOL [Suspect]
     Active Substance: HALOPERIDOL
     Dosage: 40 MILLIGRAM, ONCE A DAY (20MG BID)
     Route: 048
  116. HALOPERIDOL [Suspect]
     Active Substance: HALOPERIDOL
     Dosage: 10 MILLIGRAM, ONCE A DAY (5 MILLIGRAM, BID)
     Route: 048
  117. HALOPERIDOL [Suspect]
     Active Substance: HALOPERIDOL
     Dosage: 10 MILLIGRAM, TWO TIMES A DAY (5 MG, BID)
     Route: 048
  118. HALOPERIDOL [Suspect]
     Active Substance: HALOPERIDOL
     Dosage: 20 MILLIGRAM, TWO TIMES A DAY (10 MG, 2X/DAY)
     Route: 048
  119. HALOPERIDOL [Suspect]
     Active Substance: HALOPERIDOL
     Dosage: 5 MILLIGRAM, ONCE A DAY
     Route: 048
  120. HALOPERIDOL [Suspect]
     Active Substance: HALOPERIDOL
     Dosage: 5 MILLIGRAM, TWO TIMES A DAY (5 MG, BID)
     Route: 048
  121. HALOPERIDOL [Suspect]
     Active Substance: HALOPERIDOL
     Dosage: 5 MG, BID 5 MILLIGRAM, TWO TIMES A DAY (5 MG, BID)
     Route: 048
  122. HALOPERIDOL [Suspect]
     Active Substance: HALOPERIDOL
     Dosage: 40 MG, QD
     Route: 048
  123. HALOPERIDOL [Suspect]
     Active Substance: HALOPERIDOL
     Indication: Schizophrenia
     Dosage: 5 MG
     Route: 048
  124. HALOPERIDOL [Suspect]
     Active Substance: HALOPERIDOL
     Dosage: 10 MG, BID
     Route: 048
  125. HALOPERIDOL [Suspect]
     Active Substance: HALOPERIDOL
     Dosage: 10 MG, QD
     Route: 048
  126. HALOPERIDOL [Suspect]
     Active Substance: HALOPERIDOL
     Dosage: 20 MG, QD
     Route: 048
  127. HALOPERIDOL [Suspect]
     Active Substance: HALOPERIDOL
     Dosage: 40 MG
     Route: 048
  128. HALOPERIDOL [Suspect]
     Active Substance: HALOPERIDOL
     Dosage: 20 MG
     Route: 048
  129. HALOPERIDOL [Suspect]
     Active Substance: HALOPERIDOL
     Dosage: UNK
  130. HALOPERIDOL [Suspect]
     Active Substance: HALOPERIDOL
     Dosage: 10 MILLIGRAM, ONCE A DAY (5 MILLIGRAM, BID)
  131. HALOPERIDOL [Suspect]
     Active Substance: HALOPERIDOL
     Dosage: 10 MG, QD
     Route: 048
  132. HALOPERIDOL [Suspect]
     Active Substance: HALOPERIDOL
     Dosage: 40 MILLIGRAM, ONCE A DAY (20MG BID)
     Route: 048
  133. HALOPERIDOL [Suspect]
     Active Substance: HALOPERIDOL
     Dosage: 20 MILLIGRAM, QD (10 MILLIGRAM, BID)
     Route: 048
  134. HALOPERIDOL [Suspect]
     Active Substance: HALOPERIDOL
     Dosage: 10 MILLIGRAM, QD (5 MILLIGRAM, BID)
     Route: 048
  135. HALOPERIDOL [Suspect]
     Active Substance: HALOPERIDOL
     Dosage: UNK
  136. HALOPERIDOL [Suspect]
     Active Substance: HALOPERIDOL
     Dosage: 40 MILLIGRAM, QD (20MG BID)
     Route: 048
  137. HALOPERIDOL [Suspect]
     Active Substance: HALOPERIDOL
     Dosage: 5 MG, BID
  138. HALOPERIDOL [Suspect]
     Active Substance: HALOPERIDOL
     Dosage: 5 MILLIGRAM, ONCE A DAY
     Route: 065
  139. HALOPERIDOL [Suspect]
     Active Substance: HALOPERIDOL
     Dosage: 5 MG, BID
  140. HALOPERIDOL [Suspect]
     Active Substance: HALOPERIDOL
     Dosage: 5 MILLIGRAM, QD
     Route: 048
  141. HALOPERIDOL [Suspect]
     Active Substance: HALOPERIDOL
     Dosage: 10 MILLIGRAM, TWO TIMES A DAY (5 MG, BID)
     Route: 048
  142. HALOPERIDOL [Suspect]
     Active Substance: HALOPERIDOL
     Dosage: 20 MILLIGRAM, TWO TIMES A DAY (10 MG, 2X/DAY)
     Route: 048
  143. HALOPERIDOL [Suspect]
     Active Substance: HALOPERIDOL
     Dosage: 5 MILLIGRAM, TWO TIMES A DAY (5 MG, BID)
  144. HALOPERIDOL [Suspect]
     Active Substance: HALOPERIDOL
     Dosage: 20 MG, QD
     Route: 048
  145. HALOPERIDOL [Suspect]
     Active Substance: HALOPERIDOL
     Dosage: 20 MILLIGRAM, TWO TIMES A DAY (10 MG, 2X/DAY)
     Route: 048
  146. HALOPERIDOL [Suspect]
     Active Substance: HALOPERIDOL
     Dosage: 10 MILLIGRAM, QD
     Route: 048
  147. HALOPERIDOL [Suspect]
     Active Substance: HALOPERIDOL
     Dosage: 40 MILLIGRAM, QD
     Route: 048
  148. HALOPERIDOL [Suspect]
     Active Substance: HALOPERIDOL
     Dosage: 10 MG, BID
     Route: 048
  149. HALOPERIDOL [Suspect]
     Active Substance: HALOPERIDOL
     Dosage: 5 MG, BID
     Route: 048
  150. HALOPERIDOL [Suspect]
     Active Substance: HALOPERIDOL
     Dosage: 5 MG, BID
     Route: 065
  151. HALOPERIDOL [Suspect]
     Active Substance: HALOPERIDOL
     Dosage: 20 MILLIGRAM, QD (10 MILLIGRAM, BID)
     Route: 065
  152. HALOPERIDOL [Suspect]
     Active Substance: HALOPERIDOL
     Dosage: 20 MG
     Route: 048
  153. HALOPERIDOL [Suspect]
     Active Substance: HALOPERIDOL
     Dosage: 40 MILLIGRAM, QD
     Route: 048
  154. HALOPERIDOL [Suspect]
     Active Substance: HALOPERIDOL
     Dosage: 10 MILLIGRAM, BID
     Route: 048
  155. HALOPERIDOL [Suspect]
     Active Substance: HALOPERIDOL
     Dosage: 20 MILLIGRAM, BID / 20 MILLIGRAM, Q12H
     Route: 048
  156. HALOPERIDOL [Suspect]
     Active Substance: HALOPERIDOL
     Dosage: 20 MILLIGRAM, BID 10 MG, 2X/DAY)
     Route: 065
  157. HALOPERIDOL [Suspect]
     Active Substance: HALOPERIDOL
     Dosage: 20 MG, QD (10 MILLIGRAM, TWO TIMES A DAY (5 MG, BID))
     Route: 048
  158. HALOPERIDOL [Suspect]
     Active Substance: HALOPERIDOL
     Dosage: 40 MG, QD (40 MILLIGRAM, QD, 20 MILLIGRAM BID)
     Route: 065
  159. HALOPERIDOL [Suspect]
     Active Substance: HALOPERIDOL
     Dosage: 20 MILLIGRAM, QD
     Route: 065
  160. HALOPERIDOL [Suspect]
     Active Substance: HALOPERIDOL
     Indication: Product used for unknown indication
     Dosage: 20 MILLIGRAM, QD, (ADDITIONAL INFORMATION ON DRUG (FREE TEXT): CLOZARIL ADDITIONAL INFO)
     Route: 048
  161. HALOPERIDOL [Suspect]
     Active Substance: HALOPERIDOL
     Dosage: 20 MILLIGRAM, BID, (ADDITIONAL INFORMATION ON DRUG (FREE TEXT): CLOZARIL ADDITIONAL INFO)
     Route: 048
  162. HALOPERIDOL [Suspect]
     Active Substance: HALOPERIDOL
     Dosage: 5 MILLIGRAM, QD, (ADDITIONAL INFORMATION ON DRUG (FREE TEXT): CLOZARIL ADDITIONAL INFO)
     Route: 048
  163. HALOPERIDOL [Suspect]
     Active Substance: HALOPERIDOL
     Dosage: 10 MILLIGRAM, QD, (ADDITIONAL INFORMATION ON DRUG (FREE TEXT): CLOZARIL ADDITIONAL INFO)
     Route: 048
  164. HALOPERIDOL [Suspect]
     Active Substance: HALOPERIDOL
     Dosage: 5 MILLIGRAM, BID, (ADDITIONAL INFORMATION ON DRUG (FREE TEXT): CLOZARIL ADDITIONAL INFO)
     Route: 048
  165. HALOPERIDOL [Suspect]
     Active Substance: HALOPERIDOL
     Dosage: 20 MILLIGRAM, (ADDITIONAL INFORMATION ON DRUG (FREE TEXT): CLOZARIL ADDITIONAL INFO)
     Route: 048
  166. HALOPERIDOL [Suspect]
     Active Substance: HALOPERIDOL
     Dosage: 10 MILLIGRAM, (ADDITIONAL INFORMATION ON DRUG (FREE TEXT): CLOZARIL ADDITIONAL INFO)
     Route: 048
  167. HALOPERIDOL [Suspect]
     Active Substance: HALOPERIDOL
     Dosage: 20 MILLIGRAM, QD, (ADDITIONAL INFORMATION ON DRUG (FREE TEXT): CLOZARIL ADDITIONAL INFO)
     Route: 048
  168. HALOPERIDOL [Suspect]
     Active Substance: HALOPERIDOL
     Dosage: 40 MILLIGRAM, QD, (ADDITIONAL INFORMATION ON DRUG (FREE TEXT): CLOZARIL ADDITIONAL INFO)
     Route: 048
  169. HALOPERIDOL [Suspect]
     Active Substance: HALOPERIDOL
     Dosage: 20 MILLIGRAM, QD, (ADDITIONAL INFORMATION ON DRUG (FREE TEXT): CLOZARIL ADDITIONAL INFO)
     Route: 048
  170. HALOPERIDOL [Suspect]
     Active Substance: HALOPERIDOL
     Dosage: 10 MILLIGRAM, QD, (ADDITIONAL INFORMATION ON DRUG (FREE TEXT): CLOZARIL ADDITIONAL INFO)
     Route: 048
  171. HALOPERIDOL [Suspect]
     Active Substance: HALOPERIDOL
     Dosage: 40 MILLIGRAM, QD, (ADDITIONAL INFORMATION ON DRUG (FREE TEXT): CLOZARIL ADDITIONAL INFO)
     Route: 048
  172. HALOPERIDOL [Suspect]
     Active Substance: HALOPERIDOL
     Dosage: 10 MILLIGRAM, QD, (ADDITIONAL INFORMATION ON DRUG (FREE TEXT): CLOZARIL ADDITIONAL INFO)
     Route: 048
  173. HALOPERIDOL [Suspect]
     Active Substance: HALOPERIDOL
     Dosage: 5 MILLIGRAM, QD, (ADDITIONAL INFORMATION ON DRUG (FREE TEXT): CLOZARIL ADDITIONAL INFO)
     Route: 048
  174. HALOPERIDOL [Suspect]
     Active Substance: HALOPERIDOL
     Dosage: 10 MILLIGRAM, QD, (ADDITIONAL INFORMATION ON DRUG (FREE TEXT): CLOZARIL ADDITIONAL INFO)
     Route: 048
  175. HALOPERIDOL [Suspect]
     Active Substance: HALOPERIDOL
     Dosage: 20 MILLIGRAM, (ADDITIONAL INFORMATION ON DRUG (FREE TEXT): CLOZARIL ADDITIONAL INFO)
     Route: 048
  176. HALOPERIDOL [Suspect]
     Active Substance: HALOPERIDOL
     Dosage: 5 MILLIGRAM, BID (ADDITIONAL INFORMATION ON DRUG (FREE TEXT): CLOZARIL ADDITIONAL INFO)
     Route: 048
  177. HALOPERIDOL [Suspect]
     Active Substance: HALOPERIDOL
     Dosage: 5 MILLIGRAM, QD (ADDITIONAL INFORMATION ON DRUG (FREE TEXT): CLOZARIL ADDITIONAL INFO)
     Route: 048
  178. HALOPERIDOL [Suspect]
     Active Substance: HALOPERIDOL
     Indication: Schizophrenia
     Dosage: 40 MG, QD(ADDITIONAL INFORMATION ON DRUG (FREE TEXT): CLOZARIL ADDITIONAL INFO)
     Route: 048
  179. HALOPERIDOL [Suspect]
     Active Substance: HALOPERIDOL
     Indication: Schizophrenia
     Dosage: 10 MG, QD (5MG,BID)
  180. HALOPERIDOL [Suspect]
     Active Substance: HALOPERIDOL
     Dosage: 10 MG, QD (5MILLIGRAM, BID (2X/DAY))
  181. HALOPERIDOL [Suspect]
     Active Substance: HALOPERIDOL
     Dosage: 40 MG, QD,20MG BID
  182. HALOPERIDOL [Suspect]
     Active Substance: HALOPERIDOL
     Dosage: 20 MG, QD (10 MG, BID(2X/DAY))
  183. HALOPERIDOL [Suspect]
     Active Substance: HALOPERIDOL
     Dosage: 5 MILLIGRAM, ONCE A DAY
  184. HALOPERIDOL [Suspect]
     Active Substance: HALOPERIDOL
     Dosage: 5 MILLIGRAM, ONCE A DAY
  185. HALOPERIDOL [Suspect]
     Active Substance: HALOPERIDOL
     Dosage: 20 MG, QD
  186. HALOPERIDOL [Suspect]
     Active Substance: HALOPERIDOL
     Dosage: 10 MG, QD
  187. HALOPERIDOL [Suspect]
     Active Substance: HALOPERIDOL
     Dosage: 40 MILLIGRAM, ONCE A DAY (20MG BID)
  188. HALOPERIDOL [Suspect]
     Active Substance: HALOPERIDOL
     Dosage: (10 MG, BID)
  189. HALOPERIDOL [Suspect]
     Active Substance: HALOPERIDOL
     Dosage: 40 MG, QD
  190. HALOPERIDOL [Suspect]
     Active Substance: HALOPERIDOL
     Dosage: 10 MG, QD
  191. HALOPERIDOL [Suspect]
     Active Substance: HALOPERIDOL
     Dosage: 10 MG, QD (5 MILLIGRAM, TWO TIMES A DAY (5 MG, BID))
  192. HALOPERIDOL [Suspect]
     Active Substance: HALOPERIDOL
     Dosage: 20 MG, QD
  193. HALOPERIDOL [Suspect]
     Active Substance: HALOPERIDOL
     Dosage: 10 MG, QD, 5 MILLIGRAM, BID
  194. HALOPERIDOL [Suspect]
     Active Substance: HALOPERIDOL
     Dosage: 10 MG, QD
  195. HALOPERIDOL [Suspect]
     Active Substance: HALOPERIDOL
     Dosage: 5 MG, BID
  196. HALOPERIDOL [Suspect]
     Active Substance: HALOPERIDOL
     Dosage: 10 MG, QD
  197. HALOPERIDOL [Suspect]
     Active Substance: HALOPERIDOL
     Dosage: 10 MG, QD (10 MILLIGRAM, ONCE A DAY (5 MILLIGRAM, BID))
  198. HALOPERIDOL [Suspect]
     Active Substance: HALOPERIDOL
     Dosage: 5 MG
  199. HALOPERIDOL [Suspect]
     Active Substance: HALOPERIDOL
     Dosage: 20 MG, QD
  200. HALOPERIDOL [Suspect]
     Active Substance: HALOPERIDOL
     Dosage: 20 MG, QD
  201. HALOPERIDOL [Suspect]
     Active Substance: HALOPERIDOL
     Dosage: 40 MG, QD (20 MILLIGRAM, TWO TIMES A DAY (10 MG, 2X/DAY))
  202. HALOPERIDOL [Suspect]
     Active Substance: HALOPERIDOL
     Dosage: 20 MG, QD
  203. HALOPERIDOL [Suspect]
     Active Substance: HALOPERIDOL
     Dosage: 5 MILLIGRAM, ONCE A DAY
  204. HALOPERIDOL [Suspect]
     Active Substance: HALOPERIDOL
     Dosage: 10 MG, QD
  205. HALOPERIDOL [Suspect]
     Active Substance: HALOPERIDOL
     Dosage: 5 MG, BID
  206. HALOPERIDOL [Suspect]
     Active Substance: HALOPERIDOL
     Dosage: 20 MILLIGRAM, ONCE A DAY (10 MILLIGRAM, BID)
  207. HALOPERIDOL [Suspect]
     Active Substance: HALOPERIDOL
     Dosage: UNK
  208. LORAZEPAM [Suspect]
     Active Substance: LORAZEPAM
     Indication: Schizophrenia
     Dosage: 1 MG ADDITIONAL INFO: OFF LABEL USE
     Route: 048
  209. LORAZEPAM [Suspect]
     Active Substance: LORAZEPAM
     Indication: Schizophrenia
     Dosage: 1 MG ADDITIONAL INFO: OFF LABEL USE
     Route: 048
  210. LORAZEPAM [Suspect]
     Active Substance: LORAZEPAM
     Dosage: 1 MG ADDITIONAL INFO: OFF LABEL USE
     Route: 048
  211. LORAZEPAM [Suspect]
     Active Substance: LORAZEPAM
     Dosage: 1 MG ADDITIONAL INFO: OFF LABEL USE
     Route: 048
  212. LORAZEPAM [Suspect]
     Active Substance: LORAZEPAM
     Dosage: 1 MG ADDITIONAL INFO: OFF LABEL USE
     Route: 048
  213. LORAZEPAM [Suspect]
     Active Substance: LORAZEPAM
     Dosage: 1 MG ADDITIONAL INFO: OFF LABEL USE
     Route: 048
  214. LORAZEPAM [Suspect]
     Active Substance: LORAZEPAM
     Dosage: 1 MG ADDITIONAL INFO: OFF LABEL USE
     Route: 048
  215. LORAZEPAM [Suspect]
     Active Substance: LORAZEPAM
     Dosage: 1 MG ADDITIONAL INFO: OFF LABEL USE
     Route: 048
  216. LORAZEPAM [Suspect]
     Active Substance: LORAZEPAM
     Dosage: 1 MG ADDITIONAL INFO: OFF LABEL USE
     Route: 048
  217. LORAZEPAM [Suspect]
     Active Substance: LORAZEPAM
     Dosage: 1 MG ADDITIONAL INFO: OFF LABEL USE
     Route: 048
  218. LORAZEPAM [Suspect]
     Active Substance: LORAZEPAM
     Dosage: UNK, TABLET (UNCOATED, ORAL)
  219. LORAZEPAM [Suspect]
     Active Substance: LORAZEPAM
     Dosage: 1 MG, (ADDITIONAL INFORMATION ON DRUG (FREE TEXT): CLOZARIL ADDITIONAL INFO)
     Route: 048
  220. LORAZEPAM [Suspect]
     Active Substance: LORAZEPAM
     Dosage: 1 MG, UNKNOWN, (ADDITIONAL INFORMATION ON DRUG (FREE TEXT): CLOZARIL ADDITIONAL INFO)
     Route: 048
  221. LORAZEPAM [Suspect]
     Active Substance: LORAZEPAM
     Dosage: UNK
     Route: 050
  222. LORAZEPAM [Suspect]
     Active Substance: LORAZEPAM
     Dosage: 1 MG, UNKNOWN, (ADDITIONAL INFORMATION ON DRUG (FREE TEXT): ADDITIONAL INFO: OFF LABEL USE)
     Route: 048
  223. LORAZEPAM [Suspect]
     Active Substance: LORAZEPAM
     Dosage: ADDITIONAL INFO: OFF LABEL USE
  224. LORAZEPAM [Suspect]
     Active Substance: LORAZEPAM
     Dosage: 1 MILLIGRAM, UNKNOWN
     Route: 048
  225. LORAZEPAM [Suspect]
     Active Substance: LORAZEPAM
     Dosage: 1 MILLIGRAM
     Route: 048
  226. LORAZEPAM [Suspect]
     Active Substance: LORAZEPAM
     Dosage: 1 MILLIGRAM
     Route: 048
  227. LORAZEPAM [Suspect]
     Active Substance: LORAZEPAM
     Dosage: 1 MILLIGRAM
     Route: 048
  228. LORAZEPAM [Suspect]
     Active Substance: LORAZEPAM
     Dosage: 1 MILLIGRAM
     Route: 048
  229. LORAZEPAM [Suspect]
     Active Substance: LORAZEPAM
     Dosage: UNK
     Route: 048
  230. LORAZEPAM [Suspect]
     Active Substance: LORAZEPAM
     Dosage: 1 MILLIGRAM
     Route: 048
  231. LORAZEPAM [Suspect]
     Active Substance: LORAZEPAM
     Dosage: 1 MILLIGRAM
     Route: 048
  232. LORAZEPAM [Suspect]
     Active Substance: LORAZEPAM
     Dosage: 1 MILLIGRAM
     Route: 048
  233. LORAZEPAM [Suspect]
     Active Substance: LORAZEPAM
     Dosage: UNK
  234. LORAZEPAM [Suspect]
     Active Substance: LORAZEPAM
     Indication: Schizophrenia
     Dosage: 1 MG, (ADITIONAL INFORMATION ON DRUG (FREE TEXT): CLOZARIL,ADDITIONAL INFO: OFF LABEL USE, ADDITIONA
     Route: 048
  235. LORAZEPAM [Suspect]
     Active Substance: LORAZEPAM
     Indication: Schizophrenia
     Dosage: 1 MG;
  236. LORAZEPAM [Suspect]
     Active Substance: LORAZEPAM
     Indication: Schizophrenia
     Dosage: 1 MG/1 MILLIGRAM
     Route: 048
  237. LORAZEPAM [Suspect]
     Active Substance: LORAZEPAM
     Dosage: 1 MG;
  238. LORAZEPAM [Suspect]
     Active Substance: LORAZEPAM
     Dosage: UNK
  239. LORAZEPAM [Suspect]
     Active Substance: LORAZEPAM
     Dosage: 1 MG;
  240. LORAZEPAM [Suspect]
     Active Substance: LORAZEPAM
     Dosage: 1 MG;
  241. LORAZEPAM [Suspect]
     Active Substance: LORAZEPAM
     Dosage: 1 MG;
  242. LORAZEPAM [Suspect]
     Active Substance: LORAZEPAM
     Dosage: 1 MG;
  243. LORAZEPAM [Suspect]
     Active Substance: LORAZEPAM
     Dosage: 1 MG;
  244. LORAZEPAM [Suspect]
     Active Substance: LORAZEPAM
     Dosage: 1 MILLIGRAM, (ADITIONAL INFORMATION ON DRUG (FREE TEXT): CLOZARIL,ADDITIONAL INFO: OFF LABEL USE, AD
     Route: 048
  245. LORAZEPAM [Suspect]
     Active Substance: LORAZEPAM
     Dosage: 1 MILLIGRAM, (ADITIONAL INFORMATION ON DRUG (FREE TEXT): CLOZARIL,ADDITIONAL INFO: OFF LABEL USE, AD
     Route: 048
  246. LORAZEPAM [Suspect]
     Active Substance: LORAZEPAM
     Dosage: UNK
     Route: 048
  247. LORAZEPAM [Suspect]
     Active Substance: LORAZEPAM
     Dosage: 1 MILLIGRAM, (ADITIONAL INFORMATION ON DRUG (FREE TEXT): CLOZARIL,ADDITIONAL INFO: OFF LABEL USE, AD
     Route: 048
  248. LORAZEPAM [Suspect]
     Active Substance: LORAZEPAM
     Dosage: 1 MILLIGRAM, (ADITIONAL INFORMATION ON DRUG (FREE TEXT): CLOZARIL,ADDITIONAL INFO: OFF LABEL USE, AD
     Route: 048
  249. LORAZEPAM [Suspect]
     Active Substance: LORAZEPAM
     Dosage: UNK, (ADDITIONAL INFORMATION ON DRUG (FREE TEXT): CLOZARIL, ADDITIONAL INFO: OFF LABEL USE, ADDITION
     Route: 050
  250. LORAZEPAM [Suspect]
     Active Substance: LORAZEPAM
     Dosage: 1 MILLIGRAM, (ADITIONAL INFORMATION ON DRUG (FREE TEXT): CLOZARIL,ADDITIONAL INFO: OFF LABEL USE, AD
     Route: 048
  251. LORAZEPAM [Suspect]
     Active Substance: LORAZEPAM
     Dosage: 1 MILLIGRAM, (ADITIONAL INFORMATION ON DRUG (FREE TEXT): CLOZARIL,ADDITIONAL INFO: OFF LABEL USE, AD
     Route: 048
  252. LORAZEPAM [Suspect]
     Active Substance: LORAZEPAM
     Dosage: 1 MILLIGRAM, (ADITIONAL INFORMATION ON DRUG (FREE TEXT): CLOZARIL,ADDITIONAL INFO: OFF LABEL USE, AD
     Route: 048
  253. LORAZEPAM [Suspect]
     Active Substance: LORAZEPAM
     Dosage: 1 MILLIGRAM, (ADITIONAL INFORMATION ON DRUG (FREE TEXT): CLOZARIL,ADDITIONAL INFO: OFF LABEL USE, AD
     Route: 048
  254. LORAZEPAM [Suspect]
     Active Substance: LORAZEPAM
     Dosage: 1 MILLIGRAM, (ADITIONAL INFORMATION ON DRUG (FREE TEXT): CLOZARIL,ADDITIONAL INFO: OFF LABEL USE, AD
     Route: 048
  255. LORAZEPAM [Suspect]
     Active Substance: LORAZEPAM
     Dosage: 1 MILLIGRAM, (ADITIONAL INFORMATION ON DRUG (FREE TEXT): CLOZARIL,ADDITIONAL INFO: OFF LABEL USE, AD
     Route: 048
  256. LORAZEPAM [Suspect]
     Active Substance: LORAZEPAM
     Dosage: 1 MILLIGRAM, (ADITIONAL INFORMATION ON DRUG (FREE TEXT): CLOZARIL,ADDITIONAL INFO: OFF LABEL USE, AD
     Route: 048
  257. LORAZEPAM [Suspect]
     Active Substance: LORAZEPAM
     Dosage: MEDICATION ERROR, MISUSE, ABUSE, OFF LABEL USE, OVERDOSE
     Route: 048
  258. ARIPIPRAZOLE [Suspect]
     Active Substance: ARIPIPRAZOLE
     Indication: Schizophrenia
     Dosage: 5 MG, (ADDITIONAL INFORMATION ON DRUG (FREE TEXT): ADDITIONAL INFO: OFF LABEL USE)
     Route: 048
  259. ARIPIPRAZOLE [Suspect]
     Active Substance: ARIPIPRAZOLE
     Dosage: UNK
  260. ARIPIPRAZOLE [Suspect]
     Active Substance: ARIPIPRAZOLE
     Dosage: 5 MG, (ADDITIONAL INFORMATION ON DRUG (FREE TEXT): ADDITIONAL INFO: OFF LABEL USE)
     Route: 048
  261. ARIPIPRAZOLE [Suspect]
     Active Substance: ARIPIPRAZOLE
     Dosage: 5 MG
     Route: 048
  262. ARIPIPRAZOLE [Suspect]
     Active Substance: ARIPIPRAZOLE
     Dosage: 5 MG
     Route: 048
  263. ARIPIPRAZOLE [Suspect]
     Active Substance: ARIPIPRAZOLE
     Dosage: 5 MG
     Route: 065
  264. ARIPIPRAZOLE [Suspect]
     Active Substance: ARIPIPRAZOLE
     Dosage: 5 MG; ADDITIONAL INFORMATION ON DRUG (FREE TEXT): CLOZARIL ADDITIONAL INFO: OFF LABEL USE
     Route: 048
  265. ARIPIPRAZOLE [Suspect]
     Active Substance: ARIPIPRAZOLE
     Dosage: 5 MG; ADDITIONAL INFORMATION ON DRUG (FREE TEXT): CLOZARIL ADDITIONAL INFO: OFF LABEL USE
     Route: 048
  266. ARIPIPRAZOLE [Suspect]
     Active Substance: ARIPIPRAZOLE
     Dosage: 5 MG; ADDITIONAL INFORMATION ON DRUG (FREE TEXT): CLOZARIL ADDITIONAL INFO: OFF LABEL USE
     Route: 048
  267. ARIPIPRAZOLE [Suspect]
     Active Substance: ARIPIPRAZOLE
     Dosage: 5 MG; ADDITIONAL INFORMATION ON DRUG (FREE TEXT): CLOZARIL ADDITIONAL INFO: OFF LABEL USE
     Route: 048
  268. ARIPIPRAZOLE [Suspect]
     Active Substance: ARIPIPRAZOLE
     Dosage: 5 MG; ADDITIONAL INFORMATION ON DRUG (FREE TEXT): CLOZARIL ADDITIONAL INFO: OFF LABEL USE
     Route: 048
  269. ARIPIPRAZOLE [Suspect]
     Active Substance: ARIPIPRAZOLE
     Dosage: 5 MG
     Route: 048
  270. ARIPIPRAZOLE [Suspect]
     Active Substance: ARIPIPRAZOLE
     Dosage: 5 MILLIGRAM
     Route: 048
  271. ARIPIPRAZOLE [Suspect]
     Active Substance: ARIPIPRAZOLE
     Dosage: 5 MILLIGRAM
     Route: 048
  272. ARIPIPRAZOLE [Suspect]
     Active Substance: ARIPIPRAZOLE
     Dosage: 5 MILLIGRAM
     Route: 048
  273. ARIPIPRAZOLE [Suspect]
     Active Substance: ARIPIPRAZOLE
     Dosage: 5 MILLIGRAM
     Route: 048
  274. ARIPIPRAZOLE [Suspect]
     Active Substance: ARIPIPRAZOLE
     Dosage: 5 MILLIGRAM
     Route: 048
  275. ARIPIPRAZOLE [Suspect]
     Active Substance: ARIPIPRAZOLE
     Dosage: UNK, (ADDITIONAL INFORMATION ON DRUG (FREE TEXT): ADDITIONAL INFO: OFF LABEL USE)
     Route: 048
  276. ARIPIPRAZOLE [Suspect]
     Active Substance: ARIPIPRAZOLE
     Indication: Schizophrenia
     Dosage: 5 MILLIGRAM
     Route: 065
  277. ARIPIPRAZOLE [Suspect]
     Active Substance: ARIPIPRAZOLE
     Dosage: 5 MILLIGRAM
     Route: 065
  278. ARIPIPRAZOLE [Suspect]
     Active Substance: ARIPIPRAZOLE
     Dosage: 5 MILLIGRAM
     Route: 065
  279. ARIPIPRAZOLE [Suspect]
     Active Substance: ARIPIPRAZOLE
     Dosage: 5 MILLIGRAM
     Route: 065
  280. ARIPIPRAZOLE [Suspect]
     Active Substance: ARIPIPRAZOLE
     Dosage: 5 MILLIGRAM, (ADDITIONAL INFORMATION ON DRUG (FREE TEXT): CLOZARIL, ADDITIONAL INFO: OFF LABEL USE,
     Route: 048
  281. ARIPIPRAZOLE [Suspect]
     Active Substance: ARIPIPRAZOLE
     Dosage: 5 MILLIGRAM, (ADDITIONAL INFORMATION ON DRUG (FREE TEXT): CLOZARIL, ADDITIONAL INFO: OFF LABEL USE,
     Route: 048
  282. ARIPIPRAZOLE [Suspect]
     Active Substance: ARIPIPRAZOLE
     Dosage: 5 MILLIGRAM, (ADDITIONAL INFORMATION ON DRUG (FREE TEXT): CLOZARIL, ADDITIONAL INFO: OFF LABEL USE,
     Route: 048
  283. ARIPIPRAZOLE [Suspect]
     Active Substance: ARIPIPRAZOLE
     Dosage: 5 MILLIGRAM
     Route: 065
  284. ARIPIPRAZOLE [Suspect]
     Active Substance: ARIPIPRAZOLE
     Dosage: UNKNOWN
     Route: 048
  285. ARIPIPRAZOLE [Suspect]
     Active Substance: ARIPIPRAZOLE
     Dosage: 5 MILLIGRAM, (ADDITIONAL INFORMATION ON DRUG (FREE TEXT): CLOZARIL, ADDITIONAL INFO: OFF LABEL USE,
     Route: 048
  286. ARIPIPRAZOLE [Suspect]
     Active Substance: ARIPIPRAZOLE
     Dosage: 5 MILLIGRAM, (ADDITIONAL INFORMATION ON DRUG (FREE TEXT): CLOZARIL, ADDITIONAL INFO: OFF LABEL USE,
     Route: 048
  287. ARIPIPRAZOLE [Suspect]
     Active Substance: ARIPIPRAZOLE
     Dosage: 5 MILLIGRAM, (ADDITIONAL INFORMATION ON DRUG (FREE TEXT): CLOZARIL, ADDITIONAL INFO: OFF LABEL USE,
  288. ARIPIPRAZOLE [Suspect]
     Active Substance: ARIPIPRAZOLE
     Dosage: 5 MILLIGRAM, (ADDITIONAL INFORMATION ON DRUG (FREE TEXT): CLOZARIL, ADDITIONAL INFO: OFF LABEL USE,
  289. ARIPIPRAZOLE [Suspect]
     Active Substance: ARIPIPRAZOLE
     Dosage: 5 MILLIGRAM, (ADDITIONAL INFORMATION ON DRUG (FREE TEXT): CLOZARIL, ADDITIONAL INFO: OFF LABEL USE,
  290. ARIPIPRAZOLE [Suspect]
     Active Substance: ARIPIPRAZOLE
     Dosage: 5 MILLIGRAM, (ADDITIONAL INFORMATION ON DRUG (FREE TEXT): CLOZARIL, ADDITIONAL INFO: OFF LABEL USE,
  291. ARIPIPRAZOLE [Suspect]
     Active Substance: ARIPIPRAZOLE
     Dosage: 5 MILLIGRAM, (ADDITIONAL INFORMATION ON DRUG (FREE TEXT): CLOZARIL, ADDITIONAL INFO: OFF LABEL USE,
  292. ARIPIPRAZOLE [Suspect]
     Active Substance: ARIPIPRAZOLE
     Dosage: 5 MILLIGRAM, (ADDITIONAL INFORMATION ON DRUG (FREE TEXT): CLOZARIL, ADDITIONAL INFO: OFF LABEL USE,
  293. ARIPIPRAZOLE [Suspect]
     Active Substance: ARIPIPRAZOLE
     Dosage: UNK
  294. ARIPIPRAZOLE [Suspect]
     Active Substance: ARIPIPRAZOLE
     Dosage: 5 MG, UNKNOWN (TABLET (UNCOATED, ORAL)
     Route: 048
  295. ARIPIPRAZOLE [Suspect]
     Active Substance: ARIPIPRAZOLE
     Indication: Schizophrenia
     Dosage: 5 MG;
  296. ARIPIPRAZOLE [Suspect]
     Active Substance: ARIPIPRAZOLE
     Dosage: 5 MG;
  297. ARIPIPRAZOLE [Suspect]
     Active Substance: ARIPIPRAZOLE
     Dosage: 5 MG;
  298. ARIPIPRAZOLE [Suspect]
     Active Substance: ARIPIPRAZOLE
     Dosage: 5 MG;
  299. ARIPIPRAZOLE [Suspect]
     Active Substance: ARIPIPRAZOLE
     Dosage: 5 MG;
  300. ARIPIPRAZOLE [Suspect]
     Active Substance: ARIPIPRAZOLE
     Indication: Schizophrenia
     Dosage: 5 MG, UNKNOWN, TABLET (UNCOATED, ORAL)
  301. ARIPIPRAZOLE [Suspect]
     Active Substance: ARIPIPRAZOLE
     Indication: Schizophrenia
     Dosage: 5 MG, TABLET (UNCOATED, ORAL)
  302. ARIPIPRAZOLE [Suspect]
     Active Substance: ARIPIPRAZOLE
     Dosage: 5 MG, TABLET (UNCOATED, ORAL)
  303. ARIPIPRAZOLE [Suspect]
     Active Substance: ARIPIPRAZOLE
     Dosage: 5 MG, TABLET (UNCOATED, ORAL)
  304. ARIPIPRAZOLE [Suspect]
     Active Substance: ARIPIPRAZOLE
     Dosage: 5 MG
  305. ARIPIPRAZOLE [Suspect]
     Active Substance: ARIPIPRAZOLE
     Dosage: 5 MG
  306. ARIPIPRAZOLE [Suspect]
     Active Substance: ARIPIPRAZOLE
     Dosage: 5 MG
  307. ARIPIPRAZOLE [Suspect]
     Active Substance: ARIPIPRAZOLE
     Dosage: 5 MG
  308. ARIPIPRAZOLE [Suspect]
     Active Substance: ARIPIPRAZOLE
     Dosage: UNK
  309. ARIPIPRAZOLE [Suspect]
     Active Substance: ARIPIPRAZOLE
     Dosage: UNK
  310. CHLORPROMAZINE [Suspect]
     Active Substance: CHLORPROMAZINE
     Indication: Schizophrenia
     Dosage: 75 MG, UNKNOWN;
     Route: 048
  311. CHLORPROMAZINE [Suspect]
     Active Substance: CHLORPROMAZINE
     Indication: Schizophrenia
     Dosage: UNK
  312. CHLORPROMAZINE [Suspect]
     Active Substance: CHLORPROMAZINE
     Indication: Breast cancer metastatic
     Dosage: 75 MG/75 MILLIGRAM
     Route: 048
  313. CHLORPROMAZINE [Suspect]
     Active Substance: CHLORPROMAZINE
     Dosage: 75 MG/75 MILLIGRAM
     Route: 048
  314. CHLORPROMAZINE [Suspect]
     Active Substance: CHLORPROMAZINE
     Dosage: 75 MG/75 MILLIGRAM
     Route: 048
  315. CHLORPROMAZINE [Suspect]
     Active Substance: CHLORPROMAZINE
     Dosage: 75 MG/75 MILLIGRAM
     Route: 048
  316. CHLORPROMAZINE [Suspect]
     Active Substance: CHLORPROMAZINE
     Dosage: 75 MG/75 MILLIGRAM
     Route: 048
  317. CHLORPROMAZINE [Suspect]
     Active Substance: CHLORPROMAZINE
     Dosage: 75 MG/75 MILLIGRAM
     Route: 048
  318. CHLORPROMAZINE [Suspect]
     Active Substance: CHLORPROMAZINE
     Dosage: 75 MILLIGRAM, ADDITIONAL INFORMATION ON DRUG (FREE TEXT): CLOZARIL ADDITIONAL INFO: OFF LABEL USE
  319. CHLORPROMAZINE [Suspect]
     Active Substance: CHLORPROMAZINE
     Dosage: 75 MILLIGRAM, ADDITIONAL INFORMATION ON DRUG (FREE TEXT): CLOZARIL ADDITIONAL INFO: OFF LABEL USE
  320. CHLORPROMAZINE [Suspect]
     Active Substance: CHLORPROMAZINE
     Dosage: 75 MILLIGRAM, ADDITIONAL INFORMATION ON DRUG (FREE TEXT): CLOZARIL ADDITIONAL INFO: OFF LABEL USE
  321. CHLORPROMAZINE [Suspect]
     Active Substance: CHLORPROMAZINE
     Dosage: 75 MG
     Route: 048
  322. CHLORPROMAZINE [Suspect]
     Active Substance: CHLORPROMAZINE
     Dosage: 75 MG
     Route: 048
  323. CHLORPROMAZINE [Suspect]
     Active Substance: CHLORPROMAZINE
     Dosage: 75 MG
     Route: 048
  324. CHLORPROMAZINE [Suspect]
     Active Substance: CHLORPROMAZINE
     Dosage: 75 MG
     Route: 048
  325. CHLORPROMAZINE [Suspect]
     Active Substance: CHLORPROMAZINE
     Dosage: 75 MILLIGRAM, ADDITIONAL INFORMATION ON DRUG (FREE TEXT): CLOZARIL ADDITIONAL INFO: OFF LABEL USE
     Route: 048
  326. CHLORPROMAZINE [Suspect]
     Active Substance: CHLORPROMAZINE
     Dosage: 75 MILLIGRAM, ADDITIONAL INFORMATION ON DRUG (FREE TEXT): CLOZARIL ADDITIONAL INFO: OFF LABEL USE
     Route: 048
  327. CHLORPROMAZINE [Suspect]
     Active Substance: CHLORPROMAZINE
     Dosage: 75 MILLIGRAM, ADDITIONAL INFORMATION ON DRUG (FREE TEXT): CLOZARIL ADDITIONAL INFO: OFF LABEL USE
     Route: 048
  328. CHLORPROMAZINE [Suspect]
     Active Substance: CHLORPROMAZINE
     Dosage: 75 MILLIGRAM
     Route: 048
  329. CHLORPROMAZINE [Suspect]
     Active Substance: CHLORPROMAZINE
     Dosage: 75 MILLIGRAM
     Route: 048
  330. CHLORPROMAZINE [Suspect]
     Active Substance: CHLORPROMAZINE
     Dosage: 75 MILLIGRAM
     Route: 048
  331. CHLORPROMAZINE [Suspect]
     Active Substance: CHLORPROMAZINE
     Dosage: 75 MILLIGRAM
     Route: 065
  332. CHLORPROMAZINE [Suspect]
     Active Substance: CHLORPROMAZINE
     Dosage: 75 MILLIGRAM
     Route: 065
  333. CHLORPROMAZINE [Suspect]
     Active Substance: CHLORPROMAZINE
     Dosage: 75 MILLIGRAM
     Route: 065
  334. CHLORPROMAZINE [Suspect]
     Active Substance: CHLORPROMAZINE
     Dosage: 75 MILLIGRAM
     Route: 065
  335. CHLORPROMAZINE [Suspect]
     Active Substance: CHLORPROMAZINE
     Dosage: 75 MILLIGRAM
     Route: 065
  336. CHLORPROMAZINE [Suspect]
     Active Substance: CHLORPROMAZINE
     Dosage: 75 MILLIGRAM
     Route: 065
  337. CHLORPROMAZINE [Suspect]
     Active Substance: CHLORPROMAZINE
     Dosage: 75 MILLIGRAM
     Route: 065
  338. CHLORPROMAZINE [Suspect]
     Active Substance: CHLORPROMAZINE
     Dosage: 75 MILLIGRAM
     Route: 065
  339. CHLORPROMAZINE [Suspect]
     Active Substance: CHLORPROMAZINE
     Dosage: 75 MILLIGRAM
     Route: 065
  340. CHLORPROMAZINE [Suspect]
     Active Substance: CHLORPROMAZINE
     Dosage: 75 MILLIGRAM
     Route: 065
  341. CHLORPROMAZINE [Suspect]
     Active Substance: CHLORPROMAZINE
     Dosage: 75 MILLIGRAM
     Route: 065
  342. CHLORPROMAZINE [Suspect]
     Active Substance: CHLORPROMAZINE
     Dosage: 75 MILLIGRAM, ADDITIONAL INFORMATION ON DRUG (FREE TEXT): CLOZARIL ADDITIONAL INFO: OFF LABEL USE
  343. CHLORPROMAZINE [Suspect]
     Active Substance: CHLORPROMAZINE
     Dosage: 75 MILLIGRAM, ADDITIONAL INFORMATION ON DRUG (FREE TEXT): CLOZARIL ADDITIONAL INFO: OFF LABEL USE
  344. CHLORPROMAZINE [Suspect]
     Active Substance: CHLORPROMAZINE
     Dosage: 75 MILLIGRAM, ADDITIONAL INFORMATION ON DRUG (FREE TEXT): CLOZARIL ADDITIONAL INFO: OFF LABEL USE
  345. CHLORPROMAZINE [Suspect]
     Active Substance: CHLORPROMAZINE
     Dosage: 75 MILLIGRAM, ADDITIONAL INFORMATION ON DRUG (FREE TEXT): CLOZARIL ADDITIONAL INFO: OFF LABEL USE
  346. CHLORPROMAZINE [Suspect]
     Active Substance: CHLORPROMAZINE
     Dosage: 75 MILLIGRAM, ADDITIONAL INFORMATION ON DRUG (FREE TEXT): CLOZARIL ADDITIONAL INFO: OFF LABEL USE
  347. CHLORPROMAZINE [Suspect]
     Active Substance: CHLORPROMAZINE
     Dosage: 75 MILLIGRAM, ADDITIONAL INFORMATION ON DRUG (FREE TEXT): CLOZARIL ADDITIONAL INFO: OFF LABEL USE
  348. CHLORPROMAZINE [Suspect]
     Active Substance: CHLORPROMAZINE
     Dosage: 75 MILLIGRAM, ADDITIONAL INFORMATION ON DRUG (FREE TEXT): CLOZARIL ADDITIONAL INFO: OFF LABEL USE
  349. CHLORPROMAZINE [Suspect]
     Active Substance: CHLORPROMAZINE
     Indication: Schizophrenia
     Dosage: 75 MG, UNKNOWN, (ADDITIONAL INFORMATION ON DRUG (FREE TEXT): ADDITIONAL INFO: OFF LABEL USE)
     Route: 048
  350. CHLORPROMAZINE [Suspect]
     Active Substance: CHLORPROMAZINE
     Dosage: 75 MG, (ADDITIONAL INFORMATION ON DRUG (FREE TEXT): CLOZARIL,ADDITIONAL INFO: OFF LABEL USE, ADDITIO
     Route: 048
  351. CHLORPROMAZINE [Suspect]
     Active Substance: CHLORPROMAZINE
     Dosage: 75 MG, (ADDITIONAL INFORMATION ON DRUG (FREE TEXT): CLOZARIL,ADDITIONAL INFO: OFF LABEL USE, ADDITIO
     Route: 048
  352. CHLORPROMAZINE [Suspect]
     Active Substance: CHLORPROMAZINE
     Dosage: 75 MG, (ADDITIONAL INFORMATION ON DRUG (FREE TEXT): CLOZARIL,ADDITIONAL INFO: OFF LABEL USE, ADDITIO
     Route: 048
  353. CHLORPROMAZINE [Suspect]
     Active Substance: CHLORPROMAZINE
     Dosage: 75 MG, (ADDITIONAL INFORMATION ON DRUG (FREE TEXT): CLOZARIL,ADDITIONAL INFO: OFF LABEL USE, ADDITIO
     Route: 048
  354. CHLORPROMAZINE [Suspect]
     Active Substance: CHLORPROMAZINE
     Dosage: 75 MG, (ADDITIONAL INFORMATION ON DRUG (FREE TEXT): CLOZARIL,ADDITIONAL INFO: OFF LABEL USE, ADDITIO
     Route: 048
  355. CHLORPROMAZINE [Suspect]
     Active Substance: CHLORPROMAZINE
     Dosage: 75 MG, (ADDITIONAL INFORMATION ON DRUG (FREE TEXT): CLOZARIL,ADDITIONAL INFO: OFF LABEL USE, ADDITIO
     Route: 048
  356. CHLORPROMAZINE [Suspect]
     Active Substance: CHLORPROMAZINE
     Dosage: 75 MG (ADDITIONAL INFORMATION ON DRUG (FREE TEXT): CLOZARIL ADDITIONAL INFO: OFF LABEL USE, MISUSE,
     Route: 048
  357. CHLORPROMAZINE [Suspect]
     Active Substance: CHLORPROMAZINE
     Dosage: 75 MG (ADDITIONAL INFORMATION ON DRUG (FREE TEXT): CLOZARIL ADDITIONAL INFO: OFF LABEL USE, MISUSE,
     Route: 048
  358. CHLORPROMAZINE [Suspect]
     Active Substance: CHLORPROMAZINE
     Dosage: 75 MG (ADDITIONAL INFORMATION ON DRUG (FREE TEXT): CLOZARIL ADDITIONAL INFO: OFF LABEL USE, MISUSE,
     Route: 048
  359. CHLORPROMAZINE [Suspect]
     Active Substance: CHLORPROMAZINE
     Dosage: 75 MG (ADDITIONAL INFORMATION ON DRUG (FREE TEXT): CLOZARIL ADDITIONAL INFO: OFF LABEL USE, MISUSE,
     Route: 048
  360. CHLORPROMAZINE [Suspect]
     Active Substance: CHLORPROMAZINE
     Dosage: 75 MG (ADDITIONAL INFORMATION ON DRUG (FREE TEXT): CLOZARIL ADDITIONAL INFO: OFF LABEL USE, MISUSE,
     Route: 048
  361. CHLORPROMAZINE [Suspect]
     Active Substance: CHLORPROMAZINE
     Dosage: 75 MG (ADDITIONAL INFORMATION ON DRUG (FREE TEXT): CLOZARIL ADDITIONAL INFO: OFF LABEL USE, MISUSE,
     Route: 048
  362. ZUCLOPENTHIXOL HYDROCHLORIDE [Suspect]
     Active Substance: ZUCLOPENTHIXOL HYDROCHLORIDE
     Indication: Schizophrenia
     Dosage: UNK
     Route: 065
  363. ZUCLOPENTHIXOL HYDROCHLORIDE [Suspect]
     Active Substance: ZUCLOPENTHIXOL HYDROCHLORIDE
     Dosage: 400 MG, 1/WEEK, (ADDITIONAL INFORMATION ON DRUG (FREE TEXT): CLOZARIL ADDITIONAL INFO)
     Route: 030
  364. ZUCLOPENTHIXOL HYDROCHLORIDE [Suspect]
     Active Substance: ZUCLOPENTHIXOL HYDROCHLORIDE
     Dosage: 400 MILLIGRAM, EVERY WEEK
     Route: 065
  365. ZUCLOPENTHIXOL HYDROCHLORIDE [Suspect]
     Active Substance: ZUCLOPENTHIXOL HYDROCHLORIDE
     Dosage: UNK
     Route: 065
  366. ZUCLOPENTHIXOL HYDROCHLORIDE [Suspect]
     Active Substance: ZUCLOPENTHIXOL HYDROCHLORIDE
     Dosage: 400 MILLIGRAM
     Route: 065
  367. ZUCLOPENTHIXOL HYDROCHLORIDE [Suspect]
     Active Substance: ZUCLOPENTHIXOL HYDROCHLORIDE
     Dosage: 400 MG, QW2
     Route: 065
     Dates: start: 20030204, end: 20040217
  368. ZUCLOPENTHIXOL HYDROCHLORIDE [Suspect]
     Active Substance: ZUCLOPENTHIXOL HYDROCHLORIDE
     Dosage: 800 MILLIGRAM, QWK, (ADDITIONAL INFORMATION ON DRUG (FREE TEXT): CLOZARIL ADDITIONAL INFO: OFF LABEL
     Route: 030
     Dates: start: 20030204, end: 20040217
  369. ZUCLOPENTHIXOL HYDROCHLORIDE [Suspect]
     Active Substance: ZUCLOPENTHIXOL HYDROCHLORIDE
     Dosage: 400 MG, CYCLIC (400 MG, BIWEEKLY)
     Route: 065
     Dates: start: 20030204, end: 20040217
  370. ZUCLOPENTHIXOL HYDROCHLORIDE [Suspect]
     Active Substance: ZUCLOPENTHIXOL HYDROCHLORIDE
     Dosage: 400 MILLIGRAM, QW
     Route: 065
     Dates: start: 20030204, end: 20040217
  371. ZUCLOPENTHIXOL HYDROCHLORIDE [Suspect]
     Active Substance: ZUCLOPENTHIXOL HYDROCHLORIDE
     Dosage: 400 MILLIGRAM, QW
     Route: 065
     Dates: start: 20030217, end: 20040601
  372. ZUCLOPENTHIXOL HYDROCHLORIDE [Suspect]
     Active Substance: ZUCLOPENTHIXOL HYDROCHLORIDE
     Dosage: 400 MG, QW, (ADDITIONAL INFORMATION ON DRUG (FREE TEXT): CLOZARIL ADDITIONAL INFO: OFF LABEL USE; CU
     Route: 065
     Dates: start: 20040217, end: 20040601
  373. ZUCLOPENTHIXOL HYDROCHLORIDE [Suspect]
     Active Substance: ZUCLOPENTHIXOL HYDROCHLORIDE
     Dosage: 400 MG, CYCLICAL (BIWEEKLY)
     Route: 065
     Dates: start: 20040217, end: 20040601
  374. ZUCLOPENTHIXOL HYDROCHLORIDE [Suspect]
     Active Substance: ZUCLOPENTHIXOL HYDROCHLORIDE
     Dosage: 400 MG, WEEKLY (1/W)/40 MILLIGRAM
     Route: 030
     Dates: start: 20040217, end: 20040601
  375. ZUCLOPENTHIXOL HYDROCHLORIDE [Suspect]
     Active Substance: ZUCLOPENTHIXOL HYDROCHLORIDE
     Dosage: 400 MG, QW2
     Route: 065
     Dates: start: 20040601, end: 20041018
  376. ZUCLOPENTHIXOL HYDROCHLORIDE [Suspect]
     Active Substance: ZUCLOPENTHIXOL HYDROCHLORIDE
     Dosage: 400 MILLIGRAM, BIW
     Route: 065
     Dates: start: 20040601, end: 20041018
  377. ZUCLOPENTHIXOL HYDROCHLORIDE [Suspect]
     Active Substance: ZUCLOPENTHIXOL HYDROCHLORIDE
     Dosage: 400 MILLIGRAM, QWK
     Route: 065
     Dates: start: 20040601
  378. ZUCLOPENTHIXOL HYDROCHLORIDE [Suspect]
     Active Substance: ZUCLOPENTHIXOL HYDROCHLORIDE
     Dosage: 400 MILLIGRAM, QWK/ (ADDITIONAL INFORMATION ON DRUG (FREE TEXT): CLOZARIL ADDITIONAL INFO: OFF LABEL
     Route: 030
     Dates: start: 20040601, end: 20041018
  379. ZUCLOPENTHIXOL HYDROCHLORIDE [Suspect]
     Active Substance: ZUCLOPENTHIXOL HYDROCHLORIDE
     Dosage: 300 MG, QW
     Route: 030
     Dates: start: 20040601, end: 20041018
  380. ZUCLOPENTHIXOL HYDROCHLORIDE [Suspect]
     Active Substance: ZUCLOPENTHIXOL HYDROCHLORIDE
     Dosage: 400 MG, QW2
     Route: 065
     Dates: start: 20091018
  381. ZUCLOPENTHIXOL HYDROCHLORIDE [Suspect]
     Active Substance: ZUCLOPENTHIXOL HYDROCHLORIDE
     Dosage: 400 MG, QW2
     Route: 065
     Dates: start: 20041018, end: 20041018
  382. ZUCLOPENTHIXOL HYDROCHLORIDE [Suspect]
     Active Substance: ZUCLOPENTHIXOL HYDROCHLORIDE
     Dosage: 400 MG, OTHER (BIWEEKLY), CYCLICAL (ADDITIONAL INFORMATION ON DRUG (FREE TEXT): CLOZARIL ADDITIONAL
     Route: 030
     Dates: start: 20041018, end: 20041018
  383. ZUCLOPENTHIXOL HYDROCHLORIDE [Suspect]
     Active Substance: ZUCLOPENTHIXOL HYDROCHLORIDE
     Dosage: 400 MG, QW
     Route: 065
     Dates: start: 20041018, end: 20041018
  384. ZUCLOPENTHIXOL HYDROCHLORIDE [Suspect]
     Active Substance: ZUCLOPENTHIXOL HYDROCHLORIDE
     Dosage: 400 MG BIW
     Route: 030
     Dates: start: 20041018, end: 20041018
  385. ZUCLOPENTHIXOL HYDROCHLORIDE [Suspect]
     Active Substance: ZUCLOPENTHIXOL HYDROCHLORIDE
     Dosage: 400 MILLIGRAM, (ADDITIONAL INFORMATION ON DRUG (FREE TEXT): CLOZARIL ADDITIONAL INFO)
     Route: 030
     Dates: start: 20041018
  386. ZUCLOPENTHIXOL HYDROCHLORIDE [Suspect]
     Active Substance: ZUCLOPENTHIXOL HYDROCHLORIDE
     Dosage: 400 MILLIGRAM, BIWEEKLY/04-FEB-2003; 17-FEB-2004 00:00
     Route: 065
  387. ZUCLOPENTHIXOL HYDROCHLORIDE [Suspect]
     Active Substance: ZUCLOPENTHIXOL HYDROCHLORIDE
     Dosage: 800 MILLIGRAM, QW (400 MG, 2/W)/04-FEB-2003; 17-FEB-2004 00:00
     Route: 065
  388. ZUCLOPENTHIXOL HYDROCHLORIDE [Suspect]
     Active Substance: ZUCLOPENTHIXOL HYDROCHLORIDE
     Dosage: 400 MG, CYCLIC (400 MG, BIWEEKLY)/04-FEB-2003; 17-FEB-2004 00:00/400 MG, CYCLIC (400 MG, BIWEEKLY);
     Route: 030
     Dates: start: 20030204, end: 20040217
  389. ZUCLOPENTHIXOL HYDROCHLORIDE [Suspect]
     Active Substance: ZUCLOPENTHIXOL HYDROCHLORIDE
     Dosage: 400 MG, QW2, (CYCLIC, 04 FEB 2004); 17-FEB-2004 00:00
     Route: 065
  390. ZUCLOPENTHIXOL HYDROCHLORIDE [Suspect]
     Active Substance: ZUCLOPENTHIXOL HYDROCHLORIDE
     Dosage: 300 MG, WEEKLY/18-OCT-2009; 17-FEB-2004 00:00, (ADDITIONAL INFORMATION ON DRUG (FREE TEXT): CLOZARIL
     Route: 030
     Dates: start: 20091018
  391. ZUCLOPENTHIXOL HYDROCHLORIDE [Suspect]
     Active Substance: ZUCLOPENTHIXOL HYDROCHLORIDE
     Dosage: 800 MG, QW, (04 FEB 2003); 17-FEB-2004 00:00
     Route: 065
  392. ZUCLOPENTHIXOL HYDROCHLORIDE [Suspect]
     Active Substance: ZUCLOPENTHIXOL HYDROCHLORIDE
     Dosage: 400 MILLIGRAM, WEEKLY/17-FEB-2004; 01-JUN-2004 00:00
  393. ZUCLOPENTHIXOL HYDROCHLORIDE [Suspect]
     Active Substance: ZUCLOPENTHIXOL HYDROCHLORIDE
     Dosage: 400 MG, CYCLIC (400 MG, BIWEEKLY)/01-JUN-2004; 18-OCT-2004 00:00
     Route: 030
     Dates: start: 20040601, end: 20041018
  394. ZUCLOPENTHIXOL HYDROCHLORIDE [Suspect]
     Active Substance: ZUCLOPENTHIXOL HYDROCHLORIDE
     Dosage: 400 MILLIGRAM, BIWEEKLY/18-OCT-2009; 18-OCT-2004 00:00
     Route: 065
  395. ZUCLOPENTHIXOL HYDROCHLORIDE [Suspect]
     Active Substance: ZUCLOPENTHIXOL HYDROCHLORIDE
     Dosage: 800 MILLIGRAM, QW (400 MG, 2/W)/01-JUN-2004; 18-OCT-2004 00:00
     Route: 065
  396. ZUCLOPENTHIXOL HYDROCHLORIDE [Suspect]
     Active Substance: ZUCLOPENTHIXOL HYDROCHLORIDE
     Dosage: 400 MG, QW2, (CYCLIC, 01 JUN 2004); 18-OCT-2004 00:00
     Route: 065
  397. ZUCLOPENTHIXOL HYDROCHLORIDE [Suspect]
     Active Substance: ZUCLOPENTHIXOL HYDROCHLORIDE
     Dosage: 400 MILLIGRAM, BIWEEKLY/18-OCT-2009
     Route: 065
  398. ZUCLOPENTHIXOL HYDROCHLORIDE [Suspect]
     Active Substance: ZUCLOPENTHIXOL HYDROCHLORIDE
     Dosage: 300 MG, QW/300 MG, WEEKLY (1/W)
     Route: 030
     Dates: start: 20091009
  399. ZUCLOPENTHIXOL HYDROCHLORIDE [Suspect]
     Active Substance: ZUCLOPENTHIXOL HYDROCHLORIDE
     Dosage: 300 MILLIGRAM, QD, (ADDITIONAL INFORMATION ON DRUG (FREE TEXT): CLOZARIL ADDITIONAL INFO: OFF LABEL
     Route: 030
     Dates: start: 20091009
  400. ZUCLOPENTHIXOL HYDROCHLORIDE [Suspect]
     Active Substance: ZUCLOPENTHIXOL HYDROCHLORIDE
     Dosage: 300 MG, DAILY
     Route: 030
     Dates: start: 20091009
  401. ZUCLOPENTHIXOL HYDROCHLORIDE [Suspect]
     Active Substance: ZUCLOPENTHIXOL HYDROCHLORIDE
     Dosage: 300 MG, WEEKLY (1/W), 300 MILLIGRAM, QWK, (ADDITIONAL INFORMATION ON DRUG (FREE TEXT): CLOZARIL ADDI
     Route: 030
     Dates: start: 20091018
  402. ZUCLOPENTHIXOL HYDROCHLORIDE [Suspect]
     Active Substance: ZUCLOPENTHIXOL HYDROCHLORIDE
     Dosage: 400 MILLIGRAM, BIW, (ADDITIONAL INFORMATION ON DRUG (FREE TEXT): CLOZARIL ADDITIONAL INFO: OFF LABEL
     Route: 030
     Dates: start: 20091018
  403. ZUCLOPENTHIXOL HYDROCHLORIDE [Suspect]
     Active Substance: ZUCLOPENTHIXOL HYDROCHLORIDE
     Dosage: 300 MG, QW
     Route: 030
     Dates: start: 20091018
  404. ZUCLOPENTHIXOL HYDROCHLORIDE [Suspect]
     Active Substance: ZUCLOPENTHIXOL HYDROCHLORIDE
     Dosage: 400 MILLIGRAM, QW
     Route: 065
     Dates: start: 20091018
  405. ZUCLOPENTHIXOL HYDROCHLORIDE [Suspect]
     Active Substance: ZUCLOPENTHIXOL HYDROCHLORIDE
     Dosage: 300 MG, QW (300 MILLIGRAM I.M WEEKLY), (ADDITIONAL INFORMATION ON DRUG (FREE TEXT): CLOZARIL ADDITIO
     Route: 030
     Dates: start: 20091009
  406. ZUCLOPENTHIXOL HYDROCHLORIDE [Suspect]
     Active Substance: ZUCLOPENTHIXOL HYDROCHLORIDE
     Dosage: 400 MILLIGRAM, CYCLICAL, (ADDITIONAL INFORMATION ON DRUG (FREE TEXT): CLOZARIL ADDITIONAL INFO)
     Route: 030
  407. ZUCLOPENTHIXOL HYDROCHLORIDE [Suspect]
     Active Substance: ZUCLOPENTHIXOL HYDROCHLORIDE
     Dosage: 800 MILLIGRAM, QWK, (ADDITIONAL INFORMATION ON DRUG (FREE TEXT): CLOZARIL ADDITIONAL INFO: OFF LABEL
     Route: 030
     Dates: start: 20040601, end: 20041018
  408. ZUCLOPENTHIXOL HYDROCHLORIDE [Suspect]
     Active Substance: ZUCLOPENTHIXOL HYDROCHLORIDE
     Dosage: 400 MILLIGRAM, (ADDITIONAL INFORMATION ON DRUG (FREE TEXT): CLOZARIL ADDITIONAL INFO)
     Route: 030
     Dates: start: 20040901
  409. ZUCLOPENTHIXOL HYDROCHLORIDE [Suspect]
     Active Substance: ZUCLOPENTHIXOL HYDROCHLORIDE
     Dosage: 400 MILLIGRAM, QWK, (ADDITIONAL INFORMATION ON DRUG (FREE TEXT): CLOZARIL ADDITIONAL INFO: OFF LABEL
     Route: 030
     Dates: start: 20040217, end: 20040601
  410. ZUCLOPENTHIXOL HYDROCHLORIDE [Suspect]
     Active Substance: ZUCLOPENTHIXOL HYDROCHLORIDE
     Dosage: 400 MILLIGRAM OTHER (BIWEEKLY)
     Route: 030
     Dates: start: 20041018, end: 20041018
  411. ZUCLOPENTHIXOL HYDROCHLORIDE [Suspect]
     Active Substance: ZUCLOPENTHIXOL HYDROCHLORIDE
     Dosage: 300 MILLIGRAM, QWK, (ADDITIONAL INFORMATION ON DRUG (FREE TEXT): CLOZARIL ADDITIONAL INFO: OFF LABEL
     Route: 030
     Dates: start: 20091018
  412. ZUCLOPENTHIXOL HYDROCHLORIDE [Suspect]
     Active Substance: ZUCLOPENTHIXOL HYDROCHLORIDE
     Indication: Product used for unknown indication
     Dosage: 300 MILLIGRAM, QD (300 MILLIGRAM I.M WEEKLY)/09-OCT-2009
     Route: 030
  413. ZUCLOPENTHIXOL HYDROCHLORIDE [Suspect]
     Active Substance: ZUCLOPENTHIXOL HYDROCHLORIDE
     Dosage: 400 MILLIGRAM, BIWEEKLY/18-OCT-2009
     Route: 030
  414. ZUCLOPENTHIXOL HYDROCHLORIDE [Suspect]
     Active Substance: ZUCLOPENTHIXOL HYDROCHLORIDE
     Dosage: UNK
     Route: 065
  415. ZUCLOPENTHIXOL HYDROCHLORIDE [Suspect]
     Active Substance: ZUCLOPENTHIXOL HYDROCHLORIDE
     Dosage: UNK
     Route: 065
  416. ZUCLOPENTHIXOL HYDROCHLORIDE [Suspect]
     Active Substance: ZUCLOPENTHIXOL HYDROCHLORIDE
     Dosage: 300 MILLIGRAM, QWK
     Route: 030
  417. ZUCLOPENTHIXOL HYDROCHLORIDE [Suspect]
     Active Substance: ZUCLOPENTHIXOL HYDROCHLORIDE
     Dosage: 400 MILLIGRAM, EVERY WEEK
     Route: 030
  418. ZUCLOPENTHIXOL HYDROCHLORIDE [Suspect]
     Active Substance: ZUCLOPENTHIXOL HYDROCHLORIDE
     Dosage: 400 MG, CYCLIC (400 MG, BIWEEKLY)
     Dates: start: 20030204, end: 20040217
  419. ZUCLOPENTHIXOL HYDROCHLORIDE [Suspect]
     Active Substance: ZUCLOPENTHIXOL HYDROCHLORIDE
     Dosage: 400 MG, CYCLIC (400 MG, BIWEEKLY)
     Dates: start: 20030204, end: 20040217
  420. ZUCLOPENTHIXOL HYDROCHLORIDE [Suspect]
     Active Substance: ZUCLOPENTHIXOL HYDROCHLORIDE
     Dosage: 400 MG, CYCLIC (400 MG, BIWEEKLY); CYCLICAL
     Dates: start: 20030204, end: 20040217
  421. ZUCLOPENTHIXOL HYDROCHLORIDE [Suspect]
     Active Substance: ZUCLOPENTHIXOL HYDROCHLORIDE
     Dosage: 400 MILLIGRAM, QWK
     Route: 030
     Dates: start: 20030204, end: 20040217
  422. ZUCLOPENTHIXOL HYDROCHLORIDE [Suspect]
     Active Substance: ZUCLOPENTHIXOL HYDROCHLORIDE
     Dosage: 800 MILLIGRAM, QWK
     Route: 030
     Dates: start: 20030204, end: 20040217
  423. ZUCLOPENTHIXOL HYDROCHLORIDE [Suspect]
     Active Substance: ZUCLOPENTHIXOL HYDROCHLORIDE
     Dosage: 400 MG, CYCLIC (400 MG, BIWEEKLY)
     Route: 030
     Dates: start: 20030204, end: 20040217
  424. ZUCLOPENTHIXOL HYDROCHLORIDE [Suspect]
     Active Substance: ZUCLOPENTHIXOL HYDROCHLORIDE
     Dosage: 400 MG, CYCLIC (400 MG, BIWEEKLY)
     Route: 030
     Dates: start: 20030204, end: 20040217
  425. ZUCLOPENTHIXOL HYDROCHLORIDE [Suspect]
     Active Substance: ZUCLOPENTHIXOL HYDROCHLORIDE
     Dosage: 800 MG
     Route: 030
     Dates: start: 20030204, end: 20040217
  426. ZUCLOPENTHIXOL HYDROCHLORIDE [Suspect]
     Active Substance: ZUCLOPENTHIXOL HYDROCHLORIDE
     Dosage: 400 MG, CYCLIC (400 MG, BIWEEKLY)/04-FEB-2003
     Route: 030
     Dates: start: 20040217
  427. ZUCLOPENTHIXOL HYDROCHLORIDE [Suspect]
     Active Substance: ZUCLOPENTHIXOL HYDROCHLORIDE
     Dosage: 800 MILLIGRAM, QW (400 MG, 2/W)/04-FEB-2003
     Dates: start: 20040217
  428. ZUCLOPENTHIXOL HYDROCHLORIDE [Suspect]
     Active Substance: ZUCLOPENTHIXOL HYDROCHLORIDE
     Dosage: 400 MILLIGRAM, EVERY WEEK
     Route: 030
     Dates: start: 20040217, end: 20040601
  429. ZUCLOPENTHIXOL HYDROCHLORIDE [Suspect]
     Active Substance: ZUCLOPENTHIXOL HYDROCHLORIDE
     Dosage: 400 MILLIGRAM, BIWEEKLY (CYCLE)/04-FEB-2003
     Dates: start: 20040217
  430. ZUCLOPENTHIXOL HYDROCHLORIDE [Suspect]
     Active Substance: ZUCLOPENTHIXOL HYDROCHLORIDE
     Dosage: 400 MG, WEEKLY 1/WEEK
     Route: 030
     Dates: start: 20040217, end: 20040601
  431. ZUCLOPENTHIXOL HYDROCHLORIDE [Suspect]
     Active Substance: ZUCLOPENTHIXOL HYDROCHLORIDE
     Dosage: 800 MG, QW, (04 FEB 2003)
     Route: 030
     Dates: start: 20040217
  432. ZUCLOPENTHIXOL HYDROCHLORIDE [Suspect]
     Active Substance: ZUCLOPENTHIXOL HYDROCHLORIDE
     Dosage: 400 MG, WEEKLY (1/W)
     Route: 030
     Dates: start: 20040217, end: 20040601
  433. ZUCLOPENTHIXOL HYDROCHLORIDE [Suspect]
     Active Substance: ZUCLOPENTHIXOL HYDROCHLORIDE
     Dosage: 800 MILLIGRAM, QWK
     Route: 030
     Dates: start: 20040217
  434. ZUCLOPENTHIXOL HYDROCHLORIDE [Suspect]
     Active Substance: ZUCLOPENTHIXOL HYDROCHLORIDE
     Dosage: 400 MG, WEEKLY (1/W)
     Route: 030
     Dates: start: 20040217, end: 20040601
  435. ZUCLOPENTHIXOL HYDROCHLORIDE [Suspect]
     Active Substance: ZUCLOPENTHIXOL HYDROCHLORIDE
     Dosage: 400 MILLIGRAM, WEEKLY/17-FEB-2004
     Dates: start: 20040601
  436. ZUCLOPENTHIXOL HYDROCHLORIDE [Suspect]
     Active Substance: ZUCLOPENTHIXOL HYDROCHLORIDE
     Dosage: 400 MG, CYCLIC (400 MG, BIWEEKLY)
     Route: 030
     Dates: start: 20040601, end: 20041018
  437. ZUCLOPENTHIXOL HYDROCHLORIDE [Suspect]
     Active Substance: ZUCLOPENTHIXOL HYDROCHLORIDE
     Dosage: 800 MILLIGRAM, QWK
     Route: 030
     Dates: start: 20040601, end: 20041018
  438. ZUCLOPENTHIXOL HYDROCHLORIDE [Suspect]
     Active Substance: ZUCLOPENTHIXOL HYDROCHLORIDE
     Dosage: 400 MG, CYCLIC (400 MG, BIWEEKLY)
     Dates: start: 20040601, end: 20041018
  439. ZUCLOPENTHIXOL HYDROCHLORIDE [Suspect]
     Active Substance: ZUCLOPENTHIXOL HYDROCHLORIDE
     Dosage: 400 MILLIGRAM
     Route: 030
     Dates: start: 20040601, end: 20041018
  440. ZUCLOPENTHIXOL HYDROCHLORIDE [Suspect]
     Active Substance: ZUCLOPENTHIXOL HYDROCHLORIDE
     Dosage: 400 MILLIGRAM, BIWEEKLY (CYCLE)/01-JUN-2004
     Route: 030
     Dates: start: 20041018, end: 20041018
  441. ZUCLOPENTHIXOL HYDROCHLORIDE [Suspect]
     Active Substance: ZUCLOPENTHIXOL HYDROCHLORIDE
     Dosage: 400 MILLIGRAM, BIWEEKLY, CYCLE/18-OCT-2004
     Dates: start: 20041018
  442. ZUCLOPENTHIXOL HYDROCHLORIDE [Suspect]
     Active Substance: ZUCLOPENTHIXOL HYDROCHLORIDE
     Dosage: 400 MG, CYCLIC (400 MG, BIWEEKLY)/01-JUN-2004
     Dates: start: 20041018
  443. ZUCLOPENTHIXOL HYDROCHLORIDE [Suspect]
     Active Substance: ZUCLOPENTHIXOL HYDROCHLORIDE
     Dosage: 800 MILLIGRAM, QW (400 MG, 2/W)/01-JUN-2004
     Dates: start: 20041018
  444. ZUCLOPENTHIXOL HYDROCHLORIDE [Suspect]
     Active Substance: ZUCLOPENTHIXOL HYDROCHLORIDE
     Dosage: 400 MG, OTHER (BIWEEKLY)
     Dates: start: 20041018, end: 20041018
  445. ZUCLOPENTHIXOL HYDROCHLORIDE [Suspect]
     Active Substance: ZUCLOPENTHIXOL HYDROCHLORIDE
     Dosage: 400 MILLIGRAM
     Route: 030
     Dates: start: 20041018, end: 20041018
  446. ZUCLOPENTHIXOL HYDROCHLORIDE [Suspect]
     Active Substance: ZUCLOPENTHIXOL HYDROCHLORIDE
     Dosage: 800 MG, 1/WEEK
     Route: 030
     Dates: start: 20041018, end: 20041018
  447. ZUCLOPENTHIXOL HYDROCHLORIDE [Suspect]
     Active Substance: ZUCLOPENTHIXOL HYDROCHLORIDE
     Dosage: 400 MG, OTHER (BIWEEKLY)
     Route: 030
     Dates: start: 20041018, end: 20041018
  448. ZUCLOPENTHIXOL HYDROCHLORIDE [Suspect]
     Active Substance: ZUCLOPENTHIXOL HYDROCHLORIDE
     Dosage: 400 MG, OTHER (BIWEEKLY) [CUMULATIVE DOSE TO FIRST REACTION: 4150433.2 MG]
     Route: 030
     Dates: start: 20041018, end: 20041018
  449. ZUCLOPENTHIXOL HYDROCHLORIDE [Suspect]
     Active Substance: ZUCLOPENTHIXOL HYDROCHLORIDE
     Dosage: 300 MILLIGRAM, QWK
     Route: 030
     Dates: start: 20091018
  450. ZUCLOPENTHIXOL HYDROCHLORIDE [Suspect]
     Active Substance: ZUCLOPENTHIXOL HYDROCHLORIDE
     Dosage: 400 MG CYCLE
     Route: 030
     Dates: start: 20091018
  451. ZUCLOPENTHIXOL HYDROCHLORIDE [Suspect]
     Active Substance: ZUCLOPENTHIXOL HYDROCHLORIDE
     Dosage: 300 MG, QD WEEKLY (1/W) (CUMULATIVE DOSE TO FIRST REACTION: 1011312.5 MG)
     Route: 030
     Dates: start: 20091009
  452. ZUCLOPENTHIXOL HYDROCHLORIDE [Suspect]
     Active Substance: ZUCLOPENTHIXOL HYDROCHLORIDE
     Dosage: 300 MG, WEEKLY (1/W)
     Route: 030
     Dates: start: 20091018
  453. ZUCLOPENTHIXOL HYDROCHLORIDE [Suspect]
     Active Substance: ZUCLOPENTHIXOL HYDROCHLORIDE
     Dosage: 300 MG, WEEKLY (1/W)
     Route: 030
     Dates: start: 20091018
  454. ZUCLOPENTHIXOL HYDROCHLORIDE [Suspect]
     Active Substance: ZUCLOPENTHIXOL HYDROCHLORIDE
     Dosage: 300 MG, WEEKLY (1/W), QW (300 MILLIGRAM I.M WEEKLY)
     Route: 030
     Dates: start: 20091009
  455. ZUCLOPENTHIXOL HYDROCHLORIDE [Suspect]
     Active Substance: ZUCLOPENTHIXOL HYDROCHLORIDE
     Dosage: 300 MG, QD
     Dates: start: 20091009
  456. ZUCLOPENTHIXOL HYDROCHLORIDE [Suspect]
     Active Substance: ZUCLOPENTHIXOL HYDROCHLORIDE
     Dosage: 300 MG, WEEKLY/18-OCT-2009
     Route: 030
     Dates: start: 20091009
  457. ZUCLOPENTHIXOL HYDROCHLORIDE [Suspect]
     Active Substance: ZUCLOPENTHIXOL HYDROCHLORIDE
     Dosage: 400 MILLIGRAM
     Route: 030
     Dates: start: 20091018
  458. ZUCLOPENTHIXOL HYDROCHLORIDE [Suspect]
     Active Substance: ZUCLOPENTHIXOL HYDROCHLORIDE
     Dosage: 800 MILLIGRAM, QWK
     Route: 030
  459. ZUCLOPENTHIXOL HYDROCHLORIDE [Suspect]
     Active Substance: ZUCLOPENTHIXOL HYDROCHLORIDE
     Dosage: UNK
     Route: 030
  460. ZUCLOPENTHIXOL HYDROCHLORIDE [Suspect]
     Active Substance: ZUCLOPENTHIXOL HYDROCHLORIDE
     Dosage: 400 MILLIGRAM
     Route: 030
     Dates: start: 20040217, end: 20040601
  461. ZUCLOPENTHIXOL HYDROCHLORIDE [Suspect]
     Active Substance: ZUCLOPENTHIXOL HYDROCHLORIDE
     Dosage: 400 MILLIGRAM
     Route: 030
  462. ZUCLOPENTHIXOL HYDROCHLORIDE [Suspect]
     Active Substance: ZUCLOPENTHIXOL HYDROCHLORIDE
     Indication: Schizophrenia
     Dosage: 400 MG, 1/WEEK (DOSE TEXT: 400 MG, QW; CUMULATIVE DOSE TO FIRST REACTION: 265885.72 MG )
     Route: 065
     Dates: start: 20030204, end: 20040217
  463. ZUCLOPENTHIXOL HYDROCHLORIDE [Suspect]
     Active Substance: ZUCLOPENTHIXOL HYDROCHLORIDE
     Dosage: 300 MG, 1/WEEK (300 MG, QW CUMULATIVE DOSE TO FIRST REACTION: 94501.79 MG )
     Route: 030
     Dates: start: 20091018
  464. ZUCLOPENTHIXOL HYDROCHLORIDE [Suspect]
     Active Substance: ZUCLOPENTHIXOL HYDROCHLORIDE
     Dosage: UNK
     Route: 065
  465. ZUCLOPENTHIXOL HYDROCHLORIDE [Suspect]
     Active Substance: ZUCLOPENTHIXOL HYDROCHLORIDE
     Dosage: 400 MG, 1/WEEK (DOSE TEXT: 400 MG, QW)
     Route: 065
     Dates: end: 20040601
  466. ZUCLOPENTHIXOL HYDROCHLORIDE [Suspect]
     Active Substance: ZUCLOPENTHIXOL HYDROCHLORIDE
     Dosage: 400 MG, 1/WEEK (DOSE TEXT: 400 MG, QW; CUMULATIVE DOSE TO FIRST REACTION: 126002.38 MG)
     Route: 065
     Dates: start: 20091018
  467. ZUCLOPENTHIXOL HYDROCHLORIDE [Suspect]
     Active Substance: ZUCLOPENTHIXOL HYDROCHLORIDE
     Dosage: 400 MG (DOSE TEXT: 400 MG, BIW; CUMULATIVE DOSE TO FIRST REACTION: 63001.19 MG)
     Route: 030
     Dates: start: 20091018
  468. ZUCLOPENTHIXOL HYDROCHLORIDE [Suspect]
     Active Substance: ZUCLOPENTHIXOL HYDROCHLORIDE
     Dosage: 300 MG, QD  (CUMULATIVE DOSE TO FIRST REACTION: 664212.5 M)
     Route: 030
     Dates: start: 20091009
  469. ZUCLOPENTHIXOL HYDROCHLORIDE [Suspect]
     Active Substance: ZUCLOPENTHIXOL HYDROCHLORIDE
     Dosage: 400 MG 2/WEEK (DOSE TEXT: 400 MG, BIW)
     Route: 065
     Dates: end: 20041018
  470. ZUCLOPENTHIXOL HYDROCHLORIDE [Suspect]
     Active Substance: ZUCLOPENTHIXOL HYDROCHLORIDE
     Dosage: 400 MG, 1/WEEK (DOSE TEXT: 400 MG, QW; CUMULATIVE DOSE TO FIRST REACTION: 244285.72 MG )
     Route: 065
     Dates: start: 20040217, end: 20040601
  471. ZUCLOPENTHIXOL HYDROCHLORIDE [Suspect]
     Active Substance: ZUCLOPENTHIXOL HYDROCHLORIDE
     Dosage: 300 MG, 1/WEEK (DOSE TEXT: 300 MG, QW CUMULATIVE DOSE TO FIRST REACTION: 94887.5 MG)
     Route: 030
     Dates: start: 20091009
  472. ZUCLOPENTHIXOL HYDROCHLORIDE [Suspect]
     Active Substance: ZUCLOPENTHIXOL HYDROCHLORIDE
     Dosage: 400 MG
     Route: 065
  473. ZUCLOPENTHIXOL HYDROCHLORIDE [Suspect]
     Active Substance: ZUCLOPENTHIXOL HYDROCHLORIDE
     Dosage: 400 MG, 1/WEEK (DOSE TEXT: 400 MG, QW; CUMULATIVE DOSE TO FIRST REACTION: 230345.23 MG )
     Route: 065
     Dates: start: 20041018, end: 20041018
  474. ZUCLOPENTHIXOL HYDROCHLORIDE [Suspect]
     Active Substance: ZUCLOPENTHIXOL HYDROCHLORIDE
     Dosage: UNK
     Route: 065
  475. ZUCLOPENTHIXOL HYDROCHLORIDE [Suspect]
     Active Substance: ZUCLOPENTHIXOL HYDROCHLORIDE
     Dosage: 400 MG, 2/WEEK
     Dates: start: 20040601, end: 20041018
  476. ZUCLOPENTHIXOL HYDROCHLORIDE [Suspect]
     Active Substance: ZUCLOPENTHIXOL HYDROCHLORIDE
     Dosage: 300 MG, WEEKLY (1/W) / 300 MILLIGRAM, QWK
     Route: 030
     Dates: start: 20091018
  477. ZUCLOPENTHIXOL HYDROCHLORIDE [Suspect]
     Active Substance: ZUCLOPENTHIXOL HYDROCHLORIDE
     Dosage: 400 MG, WEEKLY (1/W), (CUMULATIVE DOSE TO FIRST REACTION: 310400.0 MG, ADDITIONAL INFORMATION ON DRU
     Route: 065
     Dates: start: 20040217, end: 20040601
  478. ZUCLOPENTHIXOL HYDROCHLORIDE [Suspect]
     Active Substance: ZUCLOPENTHIXOL HYDROCHLORIDE
     Dosage: 400 MG, CYCLIC (400 MG, BIWEEKLY) (ADDITIONAL INFORMATION ON DRUG (FREE TEXT): ADDITIONAL INFO: OFF
     Route: 030
     Dates: start: 20030204, end: 20040217
  479. ZUCLOPENTHIXOL HYDROCHLORIDE [Suspect]
     Active Substance: ZUCLOPENTHIXOL HYDROCHLORIDE
     Dosage: 300 MG, QD, 300 MG, WEEKLY (1/W), (CUMULATIVE DOSE TO FIRST REACTION: 1011312.5 MG, ADDITIONAL INFOR
     Route: 030
     Dates: start: 20091009
  480. ZUCLOPENTHIXOL HYDROCHLORIDE [Suspect]
     Active Substance: ZUCLOPENTHIXOL HYDROCHLORIDE
     Indication: Schizophrenia
     Dosage: 400 MILLIGRAM, QWK
     Route: 030
  481. ZUCLOPENTHIXOL HYDROCHLORIDE [Suspect]
     Active Substance: ZUCLOPENTHIXOL HYDROCHLORIDE
     Dosage: 400 MILLIGRAM, EVERY WEEK, (ADDITIONAL INFORMATION ON DRUG (FREE TEXT): CLOZARIL ADDITIONAL INFO)
     Route: 030
  482. ZUCLOPENTHIXOL HYDROCHLORIDE [Suspect]
     Active Substance: ZUCLOPENTHIXOL HYDROCHLORIDE
     Dosage: 04-FEB-2003 400 MG, CYCLIC (400 MG, BIWEEKLY)
     Dates: start: 20030204, end: 20040217
  483. ZUCLOPENTHIXOL HYDROCHLORIDE [Suspect]
     Active Substance: ZUCLOPENTHIXOL HYDROCHLORIDE
     Dosage: 04-FEB-2003 800 MILLIGRAM, QWK, 664000.0 MG
     Route: 030
     Dates: start: 20030204, end: 20040217
  484. ZUCLOPENTHIXOL HYDROCHLORIDE [Suspect]
     Active Substance: ZUCLOPENTHIXOL HYDROCHLORIDE
     Dosage: 04-FEB-2003 400 MILLIGRAM, QWK, 332000.0 MG
     Route: 030
     Dates: start: 20030204, end: 20040217
  485. ZUCLOPENTHIXOL HYDROCHLORIDE [Suspect]
     Active Substance: ZUCLOPENTHIXOL HYDROCHLORIDE
     Dosage: 17-FEB-2004 400 MILLIGRAM, QWK, 310400.0 MG
     Route: 030
     Dates: start: 20040217, end: 20040601
  486. ZUCLOPENTHIXOL HYDROCHLORIDE [Suspect]
     Active Substance: ZUCLOPENTHIXOL HYDROCHLORIDE
     Dosage: 01-JUN-2004 800 MILLIGRAM, QWK,608804.75 MG
     Route: 030
     Dates: start: 20040601, end: 20041018
  487. ZUCLOPENTHIXOL HYDROCHLORIDE [Suspect]
     Active Substance: ZUCLOPENTHIXOL HYDROCHLORIDE
     Dosage: 01-SEP-2004 400 MILLIGRAM
     Route: 030
     Dates: start: 20040901
  488. ZUCLOPENTHIXOL HYDROCHLORIDE [Suspect]
     Active Substance: ZUCLOPENTHIXOL HYDROCHLORIDE
     Dosage: 18-OCT-2004 400 MILLIGRAM
     Route: 030
     Dates: start: 20041018
  489. ZUCLOPENTHIXOL HYDROCHLORIDE [Suspect]
     Active Substance: ZUCLOPENTHIXOL HYDROCHLORIDE
     Dosage: 18-OCT-2004 800 MILLIGRAM, QWK
     Route: 030
     Dates: start: 20041018, end: 20041018
  490. ZUCLOPENTHIXOL HYDROCHLORIDE [Suspect]
     Active Substance: ZUCLOPENTHIXOL HYDROCHLORIDE
     Dosage: 18-OCT-2004 400 MILLIGRAM
     Route: 030
     Dates: start: 20041018, end: 20041018
  491. ZUCLOPENTHIXOL HYDROCHLORIDE [Suspect]
     Active Substance: ZUCLOPENTHIXOL HYDROCHLORIDE
     Dosage: 18-OCT-2004 400 MILLIGRAM
     Route: 030
     Dates: start: 20041018
  492. ZUCLOPENTHIXOL HYDROCHLORIDE [Suspect]
     Active Substance: ZUCLOPENTHIXOL HYDROCHLORIDE
     Dosage: 18-OCT-2004  800 MILLIGRAM, (400 MG, OTHER (BIWEEKLY))
     Route: 030
     Dates: start: 20041018, end: 20041018
  493. ZUCLOPENTHIXOL HYDROCHLORIDE [Suspect]
     Active Substance: ZUCLOPENTHIXOL HYDROCHLORIDE
     Dosage: 09-OCT-2009 300 MILLIGRAM, QWK, 144473.22 MG
     Route: 030
     Dates: start: 20091009
  494. ZUCLOPENTHIXOL HYDROCHLORIDE [Suspect]
     Active Substance: ZUCLOPENTHIXOL HYDROCHLORIDE
     Dosage: 09-OCT-2009 300 MILLIGRAM, QD, 1011312.5 MG
     Route: 030
     Dates: start: 20091009
  495. ZUCLOPENTHIXOL HYDROCHLORIDE [Suspect]
     Active Substance: ZUCLOPENTHIXOL HYDROCHLORIDE
     Dosage: 18-OCT-2009 400 MG, Q2WK (CUMULATIVE DOSE TO FIRST REACTION: 63001.19 MG)
     Route: 030
     Dates: start: 20091018
  496. ZUCLOPENTHIXOL HYDROCHLORIDE [Suspect]
     Active Substance: ZUCLOPENTHIXOL HYDROCHLORIDE
     Dosage: 400 MILLIGRAM 01-JUN-2004
     Route: 030
     Dates: start: 20040217, end: 20040601
  497. ZUCLOPENTHIXOL HYDROCHLORIDE [Suspect]
     Active Substance: ZUCLOPENTHIXOL HYDROCHLORIDE
     Dosage: 400 MILLIGRAM 01-JUN-2004; 01-JUN-2004 00:00
     Route: 030
  498. ZUCLOPENTHIXOL HYDROCHLORIDE [Suspect]
     Active Substance: ZUCLOPENTHIXOL HYDROCHLORIDE
     Dosage: 800 MILLIGRAM, QWK 17-FEB-2004; 17-FEB-2004 00:00, (ADDITIONAL INFORMATION ON DRUG (FREE TEXT): CLOZ
     Route: 030
     Dates: start: 20040217
  499. ZUCLOPENTHIXOL HYDROCHLORIDE [Suspect]
     Active Substance: ZUCLOPENTHIXOL HYDROCHLORIDE
     Dosage: 300 MILLIGRAM, QWK, 144087.5 MG 18-OCT-2009; 18-OCT-2009 00:00
     Route: 030
  500. ZUCLOPENTHIXOL HYDROCHLORIDE [Suspect]
     Active Substance: ZUCLOPENTHIXOL HYDROCHLORIDE
     Dosage: 300 MILLIGRAM, QD
     Route: 030
     Dates: start: 20091009
  501. ZUCLOPENTHIXOL HYDROCHLORIDE [Suspect]
     Active Substance: ZUCLOPENTHIXOL HYDROCHLORIDE
     Dosage: 400 MG, QWK (CUMULATIVE DOSE TO FIRST REACTION: 238288.1 MG)
     Route: 030
     Dates: start: 20040601, end: 20041018
  502. ZUCLOPENTHIXOL HYDROCHLORIDE [Suspect]
     Active Substance: ZUCLOPENTHIXOL HYDROCHLORIDE
     Dosage: 800 MG, QWK, (ADDITIONAL INFORMATION ON DRUG (FREE TEXT): CLOZARIL ADDITIONAL INFO: OFF LABEL USE; C
     Route: 030
     Dates: start: 20030204, end: 20040217
  503. ZUCLOPENTHIXOL HYDROCHLORIDE [Suspect]
     Active Substance: ZUCLOPENTHIXOL HYDROCHLORIDE
     Dosage: 400 MILLIGRAM, (ADDITIONAL INFORMATION ON DRUG (FREE TEXT): CLOZARIL ADDITIONAL INFO)
     Route: 030
     Dates: start: 20041018, end: 20041018
  504. ZUCLOPENTHIXOL HYDROCHLORIDE [Suspect]
     Active Substance: ZUCLOPENTHIXOL HYDROCHLORIDE
     Dosage: 400 MILLIGRAM, 1/WEEK, (ADDITIONAL INFORMATION ON DRUG (FREE TEXT): CLOZARIL ADDITIONAL INFO: OFF LA
     Route: 030
     Dates: start: 20030204, end: 20040217
  505. ZUCLOPENTHIXOL HYDROCHLORIDE [Suspect]
     Active Substance: ZUCLOPENTHIXOL HYDROCHLORIDE
     Dosage: 800 MILLIGRAM, 1/WEEK, (ADDITIONAL INFORMATION ON DRUG (FREE TEXT): CLOZARIL ADDITIONAL INFO: OFF LA
     Route: 030
     Dates: start: 20040601, end: 20041018
  506. ZUCLOPENTHIXOL HYDROCHLORIDE [Suspect]
     Active Substance: ZUCLOPENTHIXOL HYDROCHLORIDE
     Dosage: UNK, (ADDITIONAL INFORMATION ON DRUG (FREE TEXT): CLOZARIL ADDITIONAL INFO)
     Route: 030
  507. ZUCLOPENTHIXOL HYDROCHLORIDE [Suspect]
     Active Substance: ZUCLOPENTHIXOL HYDROCHLORIDE
     Dosage: 400 MILLIGRAM, (ADDITIONAL INFORMATION ON DRUG (FREE TEXT): CLOZARIL ADDITIONAL INFO)
     Route: 030
     Dates: start: 20040601
  508. ZUCLOPENTHIXOL HYDROCHLORIDE [Suspect]
     Active Substance: ZUCLOPENTHIXOL HYDROCHLORIDE
     Dosage: 400 MG, CYCLIC
     Route: 030
  509. CLOZARIL [Suspect]
     Active Substance: CLOZAPINE
     Indication: Schizophrenia
     Dosage: 245 MILLIGRAM
     Route: 048
     Dates: start: 20191207
  510. CLOZARIL [Suspect]
     Active Substance: CLOZAPINE
     Dosage: 200 MILLIGRAM, BID/09-DEC-2019
     Route: 048
     Dates: start: 20191209, end: 20191223
  511. CLOZARIL [Suspect]
     Active Substance: CLOZAPINE
     Dosage: 300 MILLIGRAM, PM
     Route: 065
  512. CLOZARIL [Suspect]
     Active Substance: CLOZAPINE
     Dosage: 245 MG, UNKNOWN
     Route: 048
     Dates: start: 20200521
  513. CLOZARIL [Suspect]
     Active Substance: CLOZAPINE
     Dosage: START DATE:09-DEC-2019245 MILLIGRAM/09-DEC-2019800 MILLIGRAM, QD
     Route: 048
  514. CLOZARIL [Suspect]
     Active Substance: CLOZAPINE
     Dosage: UNK
     Route: 065
     Dates: start: 20191223, end: 20191223
  515. CLOZARIL [Suspect]
     Active Substance: CLOZAPINE
     Dosage: 400 MILLIGRAM, QD (400 MG, DAILY)/07-DEC-2020
     Route: 048
     Dates: start: 20201207
  516. CLOZARIL [Suspect]
     Active Substance: CLOZAPINE
     Dosage: 400 MG, QD
     Route: 048
     Dates: start: 20191209, end: 20191223
  517. CLOZARIL [Suspect]
     Active Substance: CLOZAPINE
     Dosage: 6000 MILLIGRAM
     Route: 048
     Dates: start: 20200521
  518. CLOZARIL [Suspect]
     Active Substance: CLOZAPINE
     Dosage: UNK
     Route: 048
     Dates: start: 20100823
  519. CLOZARIL [Suspect]
     Active Substance: CLOZAPINE
     Dosage: 50 MILLIGRAM, QD (50 MILLIGRAM MIDDDAY )
     Route: 065
  520. CLOZARIL [Suspect]
     Active Substance: CLOZAPINE
     Dosage: UNK UNK, AM/2011
     Route: 065
  521. CLOZARIL [Suspect]
     Active Substance: CLOZAPINE
     Dosage: 1 DOSAGE FORM, (AT AM) / 1 DOSAGE FORM, QD
     Route: 048
     Dates: start: 2011
  522. CLOZARIL [Suspect]
     Active Substance: CLOZAPINE
     Dosage: 400 MILLIGRAM, QD (200 MILLIGRAM, BID)
     Route: 048
  523. CLOZARIL [Suspect]
     Active Substance: CLOZAPINE
     Dosage: 400 MILLIGRAM, QD (400 MG, DAILY)/23-DEC-2019; 23-DEC-2019 00:00
     Route: 048
     Dates: start: 20191223, end: 20191223
  524. CLOZARIL [Suspect]
     Active Substance: CLOZAPINE
     Dosage: 275 MILLIGRAM, QD; ??-???-2020 00:00 / 275 MILLIGRAM, QD, STOP DATE 2020
     Route: 048
     Dates: start: 20200521
  525. CLOZARIL [Suspect]
     Active Substance: CLOZAPINE
     Dosage: 200 MILLIGRAM, BID (200 MILLIGRAM, TWO TIMES A DAY) / 200 MILLIGRAM BID
     Route: 048
     Dates: start: 20191223
  526. CLOZARIL [Suspect]
     Active Substance: CLOZAPINE
     Dosage: 100 MILLIGRAM, QD, AM
     Route: 065
     Dates: start: 2011
  527. CLOZARIL [Suspect]
     Active Substance: CLOZAPINE
     Dosage: 300 MG, QD, (PM)
     Route: 065
  528. CLOZARIL [Suspect]
     Active Substance: CLOZAPINE
     Dosage: 245 MG, QD, (AM); ??-???-2011 00:00
     Route: 065
  529. CLOZARIL [Suspect]
     Active Substance: CLOZAPINE
     Dosage: 6000 MG
     Route: 048
     Dates: start: 20191209, end: 20191223
  530. CLOZARIL [Suspect]
     Active Substance: CLOZAPINE
     Dosage: 100 MG, QD, (AM)
     Route: 065
  531. CLOZARIL [Suspect]
     Active Substance: CLOZAPINE
     Dosage: 50 MG, QD, (MIDDAY)
     Route: 065
     Dates: start: 20200521
  532. CLOZARIL [Suspect]
     Active Substance: CLOZAPINE
     Dosage: 6000 MG
     Route: 048
     Dates: start: 20100823, end: 20100823
  533. CLOZARIL [Suspect]
     Active Substance: CLOZAPINE
     Dosage: UNK, 23-AUG-2010
     Route: 048
  534. CLOZARIL [Suspect]
     Active Substance: CLOZAPINE
     Dosage: 21-MAY-2020
     Route: 048
  535. CLOZARIL [Suspect]
     Active Substance: CLOZAPINE
     Dosage: 21-MAY-2020; END DATE ??-???-2021 00:00
     Route: 048
  536. CLOZARIL [Suspect]
     Active Substance: CLOZAPINE
     Dosage: 400 MG, UNKNOWN; ??-???-2020 00:00
     Dates: start: 20200521
  537. CLOZARIL [Suspect]
     Active Substance: CLOZAPINE
     Dosage: 50 MILLIGRAM, QD (50 MG, DAILY)
     Route: 048
     Dates: start: 20191209, end: 20191223
  538. CLOZARIL [Suspect]
     Active Substance: CLOZAPINE
     Dosage: 400 MILLIGRAM, QD (400 MG, DAILY)/09-DEC-2019
     Route: 065
  539. CLOZARIL [Suspect]
     Active Substance: CLOZAPINE
     Dosage: 400 MILLIGRAM, QD (200 MILLIGRAM, BID OFF LABEL USE)
     Route: 065
  540. CLOZARIL [Suspect]
     Active Substance: CLOZAPINE
     Dosage: 100 MG, UNKNOWN
  541. CLOZARIL [Suspect]
     Active Substance: CLOZAPINE
     Dosage: 400 MILLIGRAM, QD (400 MG, DAILY)/23-AUG-2010
     Route: 048
  542. CLOZARIL [Suspect]
     Active Substance: CLOZAPINE
     Dosage: 6000 MILLIGRAM/ START DATE:23-AUG-2010; 23-AUG-2010 00:00
     Route: 048
  543. CLOZARIL [Suspect]
     Active Substance: CLOZAPINE
     Dosage: UNK, 21-MAY-2020; ??-???-2020 00:00
     Route: 048
  544. CLOZARIL [Suspect]
     Active Substance: CLOZAPINE
     Dosage: 245 MILLIGRAM/21-MAY-2020
     Route: 048
  545. CLOZARIL [Suspect]
     Active Substance: CLOZAPINE
     Dosage: 275 MG, QD; ??-???-2020 00:00
     Route: 048
  546. CLOZARIL [Suspect]
     Active Substance: CLOZAPINE
     Dosage: 275 MILLIGRAM, QD (275 MILLIGRAM, PM)
     Route: 065
  547. CLOZARIL [Suspect]
     Active Substance: CLOZAPINE
     Dosage: 245 MILLIGRAM/09-DEC-2019; 23-DEC-2019 00:00
     Route: 048
  548. CLOZARIL [Suspect]
     Active Substance: CLOZAPINE
     Dosage: 800 MG, QD
     Route: 065
  549. CLOZARIL [Suspect]
     Active Substance: CLOZAPINE
     Dosage: 245 MILLIGRAM, QD, 1 ONCE A DAY (AM)/2011
     Route: 065
     Dates: start: 20191207
  550. CLOZARIL [Suspect]
     Active Substance: CLOZAPINE
     Dosage: UNK, 23-DEC-2019; 23-DEC-2019 00:00
     Route: 048
  551. CLOZARIL [Suspect]
     Active Substance: CLOZAPINE
     Dosage: 200 MILLIGRAM, BID
     Route: 048
     Dates: start: 20191209, end: 20191223
  552. CLOZARIL [Suspect]
     Active Substance: CLOZAPINE
     Dosage: START DATE: 07-DEC-2020
     Route: 048
  553. CLOZARIL [Suspect]
     Active Substance: CLOZAPINE
     Dosage: 400 MILLIGRAM, QD (400 MG, DAILY)
     Route: 065
     Dates: start: 20191223, end: 20191223
  554. CLOZARIL [Suspect]
     Active Substance: CLOZAPINE
     Dosage: 245 MILLIGRAM, QD (245 MILLIGRAM, DAILY)
     Route: 048
     Dates: start: 20191209, end: 20191223
  555. CLOZARIL [Suspect]
     Active Substance: CLOZAPINE
     Dosage: 800 MILLIGRAM, QD
     Route: 048
     Dates: start: 20201207
  556. CLOZARIL [Suspect]
     Active Substance: CLOZAPINE
     Dosage: 245 MG, UNKNOWN (CUMULATIVE DOSE TO FIRST REACTION: 6000 MG)
     Route: 048
     Dates: start: 20191209, end: 20191223
  557. CLOZARIL [Suspect]
     Active Substance: CLOZAPINE
     Dosage: 245 MG (CUMULATIVE DOSE TO FIRST REACTION: 6000 MG)
     Route: 048
     Dates: start: 20100823
  558. CLOZARIL [Suspect]
     Active Substance: CLOZAPINE
     Dosage: 275 MILLIGRAM, ONCE A DAY PM
     Route: 065
  559. CLOZARIL [Suspect]
     Active Substance: CLOZAPINE
     Indication: Schizophrenia
     Dosage: 1 DOSAGE FORM, DAILY; STOP DATE: ??-???-2021 00:00
  560. CLOZARIL [Suspect]
     Active Substance: CLOZAPINE
     Dosage: 6000 MG
     Route: 048
     Dates: start: 20191223, end: 20191223
  561. CLOZARIL [Suspect]
     Active Substance: CLOZAPINE
     Dosage: 50 MG, DAILY (MIDDAY)
  562. CLOZARIL [Suspect]
     Active Substance: CLOZAPINE
     Dosage: 800 MG, DAILY
     Route: 048
     Dates: start: 20201207
  563. CLOZARIL [Suspect]
     Active Substance: CLOZAPINE
     Dosage: 245 MG, DAILY
     Dates: start: 20191209, end: 20191223
  564. CLOZARIL [Suspect]
     Active Substance: CLOZAPINE
     Dosage: 300 MG, DAILY (PM)/300 MILLIGRAM, ONCE A DAY PM
     Route: 048
     Dates: start: 20100823
  565. CLOZARIL [Suspect]
     Active Substance: CLOZAPINE
     Dosage: 200 MG, BID (OFF-LABEL USE)
  566. CLOZARIL [Suspect]
     Active Substance: CLOZAPINE
     Dosage: 275 MG, DAILY (PM)
  567. CLOZARIL [Suspect]
     Active Substance: CLOZAPINE
     Dosage: 400 MG, UNKNOWN
     Route: 048
     Dates: start: 20191223, end: 20191223
  568. CLOZARIL [Suspect]
     Active Substance: CLOZAPINE
     Dosage: 400 MG, DAILY
     Dates: start: 20191209, end: 20191223
  569. CLOZARIL [Suspect]
     Active Substance: CLOZAPINE
     Dosage: UNK
     Dates: start: 20201207
  570. CLOZARIL [Suspect]
     Active Substance: CLOZAPINE
     Dosage: STOP DATE: 2021
     Dates: start: 20200521
  571. CLOZARIL [Suspect]
     Active Substance: CLOZAPINE
     Dosage: 50 MG, QD, (MIDDAY)
     Dates: start: 20200521
  572. CLOZARIL [Suspect]
     Active Substance: CLOZAPINE
     Dosage: 800 MG, QD
  573. CLOZARIL [Suspect]
     Active Substance: CLOZAPINE
     Dosage: 1 DOSAGE FORM, DAILY
     Dates: start: 2011
  574. CLOZARIL [Suspect]
     Active Substance: CLOZAPINE
     Dosage: 245 MG, QD, (AM)
     Dates: start: 2011
  575. CLOZARIL [Suspect]
     Active Substance: CLOZAPINE
     Dosage: 100 MILLIGRAM, QD, AM
  576. CLOZARIL [Suspect]
     Active Substance: CLOZAPINE
     Dosage: 300 MG, QD, (PM)/300 MG, QD(1X/DAY (PM))
  577. CLOZARIL [Suspect]
     Active Substance: CLOZAPINE
     Dosage: 400 MILLIGRAM, QD (400 MG, DAILY)/09-DEC-2019; 23-DEC-2019 00:00
  578. CLOZARIL [Suspect]
     Active Substance: CLOZAPINE
     Dosage: 400 MILLIGRAM, QD (400 MG, DAILY)/07-DEC-2020
  579. CLOZARIL [Suspect]
     Active Substance: CLOZAPINE
     Dosage: UNK, 23-DEC-2019; 23-DEC-2019 00:00
  580. CLOZARIL [Suspect]
     Active Substance: CLOZAPINE
     Dosage: 245 MILLIGRAM, QD, 1 ONCE A DAY (AM)/2011
  581. CLOZARIL [Suspect]
     Active Substance: CLOZAPINE
     Dosage: UNK, 23-DEC-2019
  582. CLOZARIL [Suspect]
     Active Substance: CLOZAPINE
     Dosage: 6000 MILLIGRAM
     Route: 048
     Dates: start: 20200521
  583. CLOZARIL [Suspect]
     Active Substance: CLOZAPINE
     Dosage: 50 MILLIGRAM, QD (50 MG, DAILY)
     Dates: start: 20191209, end: 20191223
  584. CLOZARIL [Suspect]
     Active Substance: CLOZAPINE
     Dosage: 400 MILLIGRAM, QD (200 MILLIGRAM, BID OFF LABEL USE)
  585. CLOZARIL [Suspect]
     Active Substance: CLOZAPINE
     Dosage: 200 MILLIGRAM, BID/09-DEC-2019; 23-DEC-2019 00:00
  586. CLOZARIL [Suspect]
     Active Substance: CLOZAPINE
     Dosage: UNK UNK, AM/2011
     Route: 065
  587. CLOZARIL [Suspect]
     Active Substance: CLOZAPINE
     Dosage: UNK
     Dates: start: 20191223, end: 20191223
  588. CLOZARIL [Suspect]
     Active Substance: CLOZAPINE
     Dosage: 6000 MILLIGRAM
     Dates: start: 20191209, end: 20191223
  589. CLOZARIL [Suspect]
     Active Substance: CLOZAPINE
     Dosage: 50 MILLIGRAM, QD (50 MILLIGRAM MIDDAY)
  590. CLOZARIL [Suspect]
     Active Substance: CLOZAPINE
     Dosage: 400 MILLIGRAM, QD (400 MG, DAILY)/23-AUG-2010
  591. CLOZARIL [Suspect]
     Active Substance: CLOZAPINE
     Dosage: 100 MG, UNKNOWN
  592. CLOZARIL [Suspect]
     Active Substance: CLOZAPINE
     Dosage: UNK
     Dates: start: 20100823
  593. CLOZARIL [Suspect]
     Active Substance: CLOZAPINE
     Dosage: 300 MILLIGRAM, PM/300 MILLIGRAM, ONCE A DAY
     Route: 065
  594. CLOZARIL [Suspect]
     Active Substance: CLOZAPINE
     Dosage: 6000 MILLIGRAM/ START DATE:23-AUG-2010; 23-AUG-2010 00:00
  595. CLOZARIL [Suspect]
     Active Substance: CLOZAPINE
     Dosage: 400 MILLIGRAM, QD (400 MG, DAILY)/23-DEC-2019; 23-DEC-2019 00:00
  596. CLOZARIL [Suspect]
     Active Substance: CLOZAPINE
     Dosage: 275 MILLIGRAM, QD; ??-???-2020 00:00
  597. CLOZARIL [Suspect]
     Active Substance: CLOZAPINE
     Dosage: 275 MILLIGRAM, QD (275 MILLIGRAM, PM)
  598. CLOZARIL [Suspect]
     Active Substance: CLOZAPINE
     Dosage: UNK, 23-AUG-2010
  599. CLOZARIL [Suspect]
     Active Substance: CLOZAPINE
     Dosage: START DATE:09-DEC-2019245 MILLIGRAM/09-DEC-2019800 MILLIGRAM, QD; 23-DEC-2019 00:00
  600. CLOZARIL [Suspect]
     Active Substance: CLOZAPINE
     Dosage: 400 MG, UNKNOWN
     Dates: start: 20200521
  601. CLOZARIL [Suspect]
     Active Substance: CLOZAPINE
     Dosage: 400 MG, QD
     Dates: start: 20191209, end: 20191223
  602. CLOZARIL [Suspect]
     Active Substance: CLOZAPINE
     Dosage: 200 MILLIGRAM, BID (200 MILLIGRAM, TWO TIMES A DAY)
  603. CLOZARIL [Suspect]
     Active Substance: CLOZAPINE
     Dosage: 400 MILLIGRAM, QD (200 MILLIGRAM, BID)
  604. CLOZARIL [Suspect]
     Active Substance: CLOZAPINE
     Dosage: 21-MAY-2020
  605. CLOZARIL [Suspect]
     Active Substance: CLOZAPINE
     Dosage: 1 DOSAGE FORM, AM/ START DATE: 2011
  606. CLOZARIL [Suspect]
     Active Substance: CLOZAPINE
     Dosage: 245 MILLIGRAM, UNKNOWN/09-DEC-2019
     Dates: start: 20191223, end: 20191223
  607. CLOZARIL [Suspect]
     Active Substance: CLOZAPINE
     Dosage: 100 MG, QD, (AM)
  608. CLOZARIL [Suspect]
     Active Substance: CLOZAPINE
     Dosage: 245 MG, UNKNOWN
     Dates: start: 20200521, end: 20201223
  609. CLOZARIL [Suspect]
     Active Substance: CLOZAPINE
     Indication: Product used for unknown indication
     Dosage: 6000 MILLIGRAM
     Route: 048
     Dates: start: 20200521
  610. CLOZARIL [Suspect]
     Active Substance: CLOZAPINE
     Dosage: 245 MILLIGRAM, QD (CUMULATIVE DOSE:366765.0 MG)
     Route: 048
     Dates: start: 20191207
  611. CLOZARIL [Suspect]
     Active Substance: CLOZAPINE
     Dosage: 1 DOSAGE FORM, QD
     Route: 048
     Dates: start: 2011
  612. CLOZARIL [Suspect]
     Active Substance: CLOZAPINE
     Dosage: 5 MILLIGRAM
     Route: 048
  613. CLOZARIL [Suspect]
     Active Substance: CLOZAPINE
     Dosage: 275 MG, QD
     Route: 048
     Dates: start: 20200521, end: 20200521
  614. CLOZARIL [Suspect]
     Active Substance: CLOZAPINE
     Dosage: 800 MG, QD
     Route: 048
  615. CLOZARIL [Suspect]
     Active Substance: CLOZAPINE
     Dosage: 200 MG, BID
     Route: 048
     Dates: start: 20191209, end: 20191223
  616. CLOZARIL [Suspect]
     Active Substance: CLOZAPINE
     Dosage: 800 MILLIGRAM, QD
     Route: 048
     Dates: start: 20201207
  617. CLOZARIL [Suspect]
     Active Substance: CLOZAPINE
     Dosage: 200 MILLIGRAM, TWO TIMES A DAY
     Route: 048
  618. CLOZARIL [Suspect]
     Active Substance: CLOZAPINE
     Dosage: UNK
     Route: 048
     Dates: start: 20191209, end: 20191223
  619. CLOZARIL [Suspect]
     Active Substance: CLOZAPINE
     Dosage: 200 MILLIGRAM, ONCE A DAY, OFF LABEL USE
     Route: 048
     Dates: start: 20100823
  620. CLOZARIL [Suspect]
     Active Substance: CLOZAPINE
     Dosage: 245 MG, QD (AM)
     Route: 048
     Dates: start: 20191223, end: 20191223
  621. CLOZARIL [Suspect]
     Active Substance: CLOZAPINE
     Dosage: 100 MG, QD; 100 MILLIGRAM, ONCE A DAY AM
     Route: 048
     Dates: start: 2011
  622. CLOZARIL [Suspect]
     Active Substance: CLOZAPINE
     Dosage: 400 MG, BID
     Route: 048
  623. CLOZARIL [Suspect]
     Active Substance: CLOZAPINE
     Dosage: 6000 MILLIGRAM
     Route: 048
     Dates: start: 20100823, end: 20100823
  624. CLOZARIL [Suspect]
     Active Substance: CLOZAPINE
     Dosage: 245 MG, QD;  END DATE: ??-???-2020 00:00
     Route: 048
     Dates: start: 20200521
  625. CLOZARIL [Suspect]
     Active Substance: CLOZAPINE
     Dosage: 400 MG
     Route: 048
     Dates: start: 20200823
  626. CLOZARIL [Suspect]
     Active Substance: CLOZAPINE
     Dosage: 275 MG, QD
     Route: 048
     Dates: start: 20200521, end: 20200521
  627. CLOZARIL [Suspect]
     Active Substance: CLOZAPINE
     Dosage: 50 MG, QD, MIDDAY
     Route: 048
     Dates: start: 20191209, end: 20191223
  628. CLOZARIL [Suspect]
     Active Substance: CLOZAPINE
     Dosage: 400 MG, QD
     Route: 048
     Dates: start: 20191209, end: 20191223
  629. CLOZARIL [Suspect]
     Active Substance: CLOZAPINE
     Dosage: 245 MG
     Route: 048
     Dates: start: 20191223, end: 20191223
  630. CLOZARIL [Suspect]
     Active Substance: CLOZAPINE
     Dosage: 245 MILLIGRAM, ONCE A DAY
     Route: 048
     Dates: start: 20191209, end: 20191223
  631. CLOZARIL [Suspect]
     Active Substance: CLOZAPINE
     Dosage: 50 MG, QD, MIDDAY
     Route: 048
     Dates: start: 20191209, end: 20191223
  632. CLOZARIL [Suspect]
     Active Substance: CLOZAPINE
     Dosage: 400 MG, QD OFF LABEL USE
     Route: 048
  633. CLOZARIL [Suspect]
     Active Substance: CLOZAPINE
     Dosage: 6000 MG
     Route: 048
     Dates: start: 20201207
  634. CLOZARIL [Suspect]
     Active Substance: CLOZAPINE
     Dosage: 1 DOSAGE FORM, EACH MORNING
     Route: 048
  635. CLOZARIL [Suspect]
     Active Substance: CLOZAPINE
     Dosage: 1 DF, QD, 1 DOSAGE FORM, ONCE A DAY (1 DF, EACH MORNING)
     Dates: start: 2011
  636. CLOZARIL [Suspect]
     Active Substance: CLOZAPINE
     Dosage: 245 MILLIGRAM; END DATE ??-???-2021 00:00
     Route: 048
     Dates: start: 20200521
  637. CLOZARIL [Suspect]
     Active Substance: CLOZAPINE
     Dosage: UNK
     Route: 048
     Dates: start: 20191209, end: 20191223
  638. CLOZARIL [Suspect]
     Active Substance: CLOZAPINE
     Dosage: 6000 MG
     Route: 048
     Dates: start: 20191223, end: 20191223
  639. CLOZARIL [Suspect]
     Active Substance: CLOZAPINE
     Dosage: 400 MG, QD
     Route: 048
     Dates: start: 20191223, end: 20191223
  640. CLOZARIL [Suspect]
     Active Substance: CLOZAPINE
     Dosage: 6000 MG
     Route: 048
     Dates: start: 20100823, end: 20100823
  641. CLOZARIL [Suspect]
     Active Substance: CLOZAPINE
     Dosage: UNK UNK, UNKNOWN
     Route: 048
     Dates: start: 20200823, end: 20200823
  642. CLOZARIL [Suspect]
     Active Substance: CLOZAPINE
     Dosage: 6000 MILLIGRAM
     Route: 048
     Dates: start: 20200521
  643. CLOZARIL [Suspect]
     Active Substance: CLOZAPINE
     Dosage: 400 MG, BID
  644. CLOZARIL [Suspect]
     Active Substance: CLOZAPINE
     Dosage: 200 MG, QD
     Route: 050
     Dates: start: 20100823
  645. CLOZARIL [Suspect]
     Active Substance: CLOZAPINE
     Dosage: 600 MG, QD AM (1 ONCE A DAY)
     Route: 048
     Dates: start: 2011
  646. CLOZARIL [Suspect]
     Active Substance: CLOZAPINE
     Dosage: 50 MG, QD(1X/DAY (MIDDAY))
  647. CLOZARIL [Suspect]
     Active Substance: CLOZAPINE
     Dosage: 245 MILLIGRAM
     Dates: start: 20100823
  648. CLOZARIL [Suspect]
     Active Substance: CLOZAPINE
     Dosage: 275 MILLIGRAM, ONCE A DAY PM
     Route: 048
  649. CLOZARIL [Suspect]
     Active Substance: CLOZAPINE
     Dosage: 600 MILLIGRAM, QD
     Dates: start: 20191207, end: 20191223
  650. CLOZARIL [Suspect]
     Active Substance: CLOZAPINE
     Dosage: 400 MG, QD
  651. CLOZARIL [Suspect]
     Active Substance: CLOZAPINE
     Dosage: 800 MG, QD
  652. CLOZARIL [Suspect]
     Active Substance: CLOZAPINE
     Dosage: 245 MG, UNKNOWN
     Dates: start: 20191223, end: 20191223
  653. CLOZARIL [Suspect]
     Active Substance: CLOZAPINE
     Dosage: 200 MG, BID
     Route: 050
     Dates: start: 20191209, end: 20191223
  654. CLOZARIL [Suspect]
     Active Substance: CLOZAPINE
     Dosage: 6000 MG
     Route: 048
     Dates: start: 20201209, end: 20201223
  655. CLOZARIL [Suspect]
     Active Substance: CLOZAPINE
     Dosage: UNK
     Route: 048
     Dates: start: 20100823
  656. CLOZARIL [Suspect]
     Active Substance: CLOZAPINE
     Dosage: 245 MILLIGRAM, QD
     Route: 048
     Dates: start: 20190823, end: 20190823
  657. CLOZARIL [Suspect]
     Active Substance: CLOZAPINE
     Dosage: 245 MILLIGRAM, QD
     Route: 048
     Dates: start: 20200521
  658. CLOZARIL [Suspect]
     Active Substance: CLOZAPINE
     Dosage: 6000 MILLIGRAM
     Route: 048
     Dates: start: 20200207
  659. CLOZARIL [Suspect]
     Active Substance: CLOZAPINE
     Indication: Product used for unknown indication
     Dosage: 100 MG 100 MG, 1X/DAY (AM)
  660. CLOZARIL [Suspect]
     Active Substance: CLOZAPINE
     Dosage: 275 275 MG, DAILY
     Dates: start: 20200521
  661. CLOZARIL [Suspect]
     Active Substance: CLOZAPINE
     Dosage: 100 MG, EACH MORNING
  662. CLOZARIL [Suspect]
     Active Substance: CLOZAPINE
     Dosage: 245 MG
     Route: 048
     Dates: start: 20191207
  663. CLOZARIL [Suspect]
     Active Substance: CLOZAPINE
     Dosage: UNK, UNKNOWN
     Route: 048
     Dates: start: 20191223, end: 20191223
  664. CLOZARIL [Suspect]
     Active Substance: CLOZAPINE
     Dosage: 245 MG, QD
     Route: 048
     Dates: start: 20191209, end: 20191223
  665. CLOZARIL [Suspect]
     Active Substance: CLOZAPINE
     Dosage: 300 MG, DAILY
  666. CLOZARIL [Suspect]
     Active Substance: CLOZAPINE
     Dosage: 245 MG, UNKNOWN
  667. CLOZARIL [Suspect]
     Active Substance: CLOZAPINE
     Dosage: 400 MG, 200 MILLIGRAM, BID
     Dates: start: 20191209, end: 20191223
  668. CLOZARIL [Suspect]
     Active Substance: CLOZAPINE
     Dosage: 400 MG, QD
     Route: 048
     Dates: start: 20201207
  669. CLOZARIL [Suspect]
     Active Substance: CLOZAPINE
     Dosage: 400 MG, BID
  670. CLOZARIL [Suspect]
     Active Substance: CLOZAPINE
     Dosage: 300 MG, QD, PM
     Route: 065
  671. CLOZARIL [Suspect]
     Active Substance: CLOZAPINE
     Dosage: 50 MG, 1X/DAY (MIDDAY)
  672. CLOZARIL [Suspect]
     Active Substance: CLOZAPINE
     Dosage: 400 MG, 200 MG, BID
  673. CLOZARIL [Suspect]
     Active Substance: CLOZAPINE
     Dosage: UNK UNK, UNKNOWN
     Dates: start: 20201207
  674. CLOZARIL [Suspect]
     Active Substance: CLOZAPINE
     Dosage: 245 MILLIGRAM, QD, 1 ONCE A DAY (AM)
  675. CLOZARIL [Suspect]
     Active Substance: CLOZAPINE
     Dosage: 100 MG, QD
  676. CLOZARIL [Suspect]
     Active Substance: CLOZAPINE
     Dosage: 50 MG, QD, MIDDAY
  677. CLOZARIL [Suspect]
     Active Substance: CLOZAPINE
     Dosage: 300 MILLIGRAM, PM
  678. CLOZARIL [Suspect]
     Active Substance: CLOZAPINE
     Dosage: 300 MILLIGRAM, PM
  679. CLOZARIL [Suspect]
     Active Substance: CLOZAPINE
     Dosage: UNK, UNKNOWN
     Dates: start: 20201207
  680. CLOZARIL [Suspect]
     Active Substance: CLOZAPINE
     Dosage: UNK
     Dates: start: 20191209, end: 20191223
  681. CLOZARIL [Suspect]
     Active Substance: CLOZAPINE
     Dosage: 1 DOSAGE FORM, EACH MORNING
     Route: 048
  682. CLOZARIL [Suspect]
     Active Substance: CLOZAPINE
     Dosage: 300 MG, 1X/DAY (PM)
  683. CLOZARIL [Suspect]
     Active Substance: CLOZAPINE
     Dosage: 275 MG, QD, PM
     Route: 065
  684. CLOZARIL [Suspect]
     Active Substance: CLOZAPINE
     Dosage: 50 MG, QD, MIDDAY
  685. CLOZARIL [Suspect]
     Active Substance: CLOZAPINE
     Dosage: 50 MILLIGRAM MIDDAY
  686. CLOZARIL [Suspect]
     Active Substance: CLOZAPINE
     Dosage: 50 MILLIGRAM MIDDAY
  687. CLOZARIL [Suspect]
     Active Substance: CLOZAPINE
     Dosage: 200 MILLIGRAM, BID
     Route: 048
     Dates: start: 20191209, end: 20191223
  688. CLOZARIL [Suspect]
     Active Substance: CLOZAPINE
     Dosage: UNK UNK, AM (1 ONCE A DAY (AM))
  689. CLOZARIL [Suspect]
     Active Substance: CLOZAPINE
     Dosage: 275 MILLIGRAM, PM
  690. CLOZARIL [Suspect]
     Active Substance: CLOZAPINE
     Dosage: 275 MG, 1X/DAY (PM)
  691. CLOZARIL [Suspect]
     Active Substance: CLOZAPINE
     Dosage: 50 MG, DAILY
  692. CLOZARIL [Suspect]
     Active Substance: CLOZAPINE
     Dosage: 400 MG, DAILY
  693. CLOZARIL [Suspect]
     Active Substance: CLOZAPINE
     Dosage: UNKNOWN,UNKNOWN
     Dates: start: 20150930, end: 20151021
  694. CLOZARIL [Suspect]
     Active Substance: CLOZAPINE
     Dosage: 400 MG, UNK UNK, UNKNOWN
     Route: 048
     Dates: start: 20100823
  695. CLOZARIL [Suspect]
     Active Substance: CLOZAPINE
     Dosage: 400 MG, QD [CUMULATIVE DOSE TO FIRST REACTION: 605200.0 MG]
     Route: 048
     Dates: start: 20191223, end: 20191223
  696. CLOZARIL [Suspect]
     Active Substance: CLOZAPINE
     Dosage: 245 MG
     Route: 048
     Dates: start: 20191209, end: 20191223
  697. CLOZARIL [Suspect]
     Active Substance: CLOZAPINE
     Dosage: 245 MG, QD (AM)
     Dates: start: 20191223, end: 20191223
  698. CLOZARIL [Suspect]
     Active Substance: CLOZAPINE
     Dosage: 400 MG, QD OFF LABEL USE
  699. CLOZARIL [Suspect]
     Active Substance: CLOZAPINE
     Dosage: 245 MILLIGRAM, ONCE A DAY
     Dates: start: 20191209, end: 20191223
  700. CLOZARIL [Suspect]
     Active Substance: CLOZAPINE
     Dosage: 100 MG, QD
  701. CLOZARIL [Suspect]
     Active Substance: CLOZAPINE
     Dosage: 300 MILLIGRAM, ONCE A DAY
     Route: 048
  702. CLOZARIL [Suspect]
     Active Substance: CLOZAPINE
     Dosage: 245 MILLIGRAM, ONCE A DAY
     Route: 048
     Dates: start: 2011
  703. CLOZARIL [Suspect]
     Active Substance: CLOZAPINE
     Dosage: 50 MG, QD(1X/DAY (MIDDAY))
     Route: 048
  704. CLOZARIL [Suspect]
     Active Substance: CLOZAPINE
     Dosage: 400 MG, QD
     Route: 048
     Dates: start: 20201207
  705. CLOZARIL [Suspect]
     Active Substance: CLOZAPINE
     Dosage: 6000 MG
     Route: 048
     Dates: start: 20201223, end: 20201223
  706. CLOZARIL [Suspect]
     Active Substance: CLOZAPINE
     Dosage: 400 MG
     Route: 048
     Dates: start: 20191223, end: 20191223
  707. CLOZARIL [Suspect]
     Active Substance: CLOZAPINE
     Dosage: 200 MILLIGRAM, TWO TIMES A DAY
     Route: 048
     Dates: start: 20191209
  708. CLOZARIL [Suspect]
     Active Substance: CLOZAPINE
     Dosage: 6000 MG
     Route: 048
     Dates: start: 20201207
  709. CLOZARIL [Suspect]
     Active Substance: CLOZAPINE
     Indication: Schizophrenia
     Dosage: 800 MILLIGRAM, DAILY, TABLET (UNCOATED, ORAL)
     Route: 048
  710. CLOZARIL [Suspect]
     Active Substance: CLOZAPINE
     Indication: Schizophrenia
     Dosage: 400 MILLIGRAM, DAILY, TABLET (UNCOATED, ORAL)
     Route: 048
     Dates: start: 2011
  711. CLOZARIL [Suspect]
     Active Substance: CLOZAPINE
     Dosage: 800 MILLIGRAM, DAILY, TABLET (UNCOATED, ORAL)
     Route: 048
     Dates: start: 20201207
  712. CLOZARIL [Suspect]
     Active Substance: CLOZAPINE
     Dosage: 200 MILLIGRAM, TWO TIMES A DAY, TABLET (UNCOATED, ORAL)
     Route: 048
  713. CLOZARIL [Suspect]
     Active Substance: CLOZAPINE
     Dosage: 50 MILLIGRAM, ONCE A DAY (50 MILLIGRAM,MIDDAY), TABLET (UNCOATED, ORAL)
  714. CLOZARIL [Suspect]
     Active Substance: CLOZAPINE
     Dosage: 245 MILLIGRAM, DAILY
     Route: 048
     Dates: start: 20191209, end: 20191223
  715. CLOZARIL [Suspect]
     Active Substance: CLOZAPINE
     Dosage: 245 MG, UNKNOWN, TABLET (UNCOATED, ORAL)
     Route: 048
     Dates: start: 20191209, end: 20191223
  716. CLOZARIL [Suspect]
     Active Substance: CLOZAPINE
     Dosage: 200 MILLIGRAM, TWO TIMES A DAY TABLET (UNCOATED, ORAL)
     Route: 048
     Dates: start: 20191209, end: 20191223
  717. CLOZARIL [Suspect]
     Active Substance: CLOZAPINE
     Dosage: UNK UNK, UNKNOWN, DAILY, TABLET (UNCOATED, ORAL)
     Route: 048
     Dates: start: 20201207
  718. CLOZARIL [Suspect]
     Active Substance: CLOZAPINE
     Dosage: 245 MG, TABLET (UNCOATED, ORAL)
     Dates: start: 20191207
  719. CLOZARIL [Suspect]
     Active Substance: CLOZAPINE
     Dosage: OFF LABEL USE, TABLET (UNCOATED, ORAL)
     Route: 048
     Dates: start: 20200521
  720. CLOZARIL [Suspect]
     Active Substance: CLOZAPINE
     Dosage: 1 DOSAGE FORM, ONCE A DAY (1 DF, EACH MORNING) TABLET (UNCOATED, ORAL)
     Route: 048
     Dates: start: 2011
  721. CLOZARIL [Suspect]
     Active Substance: CLOZAPINE
     Dosage: 245 MILLIGRAM, ONCE A DAY
     Route: 048
     Dates: start: 2011
  722. CLOZARIL [Suspect]
     Active Substance: CLOZAPINE
     Dosage: 245 MG, UNKNOWN, TABLET (UNCOATED, ORAL)
     Route: 048
     Dates: start: 20191223, end: 20191223
  723. CLOZARIL [Suspect]
     Active Substance: CLOZAPINE
     Dosage: 100 MILLIGRAM, ONCE A DAY AM, TABLET (UNCOATED, ORAL)
     Route: 048
  724. CLOZARIL [Suspect]
     Active Substance: CLOZAPINE
     Dosage: 50 MG, DAILY, TABLET (UNCOATED, ORAL)
     Route: 048
     Dates: start: 20191209, end: 20191223
  725. CLOZARIL [Suspect]
     Active Substance: CLOZAPINE
     Dosage: 300 MILLIGRAM, ONCE A DAY, TABLET (UNCOATED, ORAL)
     Route: 048
  726. CLOZARIL [Suspect]
     Active Substance: CLOZAPINE
     Dosage: 245 MILLIGRAM, TABLET (UNCOATED, ORAL)
     Route: 048
     Dates: start: 20100823
  727. CLOZARIL [Suspect]
     Active Substance: CLOZAPINE
     Dosage: 275 MILLIGRAM, ONCE A DAY PM, TABLET (UNCOATED, ORAL)
  728. CLOZARIL [Suspect]
     Active Substance: CLOZAPINE
     Dosage: 6000 MG
     Route: 048
     Dates: start: 20100823, end: 20100823
  729. CLOZARIL [Suspect]
     Active Substance: CLOZAPINE
     Dosage: 200 MILLIGRAM, ONCE A DAY, 200 MILLIGRAM, BID OFF LABEL USE TABLE (UNCOATED ORAL)
     Route: 048
  730. CLOZARIL [Suspect]
     Active Substance: CLOZAPINE
     Dosage: 245 MILLIGRAM, TABLET (UNCOATED, ORAL)
     Route: 048
     Dates: start: 20200521
  731. CLOZARIL [Suspect]
     Active Substance: CLOZAPINE
     Dosage: 1 DOSAGE FORM, EACH MORNING TABLET (UNCOATED, ORAL)
     Route: 048
     Dates: start: 2011
  732. CLOZARIL [Suspect]
     Active Substance: CLOZAPINE
     Dosage: UNK UNK, UNKNOWN, TABLET (UNCOATED ORAL)
     Route: 048
     Dates: start: 20100823
  733. CLOZARIL [Suspect]
     Active Substance: CLOZAPINE
     Dosage: UNK UNK, UNKNOWN, TABLET (UNCOATED, ORAL)
     Route: 048
     Dates: start: 20200521
  734. CLOZARIL [Suspect]
     Active Substance: CLOZAPINE
     Dosage: 300 MILLIGRAM, ONCE A DAY PM, TABLET (UNCOATED, ORAL)
     Route: 048
     Dates: start: 20100823
  735. CLOZARIL [Suspect]
     Active Substance: CLOZAPINE
     Dosage: 100 MG, TABLET (UNCOATED, ORAL)
  736. CLOZARIL [Suspect]
     Active Substance: CLOZAPINE
     Dosage: 245 MG, TABLET (UNCOATED, ORAL)
     Route: 048
     Dates: start: 20191209, end: 20191223
  737. CLOZARIL [Suspect]
     Active Substance: CLOZAPINE
     Dosage: 200 MILLIGRAM, TWO TIMES A DAY, TABLET (UNCOATED, ORAL)
     Route: 048
  738. CLOZARIL [Suspect]
     Active Substance: CLOZAPINE
     Dosage: 245 MILLIGRAM, QD
     Route: 048
     Dates: start: 20190823, end: 20190823
  739. CLOZARIL [Suspect]
     Active Substance: CLOZAPINE
     Dosage: 1 DOSAGE FORM, EACH MORNING
     Route: 048
  740. CLOZARIL [Suspect]
     Active Substance: CLOZAPINE
     Dosage: 100 MILLIGRAM, ONCE A DAY AM
     Route: 048
     Dates: start: 20191223, end: 20191223
  741. CLOZARIL [Suspect]
     Active Substance: CLOZAPINE
     Dosage: 400 MG, DAILY
     Route: 048
  742. CLOZARIL [Suspect]
     Active Substance: CLOZAPINE
     Dosage: UNK
     Route: 048
     Dates: start: 20191223, end: 20191223
  743. CLOZARIL [Suspect]
     Active Substance: CLOZAPINE
     Dosage: 50 MILLIGRAM, ONCE A DAY (50 MILLIGRAM,MIDDAY)
  744. CLOZARIL [Suspect]
     Active Substance: CLOZAPINE
     Dosage: 300 MG, QD, PM
     Route: 048
     Dates: start: 20100823
  745. CLOZARIL [Suspect]
     Active Substance: CLOZAPINE
     Dosage: 6000 MILLIGRAM
     Route: 048
     Dates: start: 20201207
  746. CLOZARIL [Suspect]
     Active Substance: CLOZAPINE
     Dosage: 6000 MILLIGRAM
     Route: 048
     Dates: start: 20200207
  747. CLOZARIL [Suspect]
     Active Substance: CLOZAPINE
     Dosage: 50 MILLIGRAM, ONCE A DAY (50 MILLIGRAM,MIDDAY), TABLET (UNCOATED, ORAL)
     Route: 048
     Dates: start: 20190809, end: 20190823
  748. CLOZARIL [Suspect]
     Active Substance: CLOZAPINE
     Dosage: 600 MILLIGRAM, QD
     Route: 048
     Dates: start: 20191207, end: 20191223
  749. CLOZARIL [Suspect]
     Active Substance: CLOZAPINE
     Dosage: 400 MILLIGRAM, BID
     Route: 048
  750. CLOZARIL [Suspect]
     Active Substance: CLOZAPINE
     Dosage: 600 MILLIGRAM, QD
     Route: 048
     Dates: start: 20200521, end: 2021
  751. CLOZARIL [Suspect]
     Active Substance: CLOZAPINE
     Dosage: 6000 MILLIGRAM
     Route: 048
     Dates: start: 20201223, end: 20201223
  752. CLOZARIL [Suspect]
     Active Substance: CLOZAPINE
     Dosage: 800 MILLIGRAM, BID
     Route: 048
  753. CLOZARIL [Suspect]
     Active Substance: CLOZAPINE
     Dosage: 275 MG, QD (ADDITIONAL INFORMATION ON DRUG: CLOZARIL ADDITIONAL INFO: OFF LABEL USE; CUMULATIVE DOSE
  754. CLOZARIL [Suspect]
     Active Substance: CLOZAPINE
     Dosage: 100 MG, QD (ADDITIONAL INFORMATION ON DRUG: CLOZARIL ADDITIONAL INFO: OFF LABEL USE; CUMULATIVE DOSE
     Dates: start: 2011
  755. CLOZARIL [Suspect]
     Active Substance: CLOZAPINE
     Dosage: 6 G (ADDITIONAL INFORMATION ON DRUG: CLOZARIL ADDITIONAL INFO: OFF LABEL USE; CUMULATIVE DOSE TO FIR
     Route: 048
     Dates: start: 20100823, end: 20100823
  756. CLOZARIL [Suspect]
     Active Substance: CLOZAPINE
     Dosage: 50 MG, QD(1X/DAY (MIDDAY)) (ADDITIONAL INFORMATION ON DRUG: CLOZARIL ADDITIONAL INFO: OFF LABEL USE;
     Dates: start: 20100823, end: 20100823
  757. CLOZARIL [Suspect]
     Active Substance: CLOZAPINE
     Dosage: 600 MG, QD (ADDITIONAL INFORMATION ON DRUG: CLOZARIL ADDITIONAL INFO: OFF LABEL USE; CUMULATIVE DOSE
     Route: 048
     Dates: start: 2011
  758. CLOZARIL [Suspect]
     Active Substance: CLOZAPINE
     Dosage: (ADDITIONAL INFORMATION ON DRUG: CLOZARIL ADDITIONAL INFO: OFF LABEL USE; CUMULATIVE DOSE TO FIRST R
     Route: 048
  759. CLOZARIL [Suspect]
     Active Substance: CLOZAPINE
     Indication: Schizophrenia
     Dosage: 200 MG, BID
     Route: 050
     Dates: start: 20191209, end: 20191223
  760. CLOZARIL [Suspect]
     Active Substance: CLOZAPINE
     Dosage: 275 MG, QD (PM)
  761. CLOZARIL [Suspect]
     Active Substance: CLOZAPINE
     Dosage: 300 MG, QD (PM)
  762. CLOZARIL [Suspect]
     Active Substance: CLOZAPINE
     Dosage: 50 MG, QD (MIDDAY)
  763. CLOZARIL [Suspect]
     Active Substance: CLOZAPINE
     Dosage: 50 MG, QD (MIDDAY)
  764. CLOZARIL [Suspect]
     Active Substance: CLOZAPINE
     Dosage: 300 MG, QD (PM)
  765. CLOZARIL [Suspect]
     Active Substance: CLOZAPINE
     Dosage: 275 MG, QD
     Route: 048
     Dates: start: 20191207
  766. CLOZARIL [Suspect]
     Active Substance: CLOZAPINE
     Dosage: 50 MG, QD
     Route: 048
     Dates: start: 20191209, end: 20191223
  767. CLOZARIL [Suspect]
     Active Substance: CLOZAPINE
     Dosage: 100 MG, QD
     Route: 048
     Dates: start: 20191223, end: 20191223
  768. CLOZARIL [Suspect]
     Active Substance: CLOZAPINE
     Dosage: 275 MG, QD
  769. CLOZARIL [Suspect]
     Active Substance: CLOZAPINE
     Dosage: UNK
     Dates: start: 20100823
  770. CLOZARIL [Suspect]
     Active Substance: CLOZAPINE
     Dosage: 400 MG, QD
     Dates: start: 20100823, end: 20100823
  771. CLOZARIL [Suspect]
     Active Substance: CLOZAPINE
     Dosage: 300 MG, QD (PM;
     Dates: start: 20100823, end: 20200823
  772. CLOZARIL [Suspect]
     Active Substance: CLOZAPINE
     Dosage: 50 MG, QD, MIDDAY;
     Dates: start: 20100823, end: 20100823
  773. CLOZARIL [Suspect]
     Active Substance: CLOZAPINE
     Dosage: 300 MG, QD (PM)
     Dates: start: 20100823
  774. CLOZARIL [Suspect]
     Active Substance: CLOZAPINE
     Dosage: 1 DOSAGE FORM, QD (PM)
     Dates: start: 2011
  775. CLOZARIL [Suspect]
     Active Substance: CLOZAPINE
     Dosage: 1 DOSAGE FORM, QD
     Dates: start: 2011
  776. CLOZARIL [Suspect]
     Active Substance: CLOZAPINE
     Dosage: 245 MG, QD (AM)
     Dates: start: 2011
  777. CLOZARIL [Suspect]
     Active Substance: CLOZAPINE
     Dosage: 50 MG, QD
     Route: 050
     Dates: start: 20100823, end: 20100823
  778. CLOZARIL [Suspect]
     Active Substance: CLOZAPINE
     Dosage: 245 MG;
     Dates: start: 20191207
  779. CLOZARIL [Suspect]
     Active Substance: CLOZAPINE
     Dosage: 200 MG, BID
     Dates: start: 20191209, end: 20191223
  780. CLOZARIL [Suspect]
     Active Substance: CLOZAPINE
     Dosage: 245 MG, QD;
     Dates: start: 20191209, end: 20191223
  781. CLOZARIL [Suspect]
     Active Substance: CLOZAPINE
     Dosage: 6000 MG;
     Dates: start: 20191209, end: 20191223
  782. CLOZARIL [Suspect]
     Active Substance: CLOZAPINE
     Dosage: 245 MG
     Dates: start: 20100823, end: 20200823
  783. CLOZARIL [Suspect]
     Active Substance: CLOZAPINE
     Dosage: 245 MG, QD
     Dates: start: 20191209, end: 20191223
  784. CLOZARIL [Suspect]
     Active Substance: CLOZAPINE
     Dosage: 400 MG, BID
     Route: 050
     Dates: start: 20191223, end: 20191223
  785. CLOZARIL [Suspect]
     Active Substance: CLOZAPINE
     Dosage: 400 MG, QD
     Dates: start: 20191223, end: 20191223
  786. CLOZARIL [Suspect]
     Active Substance: CLOZAPINE
     Dosage: 400 MG, QD
     Dates: start: 20191223
  787. CLOZARIL [Suspect]
     Active Substance: CLOZAPINE
     Dosage: UNK; ??-???-2021 00:00
     Dates: start: 20200521
  788. CLOZARIL [Suspect]
     Active Substance: CLOZAPINE
     Dosage: UNK; ??-???-2020 00:00
     Dates: start: 20200521
  789. CLOZARIL [Suspect]
     Active Substance: CLOZAPINE
     Dosage: 100 MG, QD
     Dates: start: 20200521
  790. CLOZARIL [Suspect]
     Active Substance: CLOZAPINE
     Dosage: 6000 MG
     Route: 050
     Dates: start: 20200521
  791. CLOZARIL [Suspect]
     Active Substance: CLOZAPINE
     Dosage: 75 MG, QD
     Dates: start: 20200521
  792. CLOZARIL [Suspect]
     Active Substance: CLOZAPINE
     Dosage: 245 MG, QD (AM)
     Dates: start: 20200521
  793. CLOZARIL [Suspect]
     Active Substance: CLOZAPINE
     Dosage: 245 MG, QD
     Dates: start: 20200521
  794. CLOZARIL [Suspect]
     Active Substance: CLOZAPINE
     Dosage: 1 DOSAGE FORM, QD (PM); ;
     Dates: start: 20201207
  795. CLOZARIL [Suspect]
     Active Substance: CLOZAPINE
     Dosage: 800 MG, QD
     Route: 050
     Dates: start: 20201207
  796. CLOZARIL [Suspect]
     Active Substance: CLOZAPINE
     Dosage: 400 MG, QD
     Dates: start: 20201207
  797. CLOZARIL [Suspect]
     Active Substance: CLOZAPINE
     Dosage: 100 MG, QD (AM);
     Dates: start: 20210521
  798. CLOZARIL [Suspect]
     Active Substance: CLOZAPINE
     Dosage: 800 MG, QD
     Dates: start: 20220719
  799. CLOZARIL [Suspect]
     Active Substance: CLOZAPINE
     Dosage: UNK
     Dates: start: 20220719
  800. CLOZARIL [Suspect]
     Active Substance: CLOZAPINE
     Dosage: 400 MG, QD
     Dates: start: 20230823
  801. CLOZARIL [Suspect]
     Active Substance: CLOZAPINE
     Dosage: 300 MG, QD, (ADDITIONAL INFORMATION ON DRUG (FREE TEXT): CLOZARIL ADDITIONAL INFO: OFF LABEL USE; CU
     Route: 065
     Dates: start: 20100823
  802. CLOZARIL [Suspect]
     Active Substance: CLOZAPINE
     Dosage: 400 MG, QD
     Route: 050
     Dates: start: 20230823, end: 20230823
  803. CLOZARIL [Suspect]
     Active Substance: CLOZAPINE
     Dosage: 300 MG, QD
     Route: 050
     Dates: start: 20230823
  804. CLOZARIL [Suspect]
     Active Substance: CLOZAPINE
     Dosage: 800 MG, QD
     Dates: start: 20220719
  805. CLOZARIL [Suspect]
     Active Substance: CLOZAPINE
     Dosage: 275 MG, QD
     Route: 048
  806. CLOZARIL [Suspect]
     Active Substance: CLOZAPINE
     Dosage: 50 MG, QD
     Route: 050
     Dates: start: 20191209, end: 20191223
  807. CLOZARIL [Suspect]
     Active Substance: CLOZAPINE
     Dosage: 100 MG, QD
     Route: 050
     Dates: start: 20200521
  808. CLOZARIL [Suspect]
     Active Substance: CLOZAPINE
     Dosage: 400 MG, QD
     Dates: start: 20201207
  809. CLOZARIL [Suspect]
     Active Substance: CLOZAPINE
     Indication: Product used for unknown indication
     Dosage: 6000 MILLIGRAM
     Route: 048
     Dates: start: 20201209, end: 20201223
  810. CLOZARIL [Suspect]
     Active Substance: CLOZAPINE
     Indication: Schizophrenia
     Dosage: 100 MG, QD, (ADDITIONAL INFORMATION ON DRUG (FREE TEXT): CLOZARIL ADDITIONAL INFO: OFF LABEL USE; CU
     Route: 048
     Dates: start: 20191223, end: 20191223
  811. CLOZARIL [Suspect]
     Active Substance: CLOZAPINE
     Dosage: 400 MG, QD, (ADDITIONAL INFORMATION ON DRUG (FREE TEXT): CLOZARIL ADDITIONAL INFO: OFF LABEL USE; CU
     Route: 048
     Dates: start: 2011
  812. CLOZARIL [Suspect]
     Active Substance: CLOZAPINE
     Dosage: 50 MG, QD, (ADDITIONAL INFORMATION ON DRUG (FREE TEXT): CLOZARIL ADDITIONAL INFO: OFF LABEL USE; CUM
     Route: 048
     Dates: start: 20190809, end: 20190823
  813. CLOZARIL [Suspect]
     Active Substance: CLOZAPINE
     Dosage: 6000 MG, (ADDITIONAL INFORMATION ON DRUG (FREE TEXT): CLOZARIL ADDITIONAL INFO: OFF LABEL USE; CUMUL
     Route: 048
     Dates: start: 20201209, end: 20201223
  814. CLOZARIL [Suspect]
     Active Substance: CLOZAPINE
     Dosage: 245 MG, QD, (ADDITIONAL INFORMATION ON DRUG (FREE TEXT): CLOZARIL ADDITIONAL INFO: OFF LABEL USE; CU
     Route: 048
     Dates: start: 20190823, end: 20190823
  815. CLOZARIL [Suspect]
     Active Substance: CLOZAPINE
     Dosage: 6000 MG, (ADDITIONAL INFORMATION ON DRUG (FREE TEXT): CLOZARIL ADDITIONAL INFO: OFF LABEL USE; CUMUL
     Route: 048
     Dates: start: 20200207
  816. CLOZARIL [Suspect]
     Active Substance: CLOZAPINE
     Dosage: 245 MG, QD, (ADDITIONAL INFORMATION ON DRUG (FREE TEXT): CLOZARIL ADDITIONAL INFO: OFF LABEL USE; CU
     Route: 048
     Dates: start: 20191207
  817. CLOZARIL [Suspect]
     Active Substance: CLOZAPINE
     Dosage: 400 MG, QD, (ADDITIONAL INFORMATION ON DRUG (FREE TEXT): CLOZARIL ADDITIONAL INFO: OFF LABEL USE; CU
     Route: 048
     Dates: start: 20191209, end: 20191223
  818. CLOZARIL [Suspect]
     Active Substance: CLOZAPINE
     Dosage: 6000 MG, QD, (ADDITIONAL INFORMATION ON DRUG (FREE TEXT): CLOZARIL ADDITIONAL INFO: OFF LABEL USE; C
     Route: 048
     Dates: start: 20191207, end: 20191223
  819. CLOZARIL [Suspect]
     Active Substance: CLOZAPINE
     Dosage: UNK UNK, QD (ADDITIONAL INFORMATION ON DRUG (FREE TEXT): CLOZARIL ADDITIONAL INFO: OFF LABEL USE; CU
     Route: 048
     Dates: start: 20190823, end: 20190823
  820. CLOZARIL [Suspect]
     Active Substance: CLOZAPINE
     Dosage: UNK, (ADDITIONAL INFORMATION ON DRUG (FREE TEXT): CLOZARIL ADDITIONAL INFO: OFF LABEL USE; CUMULATIV
     Route: 048
     Dates: start: 20191223, end: 20191223
  821. CLOZARIL [Suspect]
     Active Substance: CLOZAPINE
     Dosage: 100 MG, QD, (ADDITIONAL INFORMATION ON DRUG (FREE TEXT): CLOZARIL ADDITIONAL INFO: OFF LABEL USE; CU
     Route: 048
     Dates: start: 2011
  822. CLOZARIL [Suspect]
     Active Substance: CLOZAPINE
     Dosage: 245 MG, QD, (ADDITIONAL INFORMATION ON DRUG (FREE TEXT): CLOZARIL ADDITIONAL INFO: OFF LABEL USE; CU
     Route: 048
     Dates: start: 20191209, end: 20191223
  823. CLOZARIL [Suspect]
     Active Substance: CLOZAPINE
     Dosage: 6000 MG, QD, (ADDITIONAL INFORMATION ON DRUG (FREE TEXT): CLOZARIL ADDITIONAL INFO: OFF LABEL USE; C
     Route: 048
     Dates: start: 20201223, end: 20201223
  824. CLOZARIL [Suspect]
     Active Substance: CLOZAPINE
     Dosage: UNK, (ADDITIONAL INFORMATION ON DRUG (FREE TEXT): CLOZARIL ADDITIONAL INFO: OFF LABEL USE; CUMULATIV
     Route: 048
     Dates: start: 20191209, end: 20191223
  825. CLOZARIL [Suspect]
     Active Substance: CLOZAPINE
     Dosage: 400 MG, QD, (ADDITIONAL INFORMATION ON DRUG (FREE TEXT): CLOZARIL ADDITIONAL INFO: OFF LABEL USE; CU
     Route: 048
     Dates: start: 20191223, end: 20191223
  826. CLOZARIL [Suspect]
     Active Substance: CLOZAPINE
     Dosage: 600 MG, QD, (ADDITIONAL INFORMATION ON DRUG (FREE TEXT): CLOZARIL ADDITIONAL INFO: OFF LABEL USE; CU
     Route: 048
     Dates: start: 2011
  827. CLOZARIL [Suspect]
     Active Substance: CLOZAPINE
     Dosage: 6000 MG, QD, (ADDITIONAL INFORMATION ON DRUG (FREE TEXT): CLOZARIL ADDITIONAL INFO: OFF LABEL USE; C
     Route: 048
     Dates: start: 20100823
  828. CLOZARIL [Suspect]
     Active Substance: CLOZAPINE
     Dosage: 50 MG, QD, (ADDITIONAL INFORMATION ON DRUG (FREE TEXT): CLOZARIL ADDITIONAL INFO: OFF LABEL USE; CUM
     Route: 048
     Dates: start: 20191209, end: 20191223
  829. CLOZARIL [Suspect]
     Active Substance: CLOZAPINE
     Dosage: 200 MILLIGRAM, BID, (ADDITIONAL INFORMATION ON DRUG (FREE TEXT): CLOZARIL ADDITIONAL INFO: OFF LABEL
     Route: 048
     Dates: start: 20191209, end: 20191223
  830. CLOZARIL [Suspect]
     Active Substance: CLOZAPINE
     Dosage: 6000 MILLIGRAM, (ADDITIONAL INFORMATION ON DRUG (FREE TEXT): CLOZARIL ADDITIONAL INFO: OFF LABEL USE
     Route: 048
     Dates: start: 20201207
  831. CLOZARIL [Suspect]
     Active Substance: CLOZAPINE
     Dosage: 275 MILLIGRAM, QD, (ADDITIONAL INFORMATION ON DRUG (FREE TEXT): CLOZARIL ADDITIONAL INFO: OFF LABEL
     Route: 048
     Dates: start: 20200521, end: 20200521
  832. CLOZARIL [Suspect]
     Active Substance: CLOZAPINE
     Dosage: 245 MILLIGRAM, QD, (ADDITIONAL INFORMATION ON DRUG (FREE TEXT): CLOZARIL ADDITIONAL INFO: OFF LABEL
     Route: 048
     Dates: start: 20200521
  833. CLOZARIL [Suspect]
     Active Substance: CLOZAPINE
     Dosage: 6000 MILLIGRAM, (ADDITIONAL INFORMATION ON DRUG (FREE TEXT): CLOZARIL ADDITIONAL INFO: OFF LABEL USE
     Route: 048
     Dates: start: 20200521
  834. CLOZARIL [Suspect]
     Active Substance: CLOZAPINE
     Dosage: 6000 MILLIGRAM, (ADDITIONAL INFORMATION ON DRUG (FREE TEXT): CLOZARIL ADDITIONAL INFO: OFF LABEL USE
     Route: 048
     Dates: start: 20200521
  835. CLOZARIL [Suspect]
     Active Substance: CLOZAPINE
     Dosage: 400 MILLIGRAM, BID, (ADDITIONAL INFORMATION ON DRUG (FREE TEXT): CLOZARIL ADDITIONAL INFO: OFF LABEL
     Route: 048
     Dates: start: 20200207
  836. CLOZARIL [Suspect]
     Active Substance: CLOZAPINE
     Dosage: 245 MILLIGRAM, (ADDITIONAL INFORMATION ON DRUG (FREE TEXT): CLOZARIL ADDITIONAL INFO: OFF LABEL USE;
     Route: 048
     Dates: start: 20191207
  837. CLOZARIL [Suspect]
     Active Substance: CLOZAPINE
     Dosage: 245 MILLIGRAM, QD, (ADDITIONAL INFORMATION ON DRUG (FREE TEXT): CLOZARIL ADDITIONAL INFO: OFF LABEL
     Route: 048
     Dates: start: 20100823
  838. CLOZARIL [Suspect]
     Active Substance: CLOZAPINE
     Dosage: 6000 MILLIGRAM, QD, (ADDITIONAL INFORMATION ON DRUG (FREE TEXT): CLOZARIL ADDITIONAL INFO: OFF LABEL
     Route: 048
     Dates: start: 20191223, end: 20191223
  839. CLOZARIL [Suspect]
     Active Substance: CLOZAPINE
     Dosage: 275 MILLIGRAM, QD, (ADDITIONAL INFORMATION ON DRUG (FREE TEXT): CLOZARIL ADDITIONAL INFO: OFF LABEL
     Route: 048
     Dates: start: 20200521
  840. CLOZARIL [Suspect]
     Active Substance: CLOZAPINE
     Dosage: 600 MILLIGRAM, QD, (ADDITIONAL INFORMATION ON DRUG (FREE TEXT): CLOZARIL ADDITIONAL INFO: OFF LABEL
     Route: 048
     Dates: start: 20200521, end: 2021
  841. CLOZARIL [Suspect]
     Active Substance: CLOZAPINE
     Dosage: 1 DOSAGE FORM, QD (ADDITIONAL INFORMATION ON DRUG (FREE TEXT): CLOZARIL ADDITIONAL INFO: OFF LABEL U
     Route: 048
     Dates: start: 2011
  842. CLOZARIL [Suspect]
     Active Substance: CLOZAPINE
     Dosage: 50 MILLIGRAM, QD (ADDITIONAL INFORMATION ON DRUG (FREE TEXT): CLOZARIL ADDITIONAL INFO: OFF LABEL US
     Route: 048
     Dates: start: 20200521
  843. CLOZARIL [Suspect]
     Active Substance: CLOZAPINE
     Dosage: 800 MG, DAILY
     Route: 048
  844. CLOZARIL [Suspect]
     Active Substance: CLOZAPINE
     Dosage: 275 MG, BID
     Route: 048
     Dates: start: 20201207
  845. CLOZARIL [Suspect]
     Active Substance: CLOZAPINE
     Dosage: 50 MG, DAILY
     Route: 048
  846. CLOZARIL [Suspect]
     Active Substance: CLOZAPINE
     Dosage: 245 MG, UNKNOWN
     Dates: start: 2011
  847. CLOZARIL [Suspect]
     Active Substance: CLOZAPINE
     Dosage: 400 MG, DAILY
     Route: 048
     Dates: start: 20191209, end: 20191223
  848. CLOZARIL [Suspect]
     Active Substance: CLOZAPINE
     Dosage: 245MG, QD, (ONCE A DAY, AM)
  849. CLOZARIL [Suspect]
     Active Substance: CLOZAPINE
     Dosage: 400MG, QD (200MG BID)
     Route: 048
  850. CLOZARIL [Suspect]
     Active Substance: CLOZAPINE
     Dosage: 200MG, BID
     Route: 048
  851. CLOZARIL [Suspect]
     Active Substance: CLOZAPINE
     Dosage: 400 MG, DAILY
     Route: 048
  852. CLOZARIL [Suspect]
     Active Substance: CLOZAPINE
     Dosage: 400 MILLIGRAM, (200MG, BIDOFF LABEL USE)
     Dates: start: 20191209, end: 20191223
  853. CLOZARIL [Suspect]
     Active Substance: CLOZAPINE
     Dosage: 800 MG, DAILY
     Route: 048
  854. CLOZARIL [Suspect]
     Active Substance: CLOZAPINE
     Dosage: UNK
     Route: 048
     Dates: start: 20100823
  855. CLOZARIL [Suspect]
     Active Substance: CLOZAPINE
     Dosage: 300 MG, DAILY
     Route: 048
  856. CLOZARIL [Suspect]
     Active Substance: CLOZAPINE
     Dosage: 6000 MILLIGRAM
     Route: 048
     Dates: start: 20201209, end: 20201223
  857. CLOZARIL [Suspect]
     Active Substance: CLOZAPINE
     Dosage: 400 MG, DAILY
     Route: 048
     Dates: start: 20191209, end: 20191223
  858. CLOZARIL [Suspect]
     Active Substance: CLOZAPINE
     Dosage: 245 MG, UNKNOWN
     Route: 048
     Dates: start: 20191209, end: 20191223
  859. CLOZARIL [Suspect]
     Active Substance: CLOZAPINE
     Dosage: 245 MILLIGRAM, QD, 1 ONCE A DAY (AM)
     Dates: start: 2011
  860. CLOZARIL [Suspect]
     Active Substance: CLOZAPINE
     Indication: Schizophrenia
     Dosage: UNK (ADDITIONAL INFORMATION ON DRUG: CLOZARIL ADDITIONAL INFO: OFF LABEL USE; CUMULATIVE DOSE TO FIR
     Route: 048
     Dates: start: 20191209, end: 20191223
  861. CLOZARIL [Suspect]
     Active Substance: CLOZAPINE
     Indication: Schizophrenia
     Dosage: 275 MILLIGRAM, QD, STOP DATE 2020 (ADDITIONAL INFORMATION ON DRUG: CLOZARIL ADDITIONAL INFO: OFF LAB
     Route: 048
     Dates: start: 20200521
  862. CLOZARIL [Suspect]
     Active Substance: CLOZAPINE
     Dosage: 400 MG, QD (ADDITIONAL INFORMATION ON DRUG: CLOZARIL ADDITIONAL INFO: OFF LABEL USE; CUMULATIVE DOSE
     Dates: start: 20200521
  863. CLOZARIL [Suspect]
     Active Substance: CLOZAPINE
     Dosage: (ADDITIONAL INFORMATION ON DRUG: CLOZARIL ADDITIONAL INFO: OFF LABEL USE; CUMULATIVE DOSE TO FIRST R
     Route: 048
     Dates: start: 20191207, end: 20191223
  864. CLOZARIL [Suspect]
     Active Substance: CLOZAPINE
     Dosage: 245 MG, QD (ADDITIONAL INFORMATION ON DRUG: CLOZARIL ADDITIONAL INFO: OFF LABEL USE; CUMULATIVE DOSE
     Route: 048
     Dates: start: 20191223, end: 20191223
  865. CLOZARIL [Suspect]
     Active Substance: CLOZAPINE
     Dosage: 50 MG, QD (MIDDAY) (ADDITIONAL INFORMATION ON DRUG: CLOZARIL ADDITIONAL INFO: OFF LABEL USE; CUMULAT
     Dates: start: 20200521
  866. CLOZARIL [Suspect]
     Active Substance: CLOZAPINE
     Dosage: 6000 MG (ADDITIONAL INFORMATION ON DRUG: CLOZARIL ADDITIONAL INFO: OFF LABEL USE; CUMULATIVE DOSE TO
     Route: 048
     Dates: start: 20210823
  867. CLOZARIL [Suspect]
     Active Substance: CLOZAPINE
     Dosage: 400 MG, QD (ADDITIONAL INFORMATION ON DRUG: CLOZARIL ADDITIONAL INFO: OFF LABEL USE; CUMULATIVE DOSE
     Route: 048
     Dates: start: 20191223, end: 20191223
  868. CLOZARIL [Suspect]
     Active Substance: CLOZAPINE
     Dosage: 6000 UNK (ADDITIONAL INFORMATION ON DRUG: CLOZARIL ADDITIONAL INFO: OFF LABEL USE; CUMULATIVE DOSE T
     Route: 048
     Dates: start: 20201207
  869. CLOZARIL [Suspect]
     Active Substance: CLOZAPINE
     Dosage: 300 MG, QD (ADDITIONAL INFORMATION ON DRUG: CLOZARIL ADDITIONAL INFO: OFF LABEL USE; CUMULATIVE DOSE
     Dates: start: 20201207
  870. CLOZARIL [Suspect]
     Active Substance: CLOZAPINE
     Dosage: UNK (ADDITIONAL INFORMATION ON DRUG: CLOZARIL ADDITIONAL INFO: OFF LABEL USE; CUMULATIVE DOSE TO FIR
  871. CLOZARIL [Suspect]
     Active Substance: CLOZAPINE
     Dosage: 50 MG, QD (ADDITIONAL INFORMATION ON DRUG: CLOZARIL ADDITIONAL INFO: OFF LABEL USE; CUMULATIVE DOSE
     Dates: start: 20191209, end: 20191223
  872. CLOZARIL [Suspect]
     Active Substance: CLOZAPINE
     Dosage: 50 MG, QD (ADDITIONAL INFORMATION ON DRUG: CLOZARIL ADDITIONAL INFO: OFF LABEL USE; CUMULATIVE DOSE
     Dates: start: 20191223, end: 20191223
  873. CLOZARIL [Suspect]
     Active Substance: CLOZAPINE
     Dosage: UNK (ADDITIONAL INFORMATION ON DRUG: CLOZARIL ADDITIONAL INFO: OFF LABEL USE; CUMULATIVE DOSE TO FIR
     Route: 048
     Dates: start: 2021
  874. CLOZARIL [Suspect]
     Active Substance: CLOZAPINE
     Dosage: 400 MG, QD (ADDITIONAL INFORMATION ON DRUG: CLOZARIL ADDITIONAL INFO: OFF LABEL USE; CUMULATIVE DOSE
     Route: 048
     Dates: start: 20191209
  875. CLOZARIL [Suspect]
     Active Substance: CLOZAPINE
     Dosage: (ADDITIONAL INFORMATION ON DRUG: CLOZARIL ADDITIONAL INFO: OFF LABEL USE; CUMULATIVE DOSE TO FIRST R
     Route: 048
     Dates: start: 2020
  876. CLOZARIL [Suspect]
     Active Substance: CLOZAPINE
     Dosage: (ADDITIONAL INFORMATION ON DRUG: CLOZARIL ADDITIONAL INFO: OFF LABEL USE; CUMULATIVE DOSE TO FIRST R
     Route: 048
     Dates: start: 20201207
  877. CLOZARIL [Suspect]
     Active Substance: CLOZAPINE
     Dosage: 1 DOSAGE FORM, QD (ADDITIONAL INFORMATION ON DRUG: CLOZARIL ADDITIONAL INFO: OFF LABEL USE; CUMULATI
     Route: 048
     Dates: start: 2011
  878. CLOZARIL [Suspect]
     Active Substance: CLOZAPINE
     Dosage: 200 MILLIGRAM, ONCE A DAY, 200 MILLIGRAM, BID (ADDITIONAL INFORMATION ON DRUG: CLOZARIL ADDITIONAL I
     Route: 048
     Dates: start: 20191223
  879. CLOZARIL [Suspect]
     Active Substance: CLOZAPINE
     Dosage: UNK (ADDITIONAL INFORMATION ON DRUG: CLOZARIL ADDITIONAL INFO: OFF LABEL USE; CUMULATIVE DOSE TO FIR
     Route: 048
     Dates: start: 20200521, end: 2021
  880. CLOZARIL [Suspect]
     Active Substance: CLOZAPINE
     Dosage: 400 MG, QD (ADDITIONAL INFORMATION ON DRUG: CLOZARIL ADDITIONAL INFO: OFF LABEL USE; CUMULATIVE DOSE
     Route: 048
  881. CLOZARIL [Suspect]
     Active Substance: CLOZAPINE
     Dosage: 800 MG, QD (ADDITIONAL INFORMATION ON DRUG: CLOZARIL ADDITIONAL INFO: OFF LABEL USE; CUMULATIVE DOSE
     Route: 048
     Dates: start: 20201207
  882. CLOZARIL [Suspect]
     Active Substance: CLOZAPINE
     Dosage: (ADDITIONAL INFORMATION ON DRUG: CLOZARIL ADDITIONAL INFO: OFF LABEL USE; CUMULATIVE DOSE TO FIRST R
     Route: 048
     Dates: start: 20191223, end: 20191223
  883. CLOZARIL [Suspect]
     Active Substance: CLOZAPINE
     Dosage: 245 MG (ADDITIONAL INFORMATION ON DRUG: CLOZARIL ADDITIONAL INFO: OFF LABEL USE; CUMULATIVE DOSE TO
     Route: 048
     Dates: start: 20191219, end: 20191223
  884. CLOZARIL [Suspect]
     Active Substance: CLOZAPINE
     Dosage: 400 MG, QD (ADDITIONAL INFORMATION ON DRUG: CLOZARIL ADDITIONAL INFO: OFF LABEL USE; CUMULATIVE DOSE
     Route: 048
     Dates: start: 20201207
  885. CLOZARIL [Suspect]
     Active Substance: CLOZAPINE
     Dosage: 50 MG, QD (ADDITIONAL INFORMATION ON DRUG: CLOZARIL ADDITIONAL INFO: OFF LABEL USE; CUMULATIVE DOSE
     Route: 048
     Dates: start: 20191223
  886. CLOZARIL [Suspect]
     Active Substance: CLOZAPINE
     Dosage: (ADDITIONAL INFORMATION ON DRUG: CLOZARIL ADDITIONAL INFO: OFF LABEL USE; CUMULATIVE DOSE TO FIRST R
  887. CLOZARIL [Suspect]
     Active Substance: CLOZAPINE
     Dosage: (ADDITIONAL INFORMATION ON DRUG: CLOZARIL ADDITIONAL INFO: OFF LABEL USE; CUMULATIVE DOSE TO FIRST R
     Route: 048
  888. CLOZARIL [Suspect]
     Active Substance: CLOZAPINE
     Dosage: 400 MG QD (200 MILLIGRAM, BID)  (ADDITIONAL INFORMATION ON DRUG: CLOZARIL ADDITIONAL INFO: OFF LABEL
     Route: 048
     Dates: start: 20191209, end: 20191223
  889. CLOZARIL [Suspect]
     Active Substance: CLOZAPINE
     Dosage: 200 MILLIGRAM, BID (ADDITIONAL INFORMATION ON DRUG: CLOZARIL ADDITIONAL INFO: OFF LABEL USE; CUMULAT
     Route: 048
     Dates: start: 20191209
  890. CLOZARIL [Suspect]
     Active Substance: CLOZAPINE
     Dosage: 245 MG, QD (ADDITIONAL INFORMATION ON DRUG: CLOZARIL ADDITIONAL INFO: OFF LABEL USE; CUMULATIVE DOSE
     Dates: start: 20191207
  891. CLOZARIL [Suspect]
     Active Substance: CLOZAPINE
     Dosage: 245 MG (ADDITIONAL INFORMATION ON DRUG: CLOZARIL ADDITIONAL INFO: OFF LABEL USE; CUMULATIVE DOSE TO
     Route: 048
     Dates: start: 20200521
  892. CLOZARIL [Suspect]
     Active Substance: CLOZAPINE
     Dosage: 300 MG, QD PM (ADDITIONAL INFORMATION ON DRUG: CLOZARIL ADDITIONAL INFO: OFF LABEL USE; CUMULATIVE D
     Route: 048
  893. CLOZARIL [Suspect]
     Active Substance: CLOZAPINE
     Dosage: 400 MILLILLIGRAM BID (ADDITIONAL INFORMATION ON DRUG: CLOZARIL ADDITIONAL INFO: OFF LABEL USE; CUMUL
  894. CLOZARIL [Suspect]
     Active Substance: CLOZAPINE
     Dosage: 400 MG QD  (ADDITIONAL INFORMATION ON DRUG: CLOZARIL ADDITIONAL INFO: OFF LABEL USE; CUMULATIVE DOSE
     Dates: start: 20191223, end: 20191223
  895. CLOZARIL [Suspect]
     Active Substance: CLOZAPINE
     Dosage: 400 MG QD  (ADDITIONAL INFORMATION ON DRUG: CLOZARIL ADDITIONAL INFO: OFF LABEL USE; CUMULATIVE DOSE
  896. CLOZARIL [Suspect]
     Active Substance: CLOZAPINE
     Dosage: 400 MG BID(ADDITIONAL INFORMATION ON DRUG: CLOZARIL ADDITIONAL INFO: OFF LABEL USE; CUMULATIVE DOSE
  897. CLOZARIL [Suspect]
     Active Substance: CLOZAPINE
     Dosage: 6000 MG (ADDITIONAL INFORMATION ON DRUG: CLOZARIL ADDITIONAL INFO: OFF LABEL USE; CUMULATIVE DOSE TO
     Route: 048
  898. CLOZARIL [Suspect]
     Active Substance: CLOZAPINE
     Indication: Schizophrenia
     Dosage: UNK
     Route: 048
     Dates: start: 20100823
  899. CLOZARIL [Suspect]
     Active Substance: CLOZAPINE
     Dosage: 400 MG, QD (DOSE TEXT: 400 MG, QD;CUMULATIVE DOSE TO FIRST REACTION: 758416.7 MG)
     Route: 048
     Dates: start: 20100823
  900. CLOZARIL [Suspect]
     Active Substance: CLOZAPINE
     Dosage: 6000 MG
     Route: 065
     Dates: start: 20100823, end: 20100823
  901. CLOZARIL [Suspect]
     Active Substance: CLOZAPINE
     Dosage: UNK
     Route: 048
     Dates: start: 20100823
  902. CLOZARIL [Suspect]
     Active Substance: CLOZAPINE
     Dosage: 245 MG
     Route: 048
     Dates: start: 20100823, end: 20200823
  903. CLOZARIL [Suspect]
     Active Substance: CLOZAPINE
     Dosage: UNK
     Route: 048
     Dates: start: 20100823, end: 20100823
  904. CLOZARIL [Suspect]
     Active Substance: CLOZAPINE
     Dosage: 300 MG, QD (DOSE TEXT: 300 MG, QD (PM); CUMULATIVE DOSE TO FIRST REACTION: 568812.5 MG)
     Route: 048
     Dates: start: 20100823
  905. CLOZARIL [Suspect]
     Active Substance: CLOZAPINE
     Dosage: 1 DF, QD 1 DOSAGE FORM, QD (PM)
     Route: 065
     Dates: start: 2011
  906. CLOZARIL [Suspect]
     Active Substance: CLOZAPINE
     Dosage: 245 MG, QD (AM)
     Route: 065
     Dates: start: 2011
  907. CLOZARIL [Suspect]
     Active Substance: CLOZAPINE
     Dosage: UNK
     Route: 065
     Dates: start: 20191207, end: 20191223
  908. CLOZARIL [Suspect]
     Active Substance: CLOZAPINE
     Dosage: 400 MG, QD (DOSE TEXT: 200 MG, BID ; CUMULATIVE DOSE TO FIRST REACTION: 599600.0 MG)
     Route: 048
     Dates: start: 20191209
  909. CLOZARIL [Suspect]
     Active Substance: CLOZAPINE
     Dosage: 400 MG, QD (DOSE TEXT: 200 MG, BID; CUMULATIVE DOSE TO FIRST REACTION: 599600.0 MG)
     Route: 048
     Dates: start: 20191209, end: 20191223
  910. CLOZARIL [Suspect]
     Active Substance: CLOZAPINE
     Dosage: 6000 MG
     Route: 048
     Dates: start: 20191209, end: 20191223
  911. CLOZARIL [Suspect]
     Active Substance: CLOZAPINE
     Dosage: 50 MG, QD (DOSE TEXT: 50 MG, QD; CUMULATIVE DOSE TO FIRST REACTION: 74950.0 MG )
     Route: 048
     Dates: start: 20191209, end: 20191223
  912. CLOZARIL [Suspect]
     Active Substance: CLOZAPINE
     Dosage: UNK
     Route: 065
     Dates: start: 20191209, end: 20191223
  913. CLOZARIL [Suspect]
     Active Substance: CLOZAPINE
     Dosage: 245 MG, QD  (DOSE TEXT: 245 MG, QD; CUMULATIVE DOSE TO FIRST REACTION: 367255.0 MG )
     Route: 048
     Dates: start: 20191209, end: 20191223
  914. CLOZARIL [Suspect]
     Active Substance: CLOZAPINE
     Dosage: 400 MG, QD   (DOSE TEXT: 400 MG, QD; CUMULATIVE DOSE TO FIRST REACTION: 605200.0 MG)
     Route: 048
     Dates: start: 20191223, end: 20191223
  915. CLOZARIL [Suspect]
     Active Substance: CLOZAPINE
     Dosage: UNK
     Route: 048
     Dates: start: 20191223, end: 20191223
  916. CLOZARIL [Suspect]
     Active Substance: CLOZAPINE
     Dosage: 275 MG, QD (DOSE TEXT: 275 MG, QD; CUMULATIVE DOSE TO FIRST REACTION: 457313.53)
     Route: 048
     Dates: start: 20200521
  917. CLOZARIL [Suspect]
     Active Substance: CLOZAPINE
     Dosage: 275 MG, QD (DOSE TEXT: 275 MG, QD (PM); CUMULATIVE DOSE TO FIRST REACTION: 457313.53 MG)
     Route: 065
     Dates: start: 20200521
  918. CLOZARIL [Suspect]
     Active Substance: CLOZAPINE
     Dosage: 6000 MILLIGRAM
     Route: 048
     Dates: start: 20200521, end: 2020
  919. CLOZARIL [Suspect]
     Active Substance: CLOZAPINE
     Dosage: 6000 MG
     Route: 048
     Dates: start: 20200521
  920. CLOZARIL [Suspect]
     Active Substance: CLOZAPINE
     Dosage: 100 MG, QD  (DOSE TEXT: 100 MG, QD; CUMULATIVE DOSE TO FIRST REACTION: 166295.83 MG)
     Route: 065
     Dates: start: 20200521
  921. CLOZARIL [Suspect]
     Active Substance: CLOZAPINE
     Dosage: 50 MG, QD, MIDDAY
     Route: 065
  922. CLOZARIL [Suspect]
     Active Substance: CLOZAPINE
     Dosage: 50 MG, QD, MIDDAY
     Route: 065
  923. CLOZARIL [Suspect]
     Active Substance: CLOZAPINE
     Dosage: 275 MG, QD (DOSE TEXT: 275 MG, QD; CUMULATIVE DOSE TO FIRST REACTION: 457313.53 MG )
     Route: 048
     Dates: start: 20200521, end: 2020
  924. CLOZARIL [Suspect]
     Active Substance: CLOZAPINE
     Dosage: 245 MG, QD
     Route: 048
     Dates: start: 20200521
  925. CLOZARIL [Suspect]
     Active Substance: CLOZAPINE
     Dosage: UNK
     Route: 048
     Dates: start: 20200521, end: 2021
  926. CLOZARIL [Suspect]
     Active Substance: CLOZAPINE
     Dosage: UNK
     Route: 048
     Dates: start: 20200521
  927. CLOZARIL [Suspect]
     Active Substance: CLOZAPINE
     Dosage: 245 MG, QD  (DOSE TEXT: 245 MG, QD; CUMULATIVE DOSE TO FIRST REACTION: 407424.78 MG)
     Route: 048
     Dates: start: 20200521
  928. CLOZARIL [Suspect]
     Active Substance: CLOZAPINE
     Dosage: UNK
     Route: 048
     Dates: start: 20200521, end: 2020
  929. CLOZARIL [Suspect]
     Active Substance: CLOZAPINE
     Dosage: UNK
     Route: 065
     Dates: start: 20201207
  930. CLOZARIL [Suspect]
     Active Substance: CLOZAPINE
     Dosage: 800 MG, QD (DOSE TEXT: 800 MG, QD; CUMULATIVE DOSE TO FIRST REACTION: 1490400.0 MG)
     Route: 048
     Dates: start: 20201207
  931. CLOZARIL [Suspect]
     Active Substance: CLOZAPINE
     Dosage: 800 MG, QD  (800 MG, QD; CUMULATIVE DOSE TO FIRST REACTION: 1490400.0 MG )
     Route: 048
     Dates: start: 20201207
  932. CLOZARIL [Suspect]
     Active Substance: CLOZAPINE
     Dosage: 400 MG, QD   (400 MG, QD; CUMULATIVE DOSE TO FIRST REACTION: 745200.0 MG)
     Route: 048
     Dates: start: 20201207
  933. CLOZARIL [Suspect]
     Active Substance: CLOZAPINE
     Dosage: 800 MG, QD
     Route: 048
     Dates: start: 20201207
  934. CLOZARIL [Suspect]
     Active Substance: CLOZAPINE
     Dosage: 6000 MG
     Route: 065
  935. CLOZARIL [Suspect]
     Active Substance: CLOZAPINE
     Dosage: 400 MG, QD (400 MG, QD (200 MG, BID)
     Route: 048
  936. CLOZARIL [Suspect]
     Active Substance: CLOZAPINE
     Dosage: 400 MG, QD
     Route: 048
     Dates: end: 20191223
  937. CLOZARIL [Suspect]
     Active Substance: CLOZAPINE
     Dosage: 275 MG, QD
     Route: 050
  938. CLOZARIL [Suspect]
     Active Substance: CLOZAPINE
     Dosage: 1 DOSAGE FORM, QD
     Route: 048
  939. CLOZARIL [Suspect]
     Active Substance: CLOZAPINE
     Dosage: 100 MG
     Route: 065
  940. CLOZARIL [Suspect]
     Active Substance: CLOZAPINE
     Dosage: UNK
     Route: 048
     Dates: end: 20220719
  941. CLOZARIL [Suspect]
     Active Substance: CLOZAPINE
     Dosage: 275 MG, QD (PM) (CUMULATIVE DOSE:457313.53 MG)
     Route: 065
     Dates: start: 20200521
  942. CLOZARIL [Suspect]
     Active Substance: CLOZAPINE
     Dosage: UNK
     Route: 065
     Dates: start: 20191209, end: 20191223
  943. CLOZARIL [Suspect]
     Active Substance: CLOZAPINE
     Dosage: UNK, UNK, AM
     Dates: start: 2011
  944. CLOZARIL [Suspect]
     Active Substance: CLOZAPINE
     Dosage: 6000 MILLIGRAM
     Route: 048
     Dates: start: 20100823
  945. CLOZARIL [Suspect]
     Active Substance: CLOZAPINE
     Dosage: 400 MG, QD
     Route: 048
     Dates: start: 20191223, end: 20191223
  946. CLOZARIL [Suspect]
     Active Substance: CLOZAPINE
     Dosage: UNK, UNK, UNKNOWN; ;
     Route: 048
     Dates: start: 20201207
  947. CLOZARIL [Suspect]
     Active Substance: CLOZAPINE
     Dosage: 100 MG, UNK, AM
  948. CLOZARIL [Suspect]
     Active Substance: CLOZAPINE
     Indication: Schizophrenia
     Dosage: 300 MG, QD, PM
  949. CLOZARIL [Suspect]
     Active Substance: CLOZAPINE
     Dosage: 200 MG, BID
  950. CLOZARIL [Suspect]
     Active Substance: CLOZAPINE
     Dosage: 100 MILLIGRAM, QD (CUMULATIVE DOSE: 6000 MG; ADDITIONAL INFORMATION ON DRUG: CLOZARIL)
     Route: 050
     Dates: start: 20200521
  951. CLOZARIL [Suspect]
     Active Substance: CLOZAPINE
     Dosage: 245 MG
     Route: 048
     Dates: start: 20191207
  952. CLOZARIL [Suspect]
     Active Substance: CLOZAPINE
     Dosage: UNK
     Route: 050
     Dates: start: 20100823, end: 20100823
  953. CLOZARIL [Suspect]
     Active Substance: CLOZAPINE
     Dosage: 100 MILLIGRAM
     Route: 050
  954. CLOZARIL [Suspect]
     Active Substance: CLOZAPINE
     Dosage: 6000 MILLIGRAM
     Route: 050
  955. CLOZARIL [Suspect]
     Active Substance: CLOZAPINE
     Dosage: 800 MILLIGRAM, QD
     Route: 050
     Dates: start: 20201207
  956. CLOZARIL [Suspect]
     Active Substance: CLOZAPINE
     Dosage: 6000 MILLIGRAM
     Route: 048
     Dates: start: 20201207
  957. CLOZARIL [Suspect]
     Active Substance: CLOZAPINE
     Dosage: 275 MILLIGRAM, QD
     Route: 048
     Dates: start: 20200521, end: 20200521
  958. CLOZARIL [Suspect]
     Active Substance: CLOZAPINE
     Dosage: 100 MILLIGRAM, QD
     Route: 048
     Dates: start: 2011
  959. CLOZARIL [Suspect]
     Active Substance: CLOZAPINE
     Dosage: UNK
     Route: 048
     Dates: start: 20191223, end: 20191223
  960. CLOZARIL [Suspect]
     Active Substance: CLOZAPINE
     Dosage: 245 MILLIGRAM, QD
     Route: 048
     Dates: start: 20190823, end: 20190823
  961. CLOZARIL [Suspect]
     Active Substance: CLOZAPINE
     Dosage: UNK
     Route: 050
     Dates: start: 20201207
  962. CLOZARIL [Suspect]
     Active Substance: CLOZAPINE
     Dosage: 6000 MILLIGRAM
     Route: 048
     Dates: start: 20191223, end: 20191223
  963. CLOZARIL [Suspect]
     Active Substance: CLOZAPINE
     Dosage: 50 MILLIGRAM, QD
     Route: 048
     Dates: start: 20191209, end: 20191223
  964. CLOZARIL [Suspect]
     Active Substance: CLOZAPINE
     Dosage: 400 MILLIGRAM, QD
     Route: 050
     Dates: start: 20201207
  965. CLOZARIL [Suspect]
     Active Substance: CLOZAPINE
     Dosage: 6000 MILLIGRAM
     Route: 048
     Dates: start: 20201209, end: 20201223
  966. CLOZARIL [Suspect]
     Active Substance: CLOZAPINE
     Dosage: 50 MILLIGRAM, QD
     Route: 048
     Dates: start: 20190809, end: 20190823
  967. CLOZARIL [Suspect]
     Active Substance: CLOZAPINE
     Dosage: 245 MILLIGRAM, QD
     Route: 048
     Dates: start: 20191207
  968. CLOZARIL [Suspect]
     Active Substance: CLOZAPINE
     Dosage: 600 MILLIGRAM, QD
     Route: 048
     Dates: start: 2011
  969. CLOZARIL [Suspect]
     Active Substance: CLOZAPINE
     Dosage: UNK
     Route: 050
     Dates: start: 20220719
  970. CLOZARIL [Suspect]
     Active Substance: CLOZAPINE
     Dosage: 1 DOSAGE FORM, QD
     Route: 048
     Dates: start: 2011
  971. CLOZARIL [Suspect]
     Active Substance: CLOZAPINE
     Dosage: UNK, UNK, QD
     Route: 048
     Dates: start: 20190823, end: 20190823
  972. CLOZARIL [Suspect]
     Active Substance: CLOZAPINE
     Dosage: 200 MILLIGRAM, BID
     Route: 048
     Dates: start: 20191209, end: 20191223
  973. CLOZARIL [Suspect]
     Active Substance: CLOZAPINE
     Dosage: 600 MILLIGRAM, QD
     Route: 048
     Dates: start: 20191207, end: 20191223
  974. CLOZARIL [Suspect]
     Active Substance: CLOZAPINE
     Dosage: 400 MILLIGRAM, QD
     Route: 048
     Dates: start: 2021
  975. CLOZARIL [Suspect]
     Active Substance: CLOZAPINE
     Dosage: 300 MILLIGRAM, QD
     Route: 065
  976. CLOZARIL [Suspect]
     Active Substance: CLOZAPINE
     Dosage: 100 MILLIGRAM, QD
     Route: 048
     Dates: start: 20191223, end: 20191223
  977. CLOZARIL [Suspect]
     Active Substance: CLOZAPINE
     Dosage: 400 MILLIGRAM, QD
     Route: 048
     Dates: start: 20191223, end: 20191223
  978. CLOZARIL [Suspect]
     Active Substance: CLOZAPINE
     Dosage: 400 MILLIGRAM, BID
     Route: 048
     Dates: start: 20200207
  979. CLOZARIL [Suspect]
     Active Substance: CLOZAPINE
     Dosage: 600 MILLIGRAM, QD
     Route: 048
     Dates: start: 20200521, end: 2021
  980. CLOZARIL [Suspect]
     Active Substance: CLOZAPINE
     Dosage: 245 MILLIGRAM, QD
     Route: 048
     Dates: start: 20100823
  981. CLOZARIL [Suspect]
     Active Substance: CLOZAPINE
     Dosage: 400 MILLIGRAM, QD (200MG, BID)
     Route: 050
  982. CLOZARIL [Suspect]
     Active Substance: CLOZAPINE
     Dosage: 300 MILLIGRAM, QD
     Route: 065
     Dates: start: 20100823
  983. CLOZARIL [Suspect]
     Active Substance: CLOZAPINE
     Dosage: 50 MILLIGRAM, QD (MIDDAY)
     Route: 050
  984. CLOZARIL [Suspect]
     Active Substance: CLOZAPINE
     Dosage: 6000 MILLIGRAM
     Route: 048
     Dates: start: 20201223, end: 20201223
  985. CLOZARIL [Suspect]
     Active Substance: CLOZAPINE
     Dosage: 50 MILLIGRAM, QD
     Route: 048
     Dates: start: 20200521
  986. CLOZARIL [Suspect]
     Active Substance: CLOZAPINE
     Dosage: UNK
     Route: 048
     Dates: start: 20191209, end: 20191223
  987. CLOZARIL [Suspect]
     Active Substance: CLOZAPINE
     Dosage: 275 MILLIGRAM, QD
     Route: 048
     Dates: end: 20200521
  988. CLOZARIL [Suspect]
     Active Substance: CLOZAPINE
     Dosage: 100 MILLIGRAM, QD, (AM)
     Route: 050
  989. CLOZARIL [Suspect]
     Active Substance: CLOZAPINE
     Dosage: 1 DOSAGE FORM, QD
     Route: 050
  990. CLOZARIL [Suspect]
     Active Substance: CLOZAPINE
     Dosage: 400 MILLIGRAM, QD (200 MG, BID)
     Route: 050
     Dates: start: 20191209, end: 20191223
  991. CLOZARIL [Suspect]
     Active Substance: CLOZAPINE
     Dosage: UNK
     Route: 050
     Dates: start: 20200521
  992. CLOZARIL [Suspect]
     Active Substance: CLOZAPINE
     Dosage: 245 MILLIGRAM, QD
     Route: 048
     Dates: start: 20191209, end: 20191223
  993. CLOZARIL [Suspect]
     Active Substance: CLOZAPINE
     Dosage: 6000 MILLIGRAM
     Route: 048
     Dates: start: 20100823
  994. CLOZARIL [Suspect]
     Active Substance: CLOZAPINE
     Dosage: 6000 MILLIGRAM
     Route: 048
     Dates: start: 20200207
  995. CLOZARIL [Suspect]
     Active Substance: CLOZAPINE
     Dosage: 400 MILLIGRAM, QD
     Route: 048
     Dates: start: 20191209, end: 20191223
  996. DOCETAXEL [Suspect]
     Active Substance: DOCETAXEL\DOCETAXEL ANHYDROUS
     Indication: Breast cancer metastatic
     Dosage: UNK
     Dates: start: 20151222
  997. DOCETAXEL [Suspect]
     Active Substance: DOCETAXEL\DOCETAXEL ANHYDROUS
     Dosage: 110 MILLIGRAM, Q3W (CUMULATIVE DOSE: 324.98)/30-SEP-2015
     Route: 042
     Dates: start: 20150930, end: 20151021
  998. DOCETAXEL [Suspect]
     Active Substance: DOCETAXEL\DOCETAXEL ANHYDROUS
     Dosage: 110 MILLIGRAM, Q3WK
     Route: 042
     Dates: start: 20150930, end: 20151021
  999. DOCETAXEL [Suspect]
     Active Substance: DOCETAXEL\DOCETAXEL ANHYDROUS
     Dosage: 220 MILLIGRAM
     Route: 065
     Dates: start: 20150930, end: 20151021
  1000. DOCETAXEL [Suspect]
     Active Substance: DOCETAXEL\DOCETAXEL ANHYDROUS
     Dosage: 220 MILLIGRAM
     Route: 065
  1001. DOCETAXEL [Suspect]
     Active Substance: DOCETAXEL\DOCETAXEL ANHYDROUS
     Dosage: 220 MILLIGRAM
     Route: 065
     Dates: start: 20151222
  1002. DOCETAXEL [Suspect]
     Active Substance: DOCETAXEL\DOCETAXEL ANHYDROUS
     Dosage: UNK
     Route: 065
     Dates: start: 20151222
  1003. DOCETAXEL [Suspect]
     Active Substance: DOCETAXEL\DOCETAXEL ANHYDROUS
     Dosage: UNK (CUMULATIVE DOSE TO FIRST REACTION: 110 MGADDITIONAL INFORMATION ON DRUG (FREE TEXT): CLOZARIL A
     Route: 065
     Dates: start: 20151222
  1004. DOCETAXEL [Suspect]
     Active Substance: DOCETAXEL\DOCETAXEL ANHYDROUS
     Dosage: 220 MILLIGRAM (CUMULATIVE DOSE TO FIRST REACTION: 110 MG ADDITIONAL INFORMATION ON DRUG (FREE TEXT):
     Route: 065
  1005. DOCETAXEL [Suspect]
     Active Substance: DOCETAXEL\DOCETAXEL ANHYDROUS
     Dosage: 220 MILLIGRAM ( CUMULATIVE DOSE TO FIRST REACTION: 110 MG ADDITIONAL INFORMATION ON DRUG (FREE TEXT)
     Route: 065
     Dates: start: 20151222
  1006. DOCETAXEL [Suspect]
     Active Substance: DOCETAXEL\DOCETAXEL ANHYDROUS
     Dosage: 220 MILLIGRAM (CUMULATIVE DOSE TO FIRST REACTION: 110 MG ADDITIONAL INFORMATION ON DRUG (FREE TEXT):
     Route: 065
     Dates: start: 20150930, end: 20151021
  1007. DOCETAXEL [Suspect]
     Active Substance: DOCETAXEL\DOCETAXEL ANHYDROUS
     Dosage: 110 MILLIGRAM, Q3W (CUMULATIVE DOSE TO FIRST REACTION: 110 MG ADDITIONAL INFORMATION ON DRUG (FREE T
     Route: 065
     Dates: start: 20150930, end: 20151021
  1008. DOCETAXEL [Suspect]
     Active Substance: DOCETAXEL\DOCETAXEL ANHYDROUS
     Indication: Breast cancer metastatic
     Dosage: 220 MG
     Route: 065
  1009. DOCETAXEL [Suspect]
     Active Substance: DOCETAXEL\DOCETAXEL ANHYDROUS
     Dosage: ENTERPRISES DOCETAXEL
  1010. DOCETAXEL [Suspect]
     Active Substance: DOCETAXEL\DOCETAXEL ANHYDROUS
     Dosage: 220 MG
     Route: 065
     Dates: start: 20151222
  1011. DOCETAXEL [Suspect]
     Active Substance: DOCETAXEL\DOCETAXEL ANHYDROUS
     Dosage: 110 MG Q3W (CUMULATIVE DOSE: 324.98)
     Dates: start: 20150930, end: 20151021
  1012. DOCETAXEL [Suspect]
     Active Substance: DOCETAXEL\DOCETAXEL ANHYDROUS
     Dosage: 220 MG
     Route: 050
     Dates: start: 20151222
  1013. DOCETAXEL [Suspect]
     Active Substance: DOCETAXEL\DOCETAXEL ANHYDROUS
     Dosage: 110 MILLIGRAM, Q3WK
     Route: 050
     Dates: start: 20150930, end: 20151021

REACTIONS (41)
  - Hallucination, auditory [Fatal]
  - Neoplasm progression [Fatal]
  - Schizophrenia [Fatal]
  - Lymphocyte count abnormal [Fatal]
  - Lymphocyte count abnormal [Fatal]
  - Lymphocyte count decreased [Fatal]
  - Neutrophil count decreased [Fatal]
  - Neuropathy peripheral [Fatal]
  - Leukocytosis [Fatal]
  - Leukocytosis [Fatal]
  - Thrombocytopenia [Fatal]
  - Neutrophil count increased [Fatal]
  - Psychotic disorder [Fatal]
  - Rhinalgia [Fatal]
  - SARS-CoV-2 test positive [Fatal]
  - Hospitalisation [Fatal]
  - Extrapyramidal disorder [Fatal]
  - Extrapyramidal disorder [Fatal]
  - Mucosal inflammation [Fatal]
  - Platelet count decreased [Fatal]
  - Leukopenia [Fatal]
  - Alopecia [Fatal]
  - Dyspepsia [Fatal]
  - Cellulitis [Fatal]
  - Fatigue [Fatal]
  - Fatigue [Fatal]
  - Nausea [Fatal]
  - COVID-19 [Fatal]
  - Neutropenia [Fatal]
  - Diarrhoea [Fatal]
  - Fatigue [Fatal]
  - Disease progression [Fatal]
  - Delusion of grandeur [Fatal]
  - Affective disorder [Fatal]
  - Seizure [Fatal]
  - Overdose [Fatal]
  - Off label use [Fatal]
  - Off label use [Fatal]
  - Off label use [Fatal]
  - Incorrect dose administered [Fatal]
  - Intentional product misuse [Fatal]

NARRATIVE: CASE EVENT DATE: 20151101
